FAERS Safety Report 23538816 (Version 10)
Quarter: 2025Q4

REPORT INFORMATION
  Report Type: Spontaneous
  Country: CA (occurrence: CA)
  Receive Date: 20240219
  Receipt Date: 20251201
  Transmission Date: 20260118
  Serious: Yes (Life-Threatening, Hospitalization, Other)
  Sender: MYLAN
  Company Number: CA-MYLANLABS-2024M1012872

PATIENT
  Age: 77 Year
  Sex: Female

DRUGS (1194)
  1. LEVOTHYROXINE [Interacting]
     Active Substance: LEVOTHYROXINE
     Indication: Urinary tract infection
     Dosage: 88 NANOGRAM, QD (1 EVERY 1 DAYS)
  2. LEVOTHYROXINE [Interacting]
     Active Substance: LEVOTHYROXINE
     Indication: Thyroid disorder
     Dosage: UNK
  3. LEVOTHYROXINE [Interacting]
     Active Substance: LEVOTHYROXINE
     Indication: Radioactive iodine therapy
     Dosage: 1 DOSAGE FORM, QD (1 EVERY 1 DAYS)
  4. LEVOTHYROXINE [Interacting]
     Active Substance: LEVOTHYROXINE
     Indication: Constipation
     Dosage: 0.09 MILLIGRAM, QD (1 EVERY 1 DAYS)
  5. LEVOTHYROXINE [Interacting]
     Active Substance: LEVOTHYROXINE
     Dosage: 0.09 MILLIGRAM, QD (1 EVERY 1 DAYS)
  6. LEVOTHYROXINE [Interacting]
     Active Substance: LEVOTHYROXINE
     Dosage: 1244 MILLIGRAM, QD (1 EVERY 1 DAYS)
  7. LEVOTHYROXINE [Interacting]
     Active Substance: LEVOTHYROXINE
     Dosage: 0.89 MILLIGRAM, QD (1 EVERY 1 DAYS)
  8. LEVOTHYROXINE [Interacting]
     Active Substance: LEVOTHYROXINE
     Dosage: 0.89 MILLIGRAM
  9. LEVOTHYROXINE [Interacting]
     Active Substance: LEVOTHYROXINE
     Dosage: 0.88 MILLIGRAM, QD (1 EVERY 1 DAYS)
  10. LEVOTHYROXINE [Interacting]
     Active Substance: LEVOTHYROXINE
     Dosage: 250 MILLIGRAM, QD (1 EVERY 1 DAYS)
  11. LEVOTHYROXINE [Interacting]
     Active Substance: LEVOTHYROXINE
     Dosage: 250 MILLIGRAM
  12. LEVOTHYROXINE [Interacting]
     Active Substance: LEVOTHYROXINE
     Dosage: 0.08 MILLIGRAM, QD
  13. LEVOTHYROXINE [Interacting]
     Active Substance: LEVOTHYROXINE
     Dosage: 0.088 MILLIGRAM, QD (1 EVERY 1 DAYS)
  14. LEVOTHYROXINE [Interacting]
     Active Substance: LEVOTHYROXINE
     Dosage: UNK
  15. LEVOTHYROXINE [Interacting]
     Active Substance: LEVOTHYROXINE
     Dosage: 88 MILLIGRAM, QD
  16. MORPHINE [Interacting]
     Active Substance: MORPHINE
     Indication: Fibromyalgia
     Dosage: UNK
  17. MORPHINE [Interacting]
     Active Substance: MORPHINE
     Indication: Dyspnoea
     Dosage: 10 MILLIGRAM, QD
  18. AMLODIPINE [Interacting]
     Active Substance: AMLODIPINE BESYLATE
     Indication: Hypertension
     Dosage: 5 MILLIGRAM, QD (1 EVERY 1 DAYS)
  19. AMLODIPINE [Interacting]
     Active Substance: AMLODIPINE BESYLATE
     Indication: Coronary artery disease
  20. ASPIRIN [Interacting]
     Active Substance: ASPIRIN
     Indication: Cerebrovascular accident
     Dosage: 1 DOSAGE FORM, BID (1 EVERY 12 HOURS)
  21. ASPIRIN [Interacting]
     Active Substance: ASPIRIN
     Indication: Hypertension
     Dosage: UNK
  22. ASPIRIN [Interacting]
     Active Substance: ASPIRIN
     Indication: Coronary artery disease
     Dosage: UNK
  23. ASPIRIN [Interacting]
     Active Substance: ASPIRIN
     Indication: Angina pectoris
  24. SENNOSIDES [Interacting]
     Active Substance: SENNOSIDES
     Indication: Pain
     Dosage: UNK
  25. ACETAMINOPHEN\CODEINE PHOSPHATE [Interacting]
     Active Substance: ACETAMINOPHEN\CODEINE PHOSPHATE
     Indication: Pain
     Dosage: UNK
  26. ZINC [Interacting]
     Active Substance: ZINC
     Indication: Product used for unknown indication
     Dosage: UNK
  27. MAGNESIUM OXIDE [Interacting]
     Active Substance: MAGNESIUM OXIDE
     Indication: Constipation
     Dosage: UNK
  28. MAGNESIUM OXIDE [Interacting]
     Active Substance: MAGNESIUM OXIDE
     Dosage: 1 DOSAGE FORM, BID (1 EVERY 12 HOURS)
  29. MAGNESIUM OXIDE [Interacting]
     Active Substance: MAGNESIUM OXIDE
     Dosage: 2 DOSAGE FORM, QD
  30. MAGNESIUM OXIDE [Interacting]
     Active Substance: MAGNESIUM OXIDE
     Dosage: 622 MILLIGRAM, QD
  31. CAFFEINE [Interacting]
     Active Substance: CAFFEINE
     Indication: Product used for unknown indication
     Dosage: UNK
  32. AMLODIPINE BESYLATE [Interacting]
     Active Substance: AMLODIPINE BESYLATE
     Indication: Hypertension
     Dosage: UNK
  33. AMLODIPINE BESYLATE [Interacting]
     Active Substance: AMLODIPINE BESYLATE
     Indication: Coronary artery disease
     Dosage: 50 MILLIGRAM, QD (1 EVERY 1 DAYS)
  34. AMLODIPINE BESYLATE [Interacting]
     Active Substance: AMLODIPINE BESYLATE
     Indication: Constipation
     Dosage: 5 MILLIGRAM, QD (1 EVERY 1 DAYS)
  35. AMLODIPINE BESYLATE [Interacting]
     Active Substance: AMLODIPINE BESYLATE
     Indication: Chest pain
     Dosage: 5 MILLIGRAM
  36. AMLODIPINE BESYLATE [Interacting]
     Active Substance: AMLODIPINE BESYLATE
     Indication: Angina pectoris
  37. NITROGLYCERIN [Interacting]
     Active Substance: NITROGLYCERIN
     Indication: Coronary artery disease
     Dosage: UNK
  38. NITROGLYCERIN [Interacting]
     Active Substance: NITROGLYCERIN
     Indication: Angina pectoris
     Dosage: 0.4 MILLIGRAM
  39. NITROGLYCERIN [Interacting]
     Active Substance: NITROGLYCERIN
     Dosage: 1 DOSAGE FORM, QD (1 EVERY 1 DAY)
  40. NITROGLYCERIN [Interacting]
     Active Substance: NITROGLYCERIN
     Dosage: 0.6 MILLIGRAM
  41. NITROGLYCERIN [Interacting]
     Active Substance: NITROGLYCERIN
     Dosage: 0.4 MILLIGRAM, QD (1 EVERY 1 DAYS)
  42. NITROGLYCERIN [Interacting]
     Active Substance: NITROGLYCERIN
     Dosage: UNK
  43. NITROGLYCERIN [Interacting]
     Active Substance: NITROGLYCERIN
     Dosage: 6 MILLIGRAM, QD (1 EVERY 1 DAYS)
  44. NITROGLYCERIN [Interacting]
     Active Substance: NITROGLYCERIN
     Dosage: 0.6 MILLIGRAM, QD (1 EVERY 1 DAYS)
  45. NITROGLYCERIN [Interacting]
     Active Substance: NITROGLYCERIN
     Indication: Hypertension
     Dosage: UNK
  46. NITROGLYCERIN [Interacting]
     Active Substance: NITROGLYCERIN
     Indication: Coronary artery disease
     Dosage: 0.4 MILLIGRAM
  47. NITROGLYCERIN [Interacting]
     Active Substance: NITROGLYCERIN
     Indication: Chest pain
     Dosage: 0.6 MILLIGRAM, QD (1 EVERY 1 DAYS)
  48. NITROGLYCERIN [Interacting]
     Active Substance: NITROGLYCERIN
     Indication: Angina pectoris
     Dosage: 1 DOSAGE FORM, QD (1 EVERY 1 DAYS)
  49. NITROGLYCERIN [Interacting]
     Active Substance: NITROGLYCERIN
     Dosage: 0.6 MILLIGRAM
  50. NITROGLYCERIN [Interacting]
     Active Substance: NITROGLYCERIN
     Dosage: 0.1 DOSAGE FORM, QD (1 EVERY 1 DAYS)
  51. NITROGLYCERIN [Interacting]
     Active Substance: NITROGLYCERIN
     Dosage: 0.6 MILLIGRAM, QD (1 EVERY 1 DAYS)
  52. NITROGLYCERIN [Interacting]
     Active Substance: NITROGLYCERIN
     Dosage: 0.4 MILLIGRAM, QD (1 EVERY 1 DAY)
  53. NITROGLYCERIN [Interacting]
     Active Substance: NITROGLYCERIN
     Dosage: 40 MILLIGRAM, QD (1 EVERY 1 DAYS)
  54. NITROGLYCERIN [Interacting]
     Active Substance: NITROGLYCERIN
     Dosage: 0.4 MILLIGRAM
  55. NITROGLYCERIN [Interacting]
     Active Substance: NITROGLYCERIN
     Dosage: 0.6 MILLIGRAM
  56. NITROGLYCERIN [Interacting]
     Active Substance: NITROGLYCERIN
     Dosage: 0.1 DOSAGE FORM, QD (1 EVERY 1 DAYS)
  57. ACEBUTOLOL HYDROCHLORIDE [Interacting]
     Active Substance: ACEBUTOLOL HYDROCHLORIDE
     Indication: Hypertension
     Dosage: 100 MILLIGRAM, BID (2 EVERY 1 DAYS)
  58. ACEBUTOLOL HYDROCHLORIDE [Interacting]
     Active Substance: ACEBUTOLOL HYDROCHLORIDE
     Indication: Coronary artery disease
     Dosage: 200 MILLIGRAM, BID (2 EVERY 1 DAYS)
  59. ACEBUTOLOL HYDROCHLORIDE [Interacting]
     Active Substance: ACEBUTOLOL HYDROCHLORIDE
     Indication: Angina pectoris
     Dosage: 200 MILLIGRAM
  60. ACEBUTOLOL HYDROCHLORIDE [Interacting]
     Active Substance: ACEBUTOLOL HYDROCHLORIDE
     Indication: Constipation
     Dosage: 500 MILLIGRAM
  61. ACEBUTOLOL HYDROCHLORIDE [Interacting]
     Active Substance: ACEBUTOLOL HYDROCHLORIDE
     Indication: Chest pain
     Dosage: 50 MILLIGRAM, QD (1 EVERY 1 DAYS)
  62. ACEBUTOLOL HYDROCHLORIDE [Interacting]
     Active Substance: ACEBUTOLOL HYDROCHLORIDE
     Indication: Chronic obstructive pulmonary disease
     Dosage: 1000 MILLIGRAM, QW (1 EVERY 1 WEEKS)
  63. ACEBUTOLOL HYDROCHLORIDE [Interacting]
     Active Substance: ACEBUTOLOL HYDROCHLORIDE
     Dosage: 800 MILLIGRAM, QW (1 EVERY 1 WEEKS)
  64. ACEBUTOLOL HYDROCHLORIDE [Interacting]
     Active Substance: ACEBUTOLOL HYDROCHLORIDE
     Dosage: 500 MILLIGRAM, QW (1 EVERY 1 WEEKS)
  65. ACEBUTOLOL HYDROCHLORIDE [Interacting]
     Active Substance: ACEBUTOLOL HYDROCHLORIDE
     Dosage: 100 MILLIGRAM, QW (1 EVERY 1 WEEKS)
  66. ACEBUTOLOL HYDROCHLORIDE [Interacting]
     Active Substance: ACEBUTOLOL HYDROCHLORIDE
     Dosage: 50 MILLIGRAM
  67. ACEBUTOLOL HYDROCHLORIDE [Interacting]
     Active Substance: ACEBUTOLOL HYDROCHLORIDE
     Dosage: 200 MILLIGRAM, QW (1 EVERY 1 WEEKS)
  68. ACEBUTOLOL HYDROCHLORIDE [Interacting]
     Active Substance: ACEBUTOLOL HYDROCHLORIDE
     Dosage: 200 MILLIGRAM, QD (1 EVERY 1 DAYS)
  69. ACEBUTOLOL HYDROCHLORIDE [Interacting]
     Active Substance: ACEBUTOLOL HYDROCHLORIDE
     Dosage: 400 MILLIGRAM, QW (1 EVERY 1 WEEKS)
  70. ACEBUTOLOL HYDROCHLORIDE [Interacting]
     Active Substance: ACEBUTOLOL HYDROCHLORIDE
     Dosage: 100 MILLIGRAM
  71. ACEBUTOLOL HYDROCHLORIDE [Interacting]
     Active Substance: ACEBUTOLOL HYDROCHLORIDE
     Dosage: 100 MILLIGRAM (5 EVERY 1 DAYS)
  72. ACEBUTOLOL HYDROCHLORIDE [Interacting]
     Active Substance: ACEBUTOLOL HYDROCHLORIDE
     Dosage: 50 MILLIGRAM, BID (2 EVERY 1 DAYS)
  73. ACEBUTOLOL HYDROCHLORIDE [Interacting]
     Active Substance: ACEBUTOLOL HYDROCHLORIDE
     Dosage: 100 MILLIGRAM, QD (1 EVERY 1 DAY)
  74. ACEBUTOLOL HYDROCHLORIDE [Interacting]
     Active Substance: ACEBUTOLOL HYDROCHLORIDE
     Dosage: 400 MILLIGRAM, QD (1 EVERY 1 DAY)
  75. ACEBUTOLOL HYDROCHLORIDE [Interacting]
     Active Substance: ACEBUTOLOL HYDROCHLORIDE
     Dosage: UNK
  76. ACEBUTOLOL HYDROCHLORIDE [Interacting]
     Active Substance: ACEBUTOLOL HYDROCHLORIDE
     Dosage: 50 MILLIGRAM, (1 EVERY 12 HOURS)
  77. ACEBUTOLOL HYDROCHLORIDE [Interacting]
     Active Substance: ACEBUTOLOL HYDROCHLORIDE
     Dosage: 200 MILLIGRAM, (1 EVERY 12 HOURS)
  78. ACEBUTOLOL HYDROCHLORIDE [Interacting]
     Active Substance: ACEBUTOLOL HYDROCHLORIDE
     Dosage: 400 MILLIGRAM, BID (2 EVERY 1 DAY)
  79. ACEBUTOLOL HYDROCHLORIDE [Interacting]
     Active Substance: ACEBUTOLOL HYDROCHLORIDE
     Dosage: 500 MILLIGRAM, QD (1 EVERY 1 DAY)
  80. ACEBUTOLOL HYDROCHLORIDE [Interacting]
     Active Substance: ACEBUTOLOL HYDROCHLORIDE
     Dosage: 800 MILLIGRAM, QD (1 EVERY 1 DAY)
  81. ACEBUTOLOL HYDROCHLORIDE [Interacting]
     Active Substance: ACEBUTOLOL HYDROCHLORIDE
     Indication: Hypertension
     Dosage: 400 MILLIGRAM, QW (1 EVERY 1 WEEKS)
  82. ACEBUTOLOL HYDROCHLORIDE [Interacting]
     Active Substance: ACEBUTOLOL HYDROCHLORIDE
     Indication: Coronary artery disease
     Dosage: 800 MILLIGRAM, QD (1 EVERY 1 DAYS)
  83. ACEBUTOLOL HYDROCHLORIDE [Interacting]
     Active Substance: ACEBUTOLOL HYDROCHLORIDE
     Indication: Angina pectoris
     Dosage: 50 MILLIGRAM, QD (1 EVERY 1 DAYS)
  84. ACEBUTOLOL HYDROCHLORIDE [Interacting]
     Active Substance: ACEBUTOLOL HYDROCHLORIDE
     Indication: Constipation
     Dosage: 100 MILLIGRAM, QD (1 EVERY 1 DAYS)
  85. ACEBUTOLOL HYDROCHLORIDE [Interacting]
     Active Substance: ACEBUTOLOL HYDROCHLORIDE
     Indication: Chest pain
     Dosage: 1000 MILLIGRAM, QW (1 EVERY 1 WEEKS)
  86. ACEBUTOLOL HYDROCHLORIDE [Interacting]
     Active Substance: ACEBUTOLOL HYDROCHLORIDE
     Dosage: 500 MILLIGRAM, QD (1 EVERY 1 DAYS)
  87. ACEBUTOLOL HYDROCHLORIDE [Interacting]
     Active Substance: ACEBUTOLOL HYDROCHLORIDE
     Dosage: 200 MILLIGRAM, BID (1 EVERY 12 HOURS)
  88. ACEBUTOLOL HYDROCHLORIDE [Interacting]
     Active Substance: ACEBUTOLOL HYDROCHLORIDE
     Dosage: 200 MILLIGRAM, QD (1 EVERY 1 DAYS)
  89. ACEBUTOLOL HYDROCHLORIDE [Interacting]
     Active Substance: ACEBUTOLOL HYDROCHLORIDE
     Dosage: 400 MILLIGRAM, QD (1 EVERY 1 DAYS)
  90. ACEBUTOLOL HYDROCHLORIDE [Interacting]
     Active Substance: ACEBUTOLOL HYDROCHLORIDE
     Dosage: 50 MILLIGRAM, BID (1 EVERY 12 HOURS)
  91. ACEBUTOLOL HYDROCHLORIDE [Interacting]
     Active Substance: ACEBUTOLOL HYDROCHLORIDE
     Dosage: 200 MILLIGRAM
  92. ACEBUTOLOL HYDROCHLORIDE [Interacting]
     Active Substance: ACEBUTOLOL HYDROCHLORIDE
     Dosage: 100 MILLIGRAM
  93. ACEBUTOLOL HYDROCHLORIDE [Interacting]
     Active Substance: ACEBUTOLOL HYDROCHLORIDE
     Dosage: 400 MILLIGRAM, BID (1 EVERY 12 HOURS)
  94. ACEBUTOLOL HYDROCHLORIDE [Interacting]
     Active Substance: ACEBUTOLOL HYDROCHLORIDE
     Dosage: 100 MILLIGRAM, BID (1 EVERY 12 HOURS)
  95. ACEBUTOLOL HYDROCHLORIDE [Interacting]
     Active Substance: ACEBUTOLOL HYDROCHLORIDE
     Dosage: UNK
  96. ACEBUTOLOL HYDROCHLORIDE [Interacting]
     Active Substance: ACEBUTOLOL HYDROCHLORIDE
     Dosage: 100 MILLIGRAM, Q2D (1 EVERY 2 DAYS)
  97. ACETAMINOPHEN [Interacting]
     Active Substance: ACETAMINOPHEN
     Indication: Fibromyalgia
     Dosage: UNK
  98. ACETAMINOPHEN [Interacting]
     Active Substance: ACETAMINOPHEN
     Indication: Radioactive iodine therapy
     Dosage: 650 MILLIGRAM
  99. ACETAMINOPHEN [Interacting]
     Active Substance: ACETAMINOPHEN
     Indication: Pain
     Dosage: 650 MILLIGRAM, QD (1 EVERY 1 DAYS)
  100. ACETAMINOPHEN [Interacting]
     Active Substance: ACETAMINOPHEN
     Indication: Angina pectoris
     Dosage: 650 MILLIGRAM,QID (1 EVERY 6 HOURS)
  101. ACETAMINOPHEN [Interacting]
     Active Substance: ACETAMINOPHEN
     Dosage: 600 MILLIGRAM, QD ( 1 EVERY 1 DAYS)
  102. ACETAMINOPHEN [Interacting]
     Active Substance: ACETAMINOPHEN
     Dosage: 600 MILLIGRAM
  103. ACETAMINOPHEN [Interacting]
     Active Substance: ACETAMINOPHEN
     Dosage: 50 MILLIGRAM, QD (1 EVERY 1 DAYS))
  104. ACETAMINOPHEN [Interacting]
     Active Substance: ACETAMINOPHEN
     Dosage: 50 MILLIGRAM
  105. ACETAMINOSALOL\ASPIRIN\CAFFEINE [Interacting]
     Active Substance: ACETAMINOSALOL\ASPIRIN\CAFFEINE
     Indication: Hypertension
     Dosage: UNK
  106. ACETAMINOSALOL\ASPIRIN\CAFFEINE [Interacting]
     Active Substance: ACETAMINOSALOL\ASPIRIN\CAFFEINE
     Indication: Coronary artery disease
  107. ACETAMINOSALOL\ASPIRIN\CAFFEINE [Interacting]
     Active Substance: ACETAMINOSALOL\ASPIRIN\CAFFEINE
     Indication: Cerebrovascular accident
  108. ACETAMINOSALOL\ASPIRIN\CAFFEINE [Interacting]
     Active Substance: ACETAMINOSALOL\ASPIRIN\CAFFEINE
     Indication: Angina pectoris
  109. ACETAMINOPHEN\CAFFEINE [Interacting]
     Active Substance: ACETAMINOPHEN\CAFFEINE
     Indication: Radioactive iodine therapy
     Dosage: 600 MILLIGRAM, QD (1 EVERY 1 DAYS)
  110. ACETAMINOPHEN\CAFFEINE [Interacting]
     Active Substance: ACETAMINOPHEN\CAFFEINE
     Indication: Pain
     Dosage: UNK
  111. ACETAMINOPHEN\CAFFEINE [Interacting]
     Active Substance: ACETAMINOPHEN\CAFFEINE
     Indication: Hypertension
     Dosage: 600 MILLIGRAM
  112. ACETAMINOPHEN\CAFFEINE [Interacting]
     Active Substance: ACETAMINOPHEN\CAFFEINE
     Indication: Coronary artery disease
     Dosage: 60 MILLIGRAM, QD (1 EVERY 1 DAYS)
  113. ACETAMINOPHEN\CAFFEINE [Interacting]
     Active Substance: ACETAMINOPHEN\CAFFEINE
     Indication: Chronic obstructive pulmonary disease
     Dosage: 60 MILLIGRAM
  114. ACETAMINOPHEN\CAFFEINE [Interacting]
     Active Substance: ACETAMINOPHEN\CAFFEINE
     Indication: Chest pain
     Dosage: 650 MILLIGRAM
  115. ACETAMINOPHEN\CAFFEINE [Interacting]
     Active Substance: ACETAMINOPHEN\CAFFEINE
     Indication: Cerebrovascular accident
     Dosage: 650 MILLIGRAM, QD (1 EVERY 1 DAY)
  116. ACETAMINOPHEN\CAFFEINE [Interacting]
     Active Substance: ACETAMINOPHEN\CAFFEINE
     Indication: Angina pectoris
     Dosage: 50 MILLIGRAM, QD (1 EVERY 1 DAY)
  117. AMITRIPTYLINE [Interacting]
     Active Substance: AMITRIPTYLINE
     Indication: Insomnia
     Dosage: 50 MILLIGRAM, QD (1 EVERY 1 DAYS)
  118. AMITRIPTYLINE [Interacting]
     Active Substance: AMITRIPTYLINE
     Indication: Chest pain
     Dosage: 75 MILLIGRAM, QD (1 EVERY 1 DAYS)
  119. AMITRIPTYLINE [Interacting]
     Active Substance: AMITRIPTYLINE
     Dosage: 25 MILLIGRAM, QD
  120. AMITRIPTYLINE [Interacting]
     Active Substance: AMITRIPTYLINE
     Indication: Thyroid disorder
     Dosage: 25 MILLIGRAM, QD (1 EVERY 1 DAY)
  121. AMITRIPTYLINE [Interacting]
     Active Substance: AMITRIPTYLINE
     Indication: Radioactive iodine therapy
     Dosage: 75 MILLIGRAM, QD (1 EVERY 1 DAY)
  122. AMITRIPTYLINE [Interacting]
     Active Substance: AMITRIPTYLINE
     Indication: Prophylaxis
     Dosage: 750 MILLIGRAM, QD (1 EVERY 1 DAY)
  123. AMITRIPTYLINE [Interacting]
     Active Substance: AMITRIPTYLINE
     Indication: Pain
     Dosage: 50 MILLIGRAM, QD (1 EVERY 1 DAY)
  124. AMITRIPTYLINE [Interacting]
     Active Substance: AMITRIPTYLINE
     Indication: Oedema
     Dosage: 0.6 MILLIGRAM
  125. AMITRIPTYLINE [Interacting]
     Active Substance: AMITRIPTYLINE
     Indication: Insomnia
     Dosage: UNK
  126. AMITRIPTYLINE [Interacting]
     Active Substance: AMITRIPTYLINE
     Indication: Hypertension
     Dosage: 360 MILLIGRAM
  127. AMITRIPTYLINE [Interacting]
     Active Substance: AMITRIPTYLINE
     Indication: Fibromyalgia
     Dosage: 0.4 MILLIGRAM
  128. AMITRIPTYLINE [Interacting]
     Active Substance: AMITRIPTYLINE
     Indication: Duodenal ulcer
     Dosage: 750 MILLIGRAM
  129. AMITRIPTYLINE [Interacting]
     Active Substance: AMITRIPTYLINE
     Indication: Dementia
     Dosage: 650 MILLIGRAM
  130. AMITRIPTYLINE [Interacting]
     Active Substance: AMITRIPTYLINE
     Indication: Coronary artery disease
     Dosage: 16 MILLIGRAM
  131. AMITRIPTYLINE [Interacting]
     Active Substance: AMITRIPTYLINE
     Indication: Constipation
     Dosage: 200 MILLIGRAM
  132. AMITRIPTYLINE [Interacting]
     Active Substance: AMITRIPTYLINE
     Indication: Chest pain
     Dosage: 500 MILLIGRAM
  133. AMITRIPTYLINE [Interacting]
     Active Substance: AMITRIPTYLINE
     Indication: Arthritis
  134. AMITRIPTYLINE [Interacting]
     Active Substance: AMITRIPTYLINE
     Indication: Angina pectoris
  135. AMITRIPTYLINE HYDROCHLORIDE [Interacting]
     Active Substance: AMITRIPTYLINE HYDROCHLORIDE
     Indication: Thyroid disorder
     Dosage: UNK
  136. AMITRIPTYLINE HYDROCHLORIDE [Interacting]
     Active Substance: AMITRIPTYLINE HYDROCHLORIDE
     Indication: Radioactive iodine therapy
     Dosage: 50 MILLIGRAM, QD (1 EVERY 1 DAYS)
  137. AMITRIPTYLINE HYDROCHLORIDE [Interacting]
     Active Substance: AMITRIPTYLINE HYDROCHLORIDE
     Indication: Prophylaxis
     Dosage: 75 MILLIGRAM, QD (1 EVERY 1 DAYS)
  138. AMITRIPTYLINE HYDROCHLORIDE [Interacting]
     Active Substance: AMITRIPTYLINE HYDROCHLORIDE
     Indication: Pain
     Dosage: UNK
  139. AMITRIPTYLINE HYDROCHLORIDE [Interacting]
     Active Substance: AMITRIPTYLINE HYDROCHLORIDE
     Indication: Oedema
     Dosage: 2 MILLIGRAM
  140. AMITRIPTYLINE HYDROCHLORIDE [Interacting]
     Active Substance: AMITRIPTYLINE HYDROCHLORIDE
     Indication: Insomnia
     Dosage: 5 MILLIGRAM
  141. AMITRIPTYLINE HYDROCHLORIDE [Interacting]
     Active Substance: AMITRIPTYLINE HYDROCHLORIDE
     Indication: Hypertension
     Dosage: 5 MILLIGRAM, QD (1 EVERY 1 DAYS)
  142. AMITRIPTYLINE HYDROCHLORIDE [Interacting]
     Active Substance: AMITRIPTYLINE HYDROCHLORIDE
     Indication: Fibromyalgia
     Dosage: 15 MILLIGRAM
  143. AMITRIPTYLINE HYDROCHLORIDE [Interacting]
     Active Substance: AMITRIPTYLINE HYDROCHLORIDE
     Indication: Duodenal ulcer
     Dosage: 18 MILLIGRAM
  144. AMITRIPTYLINE HYDROCHLORIDE [Interacting]
     Active Substance: AMITRIPTYLINE HYDROCHLORIDE
     Indication: Dementia
     Dosage: 25 MILLIGRAM, QD (1 EVERY 1 DAYS)
  145. AMITRIPTYLINE HYDROCHLORIDE [Interacting]
     Active Substance: AMITRIPTYLINE HYDROCHLORIDE
     Indication: Coronary artery disease
     Dosage: 650 MILLIGRAM
  146. AMITRIPTYLINE HYDROCHLORIDE [Interacting]
     Active Substance: AMITRIPTYLINE HYDROCHLORIDE
     Indication: Constipation
     Dosage: 750 MILLIGRAM, QD (1 EVERY 1 DAYS)
  147. AMITRIPTYLINE HYDROCHLORIDE [Interacting]
     Active Substance: AMITRIPTYLINE HYDROCHLORIDE
     Indication: Chest pain
     Dosage: 360 MILLIGRAM
  148. AMITRIPTYLINE HYDROCHLORIDE [Interacting]
     Active Substance: AMITRIPTYLINE HYDROCHLORIDE
     Indication: Arthritis
     Dosage: 0.6 MILLIGRAM
  149. AMITRIPTYLINE HYDROCHLORIDE [Interacting]
     Active Substance: AMITRIPTYLINE HYDROCHLORIDE
     Indication: Angina pectoris
     Dosage: 200 MILLIGRAM
  150. AMITRIPTYLINE HYDROCHLORIDE [Interacting]
     Active Substance: AMITRIPTYLINE HYDROCHLORIDE
     Dosage: 500 MILLIGRAM, QD (1 EVERY 1 DAYS)
  151. AMITRIPTYLINE HYDROCHLORIDE [Interacting]
     Active Substance: AMITRIPTYLINE HYDROCHLORIDE
     Dosage: 16 MILLIGRAM
  152. AMITRIPTYLINE HYDROCHLORIDE [Interacting]
     Active Substance: AMITRIPTYLINE HYDROCHLORIDE
     Dosage: 0.4 MILLIGRAM
  153. AMITRIPTYLINE HYDROCHLORIDE [Interacting]
     Active Substance: AMITRIPTYLINE HYDROCHLORIDE
     Dosage: 25 MILLIGRAM
  154. AMITRIPTYLINE HYDROCHLORIDE [Interacting]
     Active Substance: AMITRIPTYLINE HYDROCHLORIDE
     Dosage: UNK, QD (1 EVERY 1 DAYS)
  155. AMITRIPTYLINE HYDROCHLORIDE [Interacting]
     Active Substance: AMITRIPTYLINE HYDROCHLORIDE
     Indication: Thyroid disorder
     Dosage: UNK
  156. AMITRIPTYLINE HYDROCHLORIDE [Interacting]
     Active Substance: AMITRIPTYLINE HYDROCHLORIDE
     Indication: Radioactive iodine therapy
     Dosage: 25 MILLIGRAM, QD
  157. AMITRIPTYLINE HYDROCHLORIDE [Interacting]
     Active Substance: AMITRIPTYLINE HYDROCHLORIDE
     Indication: Prophylaxis
     Dosage: 75 MILLIGRAM
  158. AMITRIPTYLINE HYDROCHLORIDE [Interacting]
     Active Substance: AMITRIPTYLINE HYDROCHLORIDE
     Indication: Pain
     Dosage: 5 MILLIGRAM, QD (1 EVERY ONE DAY)
  159. AMITRIPTYLINE HYDROCHLORIDE [Interacting]
     Active Substance: AMITRIPTYLINE HYDROCHLORIDE
     Indication: Oedema
     Dosage: UNK
  160. AMITRIPTYLINE HYDROCHLORIDE [Interacting]
     Active Substance: AMITRIPTYLINE HYDROCHLORIDE
     Indication: Insomnia
     Dosage: 50 MILLIGRAM
  161. AMITRIPTYLINE HYDROCHLORIDE [Interacting]
     Active Substance: AMITRIPTYLINE HYDROCHLORIDE
     Indication: Hypertension
     Dosage: 75 MILLIGRAM, QD (1 EVERY 1 DAY)
  162. AMITRIPTYLINE HYDROCHLORIDE [Interacting]
     Active Substance: AMITRIPTYLINE HYDROCHLORIDE
     Indication: Fibromyalgia
     Dosage: 50 MILLIGRAM, QD (1 EVERY 1 DAY)
  163. AMITRIPTYLINE HYDROCHLORIDE [Interacting]
     Active Substance: AMITRIPTYLINE HYDROCHLORIDE
     Indication: Duodenal ulcer
     Dosage: 50 MILLIGRAM
  164. AMITRIPTYLINE HYDROCHLORIDE [Interacting]
     Active Substance: AMITRIPTYLINE HYDROCHLORIDE
     Indication: Dementia
     Dosage: 75 MILLIGRAM, QD (1 EVERY 1 DAY)
  165. AMITRIPTYLINE HYDROCHLORIDE [Interacting]
     Active Substance: AMITRIPTYLINE HYDROCHLORIDE
     Indication: Coronary artery disease
     Dosage: 50 MILLIGRAM, QD (1 EVERY 1 DAY)
  166. AMITRIPTYLINE HYDROCHLORIDE [Interacting]
     Active Substance: AMITRIPTYLINE HYDROCHLORIDE
     Indication: Constipation
     Dosage: 75 MILLIGRAM
  167. AMITRIPTYLINE HYDROCHLORIDE [Interacting]
     Active Substance: AMITRIPTYLINE HYDROCHLORIDE
     Indication: Chest pain
     Dosage: 5 MILLIGRAM
  168. AMITRIPTYLINE HYDROCHLORIDE [Interacting]
     Active Substance: AMITRIPTYLINE HYDROCHLORIDE
     Indication: Arthritis
     Dosage: 5 MILLIGRAM, QD (1 EVERY 1 DAYS)
  169. AMITRIPTYLINE HYDROCHLORIDE [Interacting]
     Active Substance: AMITRIPTYLINE HYDROCHLORIDE
     Indication: Angina pectoris
     Dosage: 15 MILLIGRAM
  170. AMITRIPTYLINE HYDROCHLORIDE [Interacting]
     Active Substance: AMITRIPTYLINE HYDROCHLORIDE
     Indication: Small intestine carcinoma
     Dosage: 2 MILLIGRAM
  171. AMITRIPTYLINE HYDROCHLORIDE [Interacting]
     Active Substance: AMITRIPTYLINE HYDROCHLORIDE
     Dosage: 18 MILLIGRAM
  172. AMITRIPTYLINE HYDROCHLORIDE [Interacting]
     Active Substance: AMITRIPTYLINE HYDROCHLORIDE
     Dosage: 25 MILLIGRAM, QD (1 EVERY 1 DAYS)
  173. AMITRIPTYLINE HYDROCHLORIDE [Interacting]
     Active Substance: AMITRIPTYLINE HYDROCHLORIDE
     Dosage: 650 MILLIGRAM
  174. AMITRIPTYLINE HYDROCHLORIDE [Interacting]
     Active Substance: AMITRIPTYLINE HYDROCHLORIDE
     Dosage: 750 MILLIGRAM, QD (1 EVERY 1 DAY)
  175. AMITRIPTYLINE HYDROCHLORIDE [Interacting]
     Active Substance: AMITRIPTYLINE HYDROCHLORIDE
     Dosage: 360 MILLIGRAM
  176. AMITRIPTYLINE HYDROCHLORIDE [Interacting]
     Active Substance: AMITRIPTYLINE HYDROCHLORIDE
     Dosage: 0.6 MILLIGRAM
  177. AMITRIPTYLINE HYDROCHLORIDE [Interacting]
     Active Substance: AMITRIPTYLINE HYDROCHLORIDE
     Dosage: 200 MILLIGRAM
  178. AMITRIPTYLINE HYDROCHLORIDE [Interacting]
     Active Substance: AMITRIPTYLINE HYDROCHLORIDE
     Dosage: 500 MILLIGRAM, QD (1 EVERY 1 DAY)
  179. AMITRIPTYLINE HYDROCHLORIDE [Interacting]
     Active Substance: AMITRIPTYLINE HYDROCHLORIDE
     Dosage: 16 MILLIGRAM
  180. AMITRIPTYLINE HYDROCHLORIDE [Interacting]
     Active Substance: AMITRIPTYLINE HYDROCHLORIDE
     Dosage: 0.4 MILLIGRAM
  181. AMLODIPINE\TELMISARTAN [Interacting]
     Active Substance: AMLODIPINE\TELMISARTAN
     Indication: Hypertension
     Dosage: 5 MILLIGRAM, QD (1 EVERY 1 DAYS)
  182. AMLODIPINE\TELMISARTAN [Interacting]
     Active Substance: AMLODIPINE\TELMISARTAN
     Indication: Coronary artery disease
     Dosage: UNK
  183. AMLODIPINE\TELMISARTAN [Interacting]
     Active Substance: AMLODIPINE\TELMISARTAN
     Indication: Constipation
  184. AMLODIPINE\TELMISARTAN [Interacting]
     Active Substance: AMLODIPINE\TELMISARTAN
     Indication: Angina pectoris
  185. AMLODIPINE\TELMISARTAN [Interacting]
     Active Substance: AMLODIPINE\TELMISARTAN
     Indication: Chest pain
  186. CALCIUM CARBONATE [Interacting]
     Active Substance: CALCIUM CARBONATE
     Indication: Product used for unknown indication
     Dosage: UNK
  187. CARBAMAZEPINE [Interacting]
     Active Substance: CARBAMAZEPINE
     Indication: Seizure
     Dosage: 100 MILLIGRAM, BID (1 EVERY 12 HOURS)
  188. CARBAMAZEPINE [Interacting]
     Active Substance: CARBAMAZEPINE
     Indication: Pain
     Dosage: 200 MILLIGRAM, BID (2 EVERY 1 DAYS)
  189. CARBAMAZEPINE [Interacting]
     Active Substance: CARBAMAZEPINE
     Indication: Fibromyalgia
     Dosage: UNK
  190. CARBAMAZEPINE [Interacting]
     Active Substance: CARBAMAZEPINE
     Indication: Bladder disorder
     Dosage: 500 MILLIGRAM, BID (1 EVERY 12 HOURS)
  191. CARBAMAZEPINE [Interacting]
     Active Substance: CARBAMAZEPINE
     Indication: Seizure prophylaxis
     Dosage: 100 MILLIGRAM, QD (1 EVERY 1 DAYS)
  192. CARBAMAZEPINE [Interacting]
     Active Substance: CARBAMAZEPINE
     Indication: Prophylaxis
     Dosage: 1 DOSAGE FORM, BID (1 EVERY 12 HOURS)
  193. CARBAMAZEPINE [Interacting]
     Active Substance: CARBAMAZEPINE
     Dosage: 100 MILLIGRAM, BID (2 EVERY 1 DAYS)
  194. CARBAMAZEPINE [Interacting]
     Active Substance: CARBAMAZEPINE
     Dosage: 800 MILLIGRAM, BID (2 EVERY 1 DAYS)
  195. CARBAMAZEPINE [Interacting]
     Active Substance: CARBAMAZEPINE
     Dosage: 2000 MILLIGRAM, QD (1 EVERY 1 DAYS)
  196. CARBAMAZEPINE [Interacting]
     Active Substance: CARBAMAZEPINE
     Dosage: 200 MILLIGRAM
  197. CARBAMAZEPINE [Interacting]
     Active Substance: CARBAMAZEPINE
     Dosage: 2 DOSAGE FORM, QD (1 EVERY 1 DAYS)
  198. CARBAMAZEPINE [Interacting]
     Active Substance: CARBAMAZEPINE
     Dosage: 100 MILLIGRAM
  199. CARBAMAZEPINE [Interacting]
     Active Substance: CARBAMAZEPINE
     Dosage: 400 MILLIGRAM, BID (2 EVERY 1 DAYS)
  200. CARBAMAZEPINE [Interacting]
     Active Substance: CARBAMAZEPINE
     Dosage: 2 DOSAGE FORM, BID (1 EVERY 12 HOURS)
  201. CARBAMAZEPINE [Interacting]
     Active Substance: CARBAMAZEPINE
     Dosage: 1 DOSAGE FORM
  202. CARBAMAZEPINE [Interacting]
     Active Substance: CARBAMAZEPINE
     Dosage: 10 MILLIGRAM
  203. CARBAMAZEPINE [Interacting]
     Active Substance: CARBAMAZEPINE
     Dosage: UNK, BID (2 EVERY 1 DAYS)
  204. CARBAMAZEPINE [Interacting]
     Active Substance: CARBAMAZEPINE
     Dosage: 1 DOSAGE FORM, QD (1 EVERY 1 DAYS)
  205. CARBAMAZEPINE [Interacting]
     Active Substance: CARBAMAZEPINE
     Dosage: 200 MILLIGRAM, BID (1 EVERY 12 HOURS)
  206. CARBAMAZEPINE [Interacting]
     Active Substance: CARBAMAZEPINE
     Dosage: 200 MILLIGRAM, QD (1 EVERY 1 DAYS)
  207. CARBAMAZEPINE [Interacting]
     Active Substance: CARBAMAZEPINE
     Dosage: 500 MILLIGRAM, QD (1 EVERY 1 DAYS)
  208. CARBAMAZEPINE [Interacting]
     Active Substance: CARBAMAZEPINE
     Dosage: 400 MILLIGRAM
  209. CARBAMAZEPINE [Interacting]
     Active Substance: CARBAMAZEPINE
     Dosage: 100 MILLIGRAM, BID (1 EVERY 12 HOURS)
  210. CARBAMAZEPINE [Interacting]
     Active Substance: CARBAMAZEPINE
     Dosage: 800 MILLIGRAM, BID (1 EVERY 12 HOURS)
  211. CARBAMAZEPINE [Interacting]
     Active Substance: CARBAMAZEPINE
     Dosage: 400 MILLIGRAM, BID (1 EVERY 12 HOURS)
  212. CARBAMAZEPINE [Interacting]
     Active Substance: CARBAMAZEPINE
     Indication: Seizure
     Dosage: 400 MILLIGRAM
  213. CARBAMAZEPINE [Interacting]
     Active Substance: CARBAMAZEPINE
     Indication: Fibromyalgia
     Dosage: 200 MILLIGRAM
  214. CARBAMAZEPINE [Interacting]
     Active Substance: CARBAMAZEPINE
     Indication: Seizure prophylaxis
     Dosage: 100 MILLIGRAM
  215. CARBAMAZEPINE [Interacting]
     Active Substance: CARBAMAZEPINE
     Dosage: 500 MILLIGRAM, QD (1 EVERY 1 DAYS)
  216. CARBAMAZEPINE [Interacting]
     Active Substance: CARBAMAZEPINE
     Dosage: 100 MILLIGRAM, QD (1 EVERY 1 DAYS)
  217. CARBAMAZEPINE [Interacting]
     Active Substance: CARBAMAZEPINE
     Dosage: 200 MILLIGRAM, QD (1 EVERY 1 DAYS)
  218. CARBAMAZEPINE [Interacting]
     Active Substance: CARBAMAZEPINE
     Dosage: 200 MILLIGRAM
  219. CHONDROITIN SULFATE (BOVINE)\GLUCOSAMINE SULFATE [Interacting]
     Active Substance: CHONDROITIN SULFATE (BOVINE)\GLUCOSAMINE SULFATE
     Indication: Product used for unknown indication
     Dosage: UNK
  220. CHONDROITIN SULFATE (BOVINE)\GLUCOSAMINE SULFATE [Interacting]
     Active Substance: CHONDROITIN SULFATE (BOVINE)\GLUCOSAMINE SULFATE
     Indication: Pain
     Dosage: UNK
  221. CHONDROITIN SULFATE (BOVINE)\GLUCOSAMINE SULFATE [Interacting]
     Active Substance: CHONDROITIN SULFATE (BOVINE)\GLUCOSAMINE SULFATE
     Indication: Arthritis
  222. DILTIAZEM HYDROCHLORIDE [Interacting]
     Active Substance: DILTIAZEM HYDROCHLORIDE
     Indication: Hypertension
     Dosage: 36 MILLIGRAM, QD (1 EVERY 1 DAYS)
  223. DILTIAZEM HYDROCHLORIDE [Interacting]
     Active Substance: DILTIAZEM HYDROCHLORIDE
     Indication: Coronary artery disease
     Dosage: 360 MILLIGRAM, QD (1 EVERY 1 DAYS)
  224. DILTIAZEM HYDROCHLORIDE [Interacting]
     Active Substance: DILTIAZEM HYDROCHLORIDE
     Indication: Chest pain
     Dosage: 360 MILLIGRAM
  225. DILTIAZEM HYDROCHLORIDE [Interacting]
     Active Substance: DILTIAZEM HYDROCHLORIDE
     Indication: Angina pectoris
     Dosage: UNK
  226. DILTIAZEM HYDROCHLORIDE [Interacting]
     Active Substance: DILTIAZEM HYDROCHLORIDE
     Dosage: 360 MILLIGRAM, QD (1 EVERY 1 DAYS)
  227. DILTIAZEM HYDROCHLORIDE [Interacting]
     Active Substance: DILTIAZEM HYDROCHLORIDE
     Dosage: 36 MILLIGRAM, QD (1 EVERY 1 DAYS)
  228. DILTIAZEM HYDROCHLORIDE [Interacting]
     Active Substance: DILTIAZEM HYDROCHLORIDE
     Dosage: UNK
  229. DILTIAZEM HYDROCHLORIDE [Interacting]
     Active Substance: DILTIAZEM HYDROCHLORIDE
     Dosage: 40 MILLIGRAM, QD (1 EVERY 1 DAYS)
  230. DILTIAZEM HYDROCHLORIDE [Interacting]
     Active Substance: DILTIAZEM HYDROCHLORIDE
     Dosage: 500 MILLIGRAM, QD (1 EVERY 1 DAYS)
  231. DILTIAZEM HYDROCHLORIDE [Interacting]
     Active Substance: DILTIAZEM HYDROCHLORIDE
     Dosage: 300 MILLIGRAM, QD (1 EVERY 1 DAYS)
  232. DILTIAZEM HYDROCHLORIDE [Interacting]
     Active Substance: DILTIAZEM HYDROCHLORIDE
     Dosage: 1 DOSAGE FORM, QD (1 EVERY 1 DAYS)
  233. DILTIAZEM HYDROCHLORIDE [Interacting]
     Active Substance: DILTIAZEM HYDROCHLORIDE
     Dosage: 30 MILLIGRAM, QD (1 EVERY 1 DAYS)
  234. DILTIAZEM HYDROCHLORIDE [Interacting]
     Active Substance: DILTIAZEM HYDROCHLORIDE
     Dosage: 15 MILLIGRAM, QD (1 EVERY 1 DAYS)
  235. DILTIAZEM HYDROCHLORIDE [Interacting]
     Active Substance: DILTIAZEM HYDROCHLORIDE
     Indication: Hypertension
     Dosage: 360 MILLIGRAM, QD (1 EVERY 1 DAYS, LIQUID INTRAVENOUS)
  236. DILTIAZEM HYDROCHLORIDE [Interacting]
     Active Substance: DILTIAZEM HYDROCHLORIDE
     Indication: Coronary artery disease
     Dosage: 360 MILLIGRAM, QD (1 EVERY 1 DAYS)
  237. DILTIAZEM HYDROCHLORIDE [Interacting]
     Active Substance: DILTIAZEM HYDROCHLORIDE
     Indication: Chest pain
     Dosage: 36 MILLIGRAM, QD (1 EVERY 1 DAYS)
  238. DILTIAZEM HYDROCHLORIDE [Interacting]
     Active Substance: DILTIAZEM HYDROCHLORIDE
     Indication: Angina pectoris
     Dosage: 15 MILLIGRAM, QD (1 EVERY 1 DAYS)
  239. DILTIAZEM HYDROCHLORIDE [Interacting]
     Active Substance: DILTIAZEM HYDROCHLORIDE
     Indication: Chronic obstructive pulmonary disease
     Dosage: 40 MILLIGRAM, QD (1 EVERY 1 DAYS)
  240. DILTIAZEM HYDROCHLORIDE [Interacting]
     Active Substance: DILTIAZEM HYDROCHLORIDE
     Dosage: 500 MILLIGRAM, QD (1 EVERY 1 DAYS)
  241. DILTIAZEM HYDROCHLORIDE [Interacting]
     Active Substance: DILTIAZEM HYDROCHLORIDE
     Dosage: UNK
  242. DOCUSATE SODIUM [Interacting]
     Active Substance: DOCUSATE SODIUM
     Indication: Constipation
     Dosage: UNK
  243. DROTAVERINE [Interacting]
     Active Substance: DROTAVERINE
     Indication: Constipation
     Dosage: UNK
  244. DULCOLAX (BISACODYL) [Interacting]
     Active Substance: BISACODYL
     Indication: Constipation
     Dosage: 2 DOSAGE FORM, QD (1 EVERY 1 DAYS)
  245. DULCOLAX (BISACODYL) [Interacting]
     Active Substance: BISACODYL
     Dosage: 2 DOSAGE FORM
  246. DULCOLAX (BISACODYL) [Interacting]
     Active Substance: BISACODYL
     Dosage: UNK
  247. DULCOLAX (BISACODYL) [Interacting]
     Active Substance: BISACODYL
     Dosage: 650 MILLIGRAM, QD (1 EVERY 1 DAY)
  248. DULCOLAX (BISACODYL) [Interacting]
     Active Substance: BISACODYL
     Dosage: UNK
  249. DULCOLAX (BISACODYL) [Interacting]
     Active Substance: BISACODYL
     Dosage: 1 DOSAGE FORM, QD (1 EVERY 1 DAYS)
  250. DULCOLAX (BISACODYL) [Interacting]
     Active Substance: BISACODYL
     Indication: Constipation
     Dosage: 2 DOSAGE FORM
  251. DULCOLAX (BISACODYL) [Interacting]
     Active Substance: BISACODYL
     Dosage: UNK
  252. DULCOLAX (BISACODYL) [Interacting]
     Active Substance: BISACODYL
     Dosage: 650 MILLIGRAM, QD (1 EVERY 1 DAY)
  253. DULCOLAX (BISACODYL) [Interacting]
     Active Substance: BISACODYL
     Dosage: 1 DOSAGE FORM, QD (1 EVERY 1 DAYS)
  254. DULCOLAX (BISACODYL) [Interacting]
     Active Substance: BISACODYL
     Dosage: 2 DOSAGE FORM, QD (1 EVERY 1 DAYS)
  255. DULCOLAX (BISACODYL) [Interacting]
     Active Substance: BISACODYL
     Dosage: UNK
  256. DULCOLAX (BISACODYL) [Interacting]
     Active Substance: BISACODYL
     Dosage: 2 DOSAGE FORM
  257. DULCOLAX (BISACODYL) [Interacting]
     Active Substance: BISACODYL
     Dosage: 2 DOSAGE FORM, QD (1 EVERY 1 DAYS)
  258. DULCOLAX (BISACODYL) [Interacting]
     Active Substance: BISACODYL
     Dosage: UNK, QD (1 EVERY 1 DAYS)
  259. DULCOLAX (BISACODYL) [Interacting]
     Active Substance: BISACODYL
     Dosage: UNK, QD (1 EVERY 1 DAYS)
  260. FUROSEMIDE [Interacting]
     Active Substance: FUROSEMIDE
     Indication: Oedema
     Dosage: UNK
  261. FUROSEMIDE [Interacting]
     Active Substance: FUROSEMIDE
     Indication: Coronary artery disease
     Dosage: 4 MICROGRAM, QD (1 EVERY 1 DAYS)
  262. FUROSEMIDE [Interacting]
     Active Substance: FUROSEMIDE
     Indication: Constipation
     Dosage: 20 MICROGRAM, QD (1 EVERY 1 DAYS)
  263. FUROSEMIDE [Interacting]
     Active Substance: FUROSEMIDE
     Indication: Chest pain
     Dosage: 40 MICROGRAM
  264. FUROSEMIDE [Interacting]
     Active Substance: FUROSEMIDE
     Indication: Angina pectoris
     Dosage: 40 MICROGRAM, QD (1 EVERY 1 DAYS (1 EVERY 1 DAYS)
  265. FUROSEMIDE [Interacting]
     Active Substance: FUROSEMIDE
     Dosage: 10 MILLIGRAM, QD (1 EVERY 1 DAYS)
  266. FUROSEMIDE [Interacting]
     Active Substance: FUROSEMIDE
     Dosage: 40 MILLIGRAM, QD (1 EVERY 1 DAYS)
  267. FUROSEMIDE [Interacting]
     Active Substance: FUROSEMIDE
     Dosage: 20 MILLIGRAM, QD (1 EVERY 1 DAYS)
  268. FUROSEMIDE [Interacting]
     Active Substance: FUROSEMIDE
     Dosage: 20 MILLIGRAM, QD (1 EVERY 1 DAYS)
  269. FUROSEMIDE [Interacting]
     Active Substance: FUROSEMIDE
     Dosage: 4 MILLIGRAM, QD (1 EVERY 1 DAYS)
  270. FUROSEMIDE [Interacting]
     Active Substance: FUROSEMIDE
     Dosage: 40 MILLIGRAM
  271. FUROSEMIDE [Interacting]
     Active Substance: FUROSEMIDE
     Dosage: 40 MILLIGRAM, QD (1 EVERY 1 DAYS)
  272. FUROSEMIDE [Interacting]
     Active Substance: FUROSEMIDE
     Indication: Oedema
     Dosage: 4 MILLIGRAM, QD (1 EVERY 1 DAYS)
  273. FUROSEMIDE [Interacting]
     Active Substance: FUROSEMIDE
     Indication: Coronary artery disease
     Dosage: 40 MILLIGRAM, QD (1 EVERY 1 DAYS)
  274. FUROSEMIDE [Interacting]
     Active Substance: FUROSEMIDE
     Indication: Chest pain
     Dosage: 20 MILLIGRAM, QD (1 EVERY 1 DAYS)
  275. FUROSEMIDE [Interacting]
     Active Substance: FUROSEMIDE
     Indication: Constipation
     Dosage: 20 MILLIGRAM
  276. FUROSEMIDE [Interacting]
     Active Substance: FUROSEMIDE
     Indication: Angina pectoris
     Dosage: 40 MILLIGRAM, QD (1 EVERY 1 DAYS)
  277. GLUCOSAMINE [Interacting]
     Active Substance: GLUCOSAMINE
     Indication: Arthritis
     Dosage: 500 MILLIGRAM, BID (1 EVERY 12 HOURS)
  278. GLUCOSAMINE [Interacting]
     Active Substance: GLUCOSAMINE
     Indication: Pain
     Dosage: 2500 MILLIGRAM, QD (1 EVERY 1 DAYS)
  279. GLUCOSAMINE [Interacting]
     Active Substance: GLUCOSAMINE
     Dosage: 500 MILLIGRAM, QD (1 EVERY 1 DAYS)
  280. GLUCOSAMINE [Interacting]
     Active Substance: GLUCOSAMINE
     Dosage: 1000 MILLIGRAM, QD (1 EVERY 1 DAYS)
  281. GLUCOSAMINE [Interacting]
     Active Substance: GLUCOSAMINE
     Dosage: 500 MILLIGRAM, BID (2 EVERY 1 DAYS)
  282. GLUCOSAMINE [Interacting]
     Active Substance: GLUCOSAMINE
     Dosage: UNK
  283. GLUCOSAMINE [Interacting]
     Active Substance: GLUCOSAMINE
     Dosage: 500 MILLIGRAM
  284. GLUCOSAMINE [Interacting]
     Active Substance: GLUCOSAMINE
     Dosage: 250 MILLIGRAM, QD (1 EVERY 1 DAY)
  285. GLUCOSAMINE [Interacting]
     Active Substance: GLUCOSAMINE
     Dosage: 1000 MILLIGRAM, BID (2 EVERY 1 DAYS)
  286. GLUCOSAMINE [Interacting]
     Active Substance: GLUCOSAMINE
     Indication: Arthritis
     Dosage: 500 MILLIGRAM
  287. GLUCOSAMINE [Interacting]
     Active Substance: GLUCOSAMINE
     Indication: Pain
     Dosage: UNK
  288. GLUCOSAMINE [Interacting]
     Active Substance: GLUCOSAMINE
     Dosage: 500 MILLIGRAM, BID (2 EVERY 1 DAYS)
  289. GLUCOSAMINE [Interacting]
     Active Substance: GLUCOSAMINE
     Dosage: 500 MILLIGRAM, QD (1 EVERY 1 DAYS)
  290. GLUCOSAMINE [Interacting]
     Active Substance: GLUCOSAMINE
     Dosage: 500 MILLIGRAM, QH (1 EVERY 1 HOUR)
  291. GLUCOSAMINE [Interacting]
     Active Substance: GLUCOSAMINE
     Dosage: 1000 MILLIGRAM, QD (1 EVERY 1 DAYS)
  292. GLUCOSAMINE [Interacting]
     Active Substance: GLUCOSAMINE
     Dosage: 1000 MILLIGRAM, BID (1 EVERY 12 HOURS)
  293. GLUCOSAMINE [Suspect]
     Active Substance: GLUCOSAMINE
     Indication: Pain
     Dosage: 500 MILLIGRAM, BID (2 EVERY 1 DAY)
  294. GLUCOSAMINE [Suspect]
     Active Substance: GLUCOSAMINE
     Indication: Arthritis
     Dosage: 1000 MILLIGRAM, QD (1 EVERY 1 DAY)
  295. GLUCOSAMINE [Suspect]
     Active Substance: GLUCOSAMINE
     Dosage: 250 MILLIGRAM, QD (1 EVERY 1 DAY)
  296. GLUCOSAMINE [Suspect]
     Active Substance: GLUCOSAMINE
     Dosage: 2500 MILLIGRAM
  297. NITROGLYCERIN [Interacting]
     Active Substance: NITROGLYCERIN
     Indication: Hypertension
     Dosage: 0.6 MILLIGRAM
  298. NITROGLYCERIN [Interacting]
     Active Substance: NITROGLYCERIN
     Indication: Coronary artery disease
     Dosage: 0.4 MILLIGRAM
  299. NITROGLYCERIN [Interacting]
     Active Substance: NITROGLYCERIN
     Indication: Chest pain
     Dosage: 1 DOSAGE FORM, QD (1 EVERY 1 DAYS)
  300. NITROGLYCERIN [Interacting]
     Active Substance: NITROGLYCERIN
     Indication: Angina pectoris
     Dosage: 0.4 DOSAGE FORM, QD (1 EVERY 1 DAYS)
  301. NITROGLYCERIN [Interacting]
     Active Substance: NITROGLYCERIN
     Dosage: 20 DOSAGE FORM, QD (1 EVERY 1 DAYS)
  302. NITROGLYCERIN [Interacting]
     Active Substance: NITROGLYCERIN
     Dosage: 0.6 DOSAGE FORM, QD (1 EVERY 1 DAYS)
  303. NITROGLYCERIN [Interacting]
     Active Substance: NITROGLYCERIN
     Dosage: 1 DOSAGE FORM, QD (1 EVERY 1 DAYS)
  304. NITROGLYCERIN [Interacting]
     Active Substance: NITROGLYCERIN
     Dosage: 1 DOSAGE FORM
  305. NITROGLYCERIN [Interacting]
     Active Substance: NITROGLYCERIN
     Dosage: 6 DOSAGE FORM, QD (1 EVERY 1 DAYS)
  306. NITROGLYCERIN [Interacting]
     Active Substance: NITROGLYCERIN
     Dosage: 4 DOSAGE FORM, QD (1 EVERY 1 DAYS)
  307. NITROGLYCERIN [Interacting]
     Active Substance: NITROGLYCERIN
     Dosage: UNK
  308. NITROGLYCERIN [Interacting]
     Active Substance: NITROGLYCERIN
     Dosage: 0.4 MILLIGRAM, QD (1 EVERY 1 DAYS)
  309. NITROGLYCERIN [Interacting]
     Active Substance: NITROGLYCERIN
     Dosage: 0.6 MILLIGRAM, QD (1 EVERY 1 DAYS)
  310. NITROGLYCERIN [Interacting]
     Active Substance: NITROGLYCERIN
     Dosage: UNK, QD
  311. NITROGLYCERIN [Interacting]
     Active Substance: NITROGLYCERIN
     Dosage: 20 MILLIGRAM
  312. NITROGLYCERIN [Interacting]
     Active Substance: NITROGLYCERIN
     Dosage: 0.6 DOSAGE FORM, QH (1 EVERY 1 HOUR)
  313. NITROGLYCERIN [Interacting]
     Active Substance: NITROGLYCERIN
     Dosage: 40 MILLIGRAM, QD (1 EVERY 1 DAYS)
  314. NITROGLYCERIN [Interacting]
     Active Substance: NITROGLYCERIN
     Dosage: UNK
  315. NITROGLYCERIN [Interacting]
     Active Substance: NITROGLYCERIN
     Dosage: 1 DOSAGE FORM, QD (1 EVERY 1 DAYS)
  316. NITROGLYCERIN [Interacting]
     Active Substance: NITROGLYCERIN
     Dosage: 0.4 MILLIGRAM, QD (1 EVERY 1 DAYS)
  317. NITROGLYCERIN [Interacting]
     Active Substance: NITROGLYCERIN
     Dosage: 0.6 MILLIGRAM, QD (1 EVERY 1 DAYS)
  318. NITROGLYCERIN [Interacting]
     Active Substance: NITROGLYCERIN
     Indication: Hypertension
     Dosage: 0.4 MILLIGRAM, QD (1 EVERY 1 DAYS)
  319. NITROGLYCERIN [Interacting]
     Active Substance: NITROGLYCERIN
     Indication: Coronary artery disease
     Dosage: 0.6 MILLIGRAM, QD (1 EVERY 1 DAYS)
  320. NITROGLYCERIN [Interacting]
     Active Substance: NITROGLYCERIN
     Indication: Chest pain
     Dosage: 4 MILLIGRAM, QD (1 EVERY 1 DAYS)
  321. NITROGLYCERIN [Interacting]
     Active Substance: NITROGLYCERIN
     Indication: Angina pectoris
     Dosage: UNK
  322. NITROGLYCERIN [Interacting]
     Active Substance: NITROGLYCERIN
     Dosage: UNK
  323. NITROGLYCERIN [Interacting]
     Active Substance: NITROGLYCERIN
     Dosage: 0.6 MILLIGRAM
  324. NITROGLYCERIN [Interacting]
     Active Substance: NITROGLYCERIN
     Dosage: 6 MILLIGRAM, QD (1 EVERY 1 DAYS)
  325. NITROGLYCERIN [Interacting]
     Active Substance: NITROGLYCERIN
     Dosage: 1 DOSAGE FORM
  326. NITROGLYCERIN [Interacting]
     Active Substance: NITROGLYCERIN
     Dosage: 0.4 MILLIGRAM
  327. NITROGLYCERIN [Interacting]
     Active Substance: NITROGLYCERIN
     Dosage: UNK, QD (1 EVERY 1 DAY)
  328. NITROGLYCERIN [Interacting]
     Active Substance: NITROGLYCERIN
     Dosage: 0.4 MILLIGRAM
  329. NITROGLYCERIN [Interacting]
     Active Substance: NITROGLYCERIN
     Dosage: 1 DOSAGE FORM, QD (1 EVERY 1 DAYS)
  330. NITROGLYCERIN [Interacting]
     Active Substance: NITROGLYCERIN
     Dosage: 0.4 MILLIGRAM, QD (1 EVERY 1 DAYS)
  331. NITROGLYCERIN [Interacting]
     Active Substance: NITROGLYCERIN
     Dosage: 20 MILLIGRAM, QD (1 EVERY 1 DAYS)
  332. NITROGLYCERIN [Interacting]
     Active Substance: NITROGLYCERIN
     Dosage: 0.4 DOSAGE FORM, QD (1 EVERY 1 DAY)
  333. HYDROCHLOROTHIAZIDE\QUINAPRIL HYDROCHLORIDE [Interacting]
     Active Substance: HYDROCHLOROTHIAZIDE\QUINAPRIL HYDROCHLORIDE
     Indication: Hypertension
     Dosage: 20 MILLIGRAM, QD (1 EVERY 1 DAYS)
  334. HYDROCHLOROTHIAZIDE\QUINAPRIL HYDROCHLORIDE [Interacting]
     Active Substance: HYDROCHLOROTHIAZIDE\QUINAPRIL HYDROCHLORIDE
     Indication: Coronary artery dilatation
     Dosage: UNK
  335. HYDROCHLOROTHIAZIDE\QUINAPRIL HYDROCHLORIDE [Interacting]
     Active Substance: HYDROCHLOROTHIAZIDE\QUINAPRIL HYDROCHLORIDE
     Indication: Chest pain
     Dosage: 40 MILLIGRAM, QD (1 EVERY 1 DAYS)
  336. HYDROCHLOROTHIAZIDE\QUINAPRIL HYDROCHLORIDE [Interacting]
     Active Substance: HYDROCHLOROTHIAZIDE\QUINAPRIL HYDROCHLORIDE
     Indication: Angina pectoris
  337. HYDROCHLOROTHIAZIDE\QUINAPRIL HYDROCHLORIDE [Interacting]
     Active Substance: HYDROCHLOROTHIAZIDE\QUINAPRIL HYDROCHLORIDE
     Indication: Coronary artery disease
  338. LACTULOSE [Interacting]
     Active Substance: LACTULOSE
     Indication: Constipation
     Dosage: 15 MILLILITER
  339. LACTULOSE [Interacting]
     Active Substance: LACTULOSE
     Indication: Thyroid disorder
     Dosage: 15 MILLIGRAM, QD ( 1 EVERY 1 DAYS)
  340. LACTULOSE [Interacting]
     Active Substance: LACTULOSE
     Indication: Radioactive iodine therapy
     Dosage: 2 DOSAGE FORM, QD (1 EVERY 1 DAYS)
  341. LACTULOSE [Interacting]
     Active Substance: LACTULOSE
     Indication: Constipation
     Dosage: 15 MILLILITER, QD (1 EVERY 1 DAY)
  342. LACTULOSE [Interacting]
     Active Substance: LACTULOSE
     Indication: Urinary tract infection
  343. LACTULOSE [Interacting]
     Active Substance: LACTULOSE
     Indication: Constipation
     Dosage: 15 MILLIGRAM, QD (1 EVERY 1 DAY)
  344. LACTULOSE [Interacting]
     Active Substance: LACTULOSE
     Indication: Thyroid disorder
     Dosage: UNK, QD (1 EVERY 1 DAY)
  345. LACTULOSE [Interacting]
     Active Substance: LACTULOSE
     Indication: Radioactive iodine therapy
     Dosage: 2 DOSAGE FORM, QD (1 EVERY 1 DAYS)
  346. LACTULOSE [Interacting]
     Active Substance: LACTULOSE
     Indication: Urinary tract infection
     Dosage: 15 MILLILITER
  347. LACTULOSE [Interacting]
     Active Substance: LACTULOSE
     Dosage: 15 MILLILITER
  348. LACTULOSE [Interacting]
     Active Substance: LACTULOSE
     Dosage: UNK
  349. LACTULOSE [Interacting]
     Active Substance: LACTULOSE
     Dosage: 15 MILLILITER, QD (1 EVERY 1 DAY)
  350. LACTULOSE [Interacting]
     Active Substance: LACTULOSE
     Indication: Constipation
     Dosage: 15 MILLIGRAM, QD (1 EVERY 1 DAYS)
  351. LEVOFLOXACIN [Interacting]
     Active Substance: LEVOFLOXACIN
     Indication: Urinary tract infection
     Dosage: 200 MILLIGRAM, QD (1 EVERY 1 DAYS)
  352. LEVOFLOXACIN [Interacting]
     Active Substance: LEVOFLOXACIN
     Dosage: 250 MILLIGRAM, QD (1 EVERY 1 DAYS)
  353. LEVOFLOXACIN [Interacting]
     Active Substance: LEVOFLOXACIN
     Dosage: UNK, QD (1 EVERY 1 DAYS)
  354. LEVOFLOXACIN [Interacting]
     Active Substance: LEVOFLOXACIN
     Dosage: UNK
  355. LEVOFLOXACIN [Interacting]
     Active Substance: LEVOFLOXACIN
     Dosage: 200 MILLIGRAM
  356. LEVOTHYROXINE SODIUM [Interacting]
     Active Substance: LEVOTHYROXINE SODIUM
     Indication: Thyroid disorder
     Dosage: 0.088 MILLIGRAM, QD (1 EVERY 1 DAYS)
  357. LEVOTHYROXINE SODIUM [Interacting]
     Active Substance: LEVOTHYROXINE SODIUM
     Indication: Radioactive iodine therapy
     Dosage: 0.8 MILLIGRAM, QD (1 EVERY 1 DAYS)
  358. LEVOTHYROXINE SODIUM [Interacting]
     Active Substance: LEVOTHYROXINE SODIUM
     Indication: Urinary tract infection
     Dosage: UNK
  359. LEVOTHYROXINE SODIUM [Interacting]
     Active Substance: LEVOTHYROXINE SODIUM
     Indication: Constipation
     Dosage: 0.9 MILLIGRAM, QD (1 EVERY 1 DAYS)
  360. LEVOTHYROXINE SODIUM [Interacting]
     Active Substance: LEVOTHYROXINE SODIUM
     Dosage: 1244 MILLIGRAM, QD (1 EVERY 1 DAY)
  361. LEVOTHYROXINE SODIUM [Interacting]
     Active Substance: LEVOTHYROXINE SODIUM
     Dosage: 0.89 MILLIGRAM
  362. LEVOTHYROXINE SODIUM [Interacting]
     Active Substance: LEVOTHYROXINE SODIUM
     Dosage: 0.8 MILLIGRAM, QD (1 EVERY 1 DAYS)
  363. LEVOTHYROXINE SODIUM [Interacting]
     Active Substance: LEVOTHYROXINE SODIUM
     Dosage: 0.9 MILLIGRAM, QD (1 EVERY 1 DAYS)
  364. LEVOTHYROXINE SODIUM [Interacting]
     Active Substance: LEVOTHYROXINE SODIUM
     Dosage: 88 MILLIGRAM, QD (1 EVERY 1 DAYS)
  365. LEVOTHYROXINE SODIUM [Interacting]
     Active Substance: LEVOTHYROXINE SODIUM
     Dosage: 1 DOSAGE FORM, QD (1 EVERY 1 DAYS)
  366. LEVOTHYROXINE SODIUM [Interacting]
     Active Substance: LEVOTHYROXINE SODIUM
     Dosage: 0.88 MILLIGRAM, QD (1 EVERY 1 DAYS)
  367. LEVOTHYROXINE SODIUM [Interacting]
     Active Substance: LEVOTHYROXINE SODIUM
     Dosage: UNK
  368. LEVOTHYROXINE SODIUM [Interacting]
     Active Substance: LEVOTHYROXINE SODIUM
     Dosage: 0.09 MILLIGRAM, QD (1 EVERY 1 DAYS)
  369. LEVOTHYROXINE SODIUM [Interacting]
     Active Substance: LEVOTHYROXINE SODIUM
     Dosage: 0.088 MILLIGRAM, QD (1 EVERY 1 DAYS)
  370. LEVOTHYROXINE SODIUM [Interacting]
     Active Substance: LEVOTHYROXINE SODIUM
     Dosage: 0.88 MILLIGRAM, QD (1 EVERY 1 DAYS)
  371. LEVOTHYROXINE SODIUM [Interacting]
     Active Substance: LEVOTHYROXINE SODIUM
     Dosage: 622 MILLIGRAM, BID (1 EVERY 12 HOURS)
  372. LEVOTHYROXINE SODIUM [Interacting]
     Active Substance: LEVOTHYROXINE SODIUM
     Indication: Thyroid disorder
     Dosage: 0.09 MILLIGRAM, QD (1 EVERY 1 DAYS)
  373. LEVOTHYROXINE SODIUM [Interacting]
     Active Substance: LEVOTHYROXINE SODIUM
     Indication: Radioactive iodine therapy
     Dosage: 0.8 MILLIGRAM, QD (1 EVERY 1 DAYS)
  374. LEVOTHYROXINE SODIUM [Interacting]
     Active Substance: LEVOTHYROXINE SODIUM
     Indication: Urinary tract infection
     Dosage: 1 DOSAGE FORM, QD (1 EVERY 1 DAYS)
  375. LEVOTHYROXINE SODIUM [Interacting]
     Active Substance: LEVOTHYROXINE SODIUM
     Indication: Constipation
     Dosage: UNK
  376. LEVOTHYROXINE SODIUM [Interacting]
     Active Substance: LEVOTHYROXINE SODIUM
     Dosage: UNK
  377. LEVOTHYROXINE SODIUM [Interacting]
     Active Substance: LEVOTHYROXINE SODIUM
     Dosage: 88 MILLIGRAM, QD (1 EVERY 1 DAYS)
  378. LEVOTHYROXINE SODIUM [Interacting]
     Active Substance: LEVOTHYROXINE SODIUM
     Dosage: 0.9 MILLIGRAM, QD (1 EVERY 1 DAYS)
  379. LEVOTHYROXINE SODIUM [Interacting]
     Active Substance: LEVOTHYROXINE SODIUM
     Dosage: 1244 MILLIGRAM, QD (1 EVERY 1 DAYS)
  380. LEVOTHYROXINE SODIUM [Interacting]
     Active Substance: LEVOTHYROXINE SODIUM
     Dosage: 0.89 MILLIGRAM, QD (1 EVERY 1 DAYS)
  381. LEVOTHYROXINE SODIUM [Interacting]
     Active Substance: LEVOTHYROXINE SODIUM
     Dosage: 0.9 MILLIGRAM, QD (1 EVERY 1 DAYS)
  382. LEVOTHYROXINE SODIUM [Interacting]
     Active Substance: LEVOTHYROXINE SODIUM
     Dosage: 0.89 MILLIGRAM
  383. LEVOTHYROXINE SODIUM [Interacting]
     Active Substance: LEVOTHYROXINE SODIUM
     Dosage: 0.9 MILLIGRAM, QD (1 EVERY 1 DAYS)
  384. LEVOTHYROXINE SODIUM [Interacting]
     Active Substance: LEVOTHYROXINE SODIUM
     Dosage: 250 MILLIGRAM, BID (2 EVERY 1 DAY)
  385. LEVOTHYROXINE SODIUM [Interacting]
     Active Substance: LEVOTHYROXINE SODIUM
     Dosage: 250 MILLIGRAM
  386. LEVOTHYROXINE SODIUM [Interacting]
     Active Substance: LEVOTHYROXINE SODIUM
     Dosage: 250 MILLIGRAM, QD (1 EVERY 1 DAYS)
  387. LEVOTHYROXINE SODIUM [Interacting]
     Active Substance: LEVOTHYROXINE SODIUM
     Dosage: 0.088 MILLIGRAM
  388. LEVOTHYROXINE SODIUM [Interacting]
     Active Substance: LEVOTHYROXINE SODIUM
     Dosage: 0.088 MILLIGRAM, QD (1 EVERY 1 DAYS)
  389. LEVOTHYROXINE SODIUM [Interacting]
     Active Substance: LEVOTHYROXINE SODIUM
     Dosage: 622 MILLIGRAM, BID (2 EVERY 1 DAY)
  390. LEVOTHYROXINE SODIUM [Interacting]
     Active Substance: LEVOTHYROXINE SODIUM
     Dosage: 0.09 MILLIGRAM, QD (1 EVERY 1 DAYS)
  391. LEVOTHYROXINE SODIUM [Interacting]
     Active Substance: LEVOTHYROXINE SODIUM
     Dosage: 0.88 MILLIGRAM, QD (1 EVERY 1 DAYS)
  392. LEVOTHYROXINE SODIUM [Interacting]
     Active Substance: LEVOTHYROXINE SODIUM
     Dosage: UNK, QD (1 EVERY 1 DAY)
  393. MAGNESIUM HYDROXIDE [Interacting]
     Active Substance: MAGNESIUM HYDROXIDE
     Indication: Constipation
     Dosage: 622 MILLIGRAM, BID (2 EVERY 1 DAYS)
  394. MAGNESIUM HYDROXIDE [Interacting]
     Active Substance: MAGNESIUM HYDROXIDE
     Dosage: 622 MILLIGRAM
  395. MAGNESIUM HYDROXIDE [Interacting]
     Active Substance: MAGNESIUM HYDROXIDE
     Dosage: UNK UNK, BID (2 EVERY 1 DAYS)
  396. MAGNESIUM HYDROXIDE [Interacting]
     Active Substance: MAGNESIUM HYDROXIDE
     Dosage: 4 DOSAGE FORM, QD (1 EVERY 1 DAY)
  397. MAGNESIUM HYDROXIDE [Interacting]
     Active Substance: MAGNESIUM HYDROXIDE
     Dosage: 1240 MILLIGRAM, QD (1 EVERY 1 DAY)
  398. MAGNESIUM HYDROXIDE [Interacting]
     Active Substance: MAGNESIUM HYDROXIDE
     Dosage: 2488 MILLIGRAM, QD (1 EVERY 1 DAY)
  399. MAGNESIUM HYDROXIDE [Interacting]
     Active Substance: MAGNESIUM HYDROXIDE
     Dosage: 2 DOSAGE FORM, QD (1 EVERY 1 DAY)
  400. MAGNESIUM HYDROXIDE [Interacting]
     Active Substance: MAGNESIUM HYDROXIDE
     Dosage: 311 MILLIGRAM
  401. MAGNESIUM HYDROXIDE [Interacting]
     Active Substance: MAGNESIUM HYDROXIDE
     Dosage: 622 MILLIGRAM, QD (1 EVERY 1 DAY)
  402. MAGNESIUM HYDROXIDE [Interacting]
     Active Substance: MAGNESIUM HYDROXIDE
     Dosage: 10 MILLIGRAM, QD (1 EVERY 1 DAY)
  403. MAGNESIUM HYDROXIDE [Interacting]
     Active Substance: MAGNESIUM HYDROXIDE
     Dosage: 622 MILLIGRAM, BID (1 EVERY 12 HOURS)
  404. MAGNESIUM HYDROXIDE [Interacting]
     Active Substance: MAGNESIUM HYDROXIDE
     Dosage: UNK
  405. MAGNESIUM HYDROXIDE [Interacting]
     Active Substance: MAGNESIUM HYDROXIDE
     Dosage: 2 DOSAGE FORM, BID ( 2 EVERY 1 DAY)
  406. MAGNESIUM HYDROXIDE [Interacting]
     Active Substance: MAGNESIUM HYDROXIDE
     Dosage: 620 MILLIGRAM
  407. MAGNESIUM HYDROXIDE [Interacting]
     Active Substance: MAGNESIUM HYDROXIDE
     Dosage: 40 DOSAGE FORM, QD (1 EVERY 1 DAY)
  408. MAGNESIUM HYDROXIDE [Interacting]
     Active Substance: MAGNESIUM HYDROXIDE
     Dosage: UNK, QD (1 EVERY 1 DAY)
  409. MAGNESIUM HYDROXIDE [Interacting]
     Active Substance: MAGNESIUM HYDROXIDE
     Dosage: 2488 MILLIGRAM, BID (2 EVERY 1 DAY)
  410. MAGNESIUM HYDROXIDE [Interacting]
     Active Substance: MAGNESIUM HYDROXIDE
     Dosage: 1244 MILLIGRAM, QD (1 EVERY 1 DAY)
  411. MAGNESIUM HYDROXIDE [Interacting]
     Active Substance: MAGNESIUM HYDROXIDE
     Dosage: 1 DOSAGE FORM, BID (2 EVERY 1 DAY)
  412. MAGNESIUM HYDROXIDE [Interacting]
     Active Substance: MAGNESIUM HYDROXIDE
     Dosage: 1 DOSAGE FORM, QD (1 EVERY 1 DAY)
  413. MAGNESIUM HYDROXIDE [Interacting]
     Active Substance: MAGNESIUM HYDROXIDE
     Dosage: UNK, Q2D (1 EVERY 2 DAYS)
  414. MAGNESIUM HYDROXIDE [Interacting]
     Active Substance: MAGNESIUM HYDROXIDE
     Dosage: 2 DOSAGE FORM
  415. MAGNESIUM HYDROXIDE [Interacting]
     Active Substance: MAGNESIUM HYDROXIDE
     Dosage: 1244 MILLIGRAM
  416. MAGNESIUM HYDROXIDE [Interacting]
     Active Substance: MAGNESIUM HYDROXIDE
     Dosage: 1244 MILLIGRAM, BID (1 EVERY 12 HOURS)
  417. MAGNESIUM HYDROXIDE [Interacting]
     Active Substance: MAGNESIUM HYDROXIDE
     Dosage: 2 DOSAGE FORM, BID (1 EVERY 12 HOURS)
  418. MAGNESIUM HYDROXIDE [Interacting]
     Active Substance: MAGNESIUM HYDROXIDE
     Dosage: 1240 MILLIGRAM
  419. OMEPRAZOLE [Interacting]
     Active Substance: OMEPRAZOLE
     Indication: Duodenal ulcer
     Dosage: 20 MILLIGRAM, QD (1 EVERY 1 DAYS)
  420. OMEPRAZOLE [Interacting]
     Active Substance: OMEPRAZOLE
     Indication: Small intestine carcinoma
     Dosage: 20 MILLIGRAM
  421. OMEPRAZOLE [Interacting]
     Active Substance: OMEPRAZOLE
     Indication: Hypertension
     Dosage: 20 MILLIGRAM
  422. OMEPRAZOLE [Interacting]
     Active Substance: OMEPRAZOLE
     Indication: Coronary artery disease
     Dosage: UNK
  423. OMEPRAZOLE [Interacting]
     Active Substance: OMEPRAZOLE
     Indication: Chest pain
     Dosage: UNK
  424. OMEPRAZOLE [Interacting]
     Active Substance: OMEPRAZOLE
     Indication: Angina pectoris
     Dosage: 20 MILLIGRAM, QD (1 EVERY 1 DAYS)
  425. OMEPRAZOLE [Interacting]
     Active Substance: OMEPRAZOLE
     Dosage: 20 MILLIGRAM, BID (1 EVERY 12 HOURS)
  426. OMEPRAZOLE [Interacting]
     Active Substance: OMEPRAZOLE
     Dosage: 20 MILLIGRAM, QD (1 EVERY 1 DAYS)
  427. OMEPRAZOLE [Interacting]
     Active Substance: OMEPRAZOLE
     Dosage: 20 MILLIGRAM
  428. OMEPRAZOLE [Interacting]
     Active Substance: OMEPRAZOLE
     Dosage: 20 MILLIGRAM, BID (2 EVERY 1 DAYS)
  429. OXCARBAZEPINE [Interacting]
     Active Substance: OXCARBAZEPINE
     Indication: Product used for unknown indication
     Dosage: UNK
  430. ROSUVASTATIN CALCIUM [Interacting]
     Active Substance: ROSUVASTATIN CALCIUM
     Indication: Cerebrovascular accident
     Dosage: 20 MILLIGRAM, BID (1 EVERY 12 HOURS)
  431. ROSUVASTATIN CALCIUM [Interacting]
     Active Substance: ROSUVASTATIN CALCIUM
     Indication: Insomnia
     Dosage: 20 MILLIGRAM
  432. ROSUVASTATIN CALCIUM [Interacting]
     Active Substance: ROSUVASTATIN CALCIUM
     Indication: Hypertension
     Dosage: 20 MILLIGRAM, BID (2 EVERY 1 DAYS)
  433. ROSUVASTATIN CALCIUM [Interacting]
     Active Substance: ROSUVASTATIN CALCIUM
     Indication: Coronary artery disease
     Dosage: 10 MILLIGRAM
  434. ROSUVASTATIN CALCIUM [Interacting]
     Active Substance: ROSUVASTATIN CALCIUM
     Indication: Chronic obstructive pulmonary disease
     Dosage: 40 MILLIGRAM, BID (1 EVERY 1 DAYS)
  435. ROSUVASTATIN CALCIUM [Interacting]
     Active Substance: ROSUVASTATIN CALCIUM
     Indication: Chest pain
     Dosage: UNK
  436. ROSUVASTATIN CALCIUM [Interacting]
     Active Substance: ROSUVASTATIN CALCIUM
     Indication: Angina pectoris
     Dosage: 20 MILLIGRAM
  437. ROSUVASTATIN CALCIUM [Interacting]
     Active Substance: ROSUVASTATIN CALCIUM
     Dosage: 400 MILLIGRAM, QD (1 EVERY 1 DAYS)
  438. ROSUVASTATIN CALCIUM [Interacting]
     Active Substance: ROSUVASTATIN CALCIUM
     Dosage: 1.67 MILLIGRAM
  439. ROSUVASTATIN CALCIUM [Interacting]
     Active Substance: ROSUVASTATIN CALCIUM
     Dosage: 10 MILLIGRAM, QD (1 EVERY 1 DAYS)
  440. ROSUVASTATIN CALCIUM [Interacting]
     Active Substance: ROSUVASTATIN CALCIUM
     Dosage: 200 MILLIGRAM, BID (1 EVERY 12 HOURS)
  441. ROSUVASTATIN CALCIUM [Interacting]
     Active Substance: ROSUVASTATIN CALCIUM
     Dosage: UNK
  442. ROSUVASTATIN CALCIUM [Interacting]
     Active Substance: ROSUVASTATIN CALCIUM
     Dosage: 400 MILLIGRAM, QD (1 EVERY 1 DAYS)
  443. ROSUVASTATIN CALCIUM [Interacting]
     Active Substance: ROSUVASTATIN CALCIUM
     Dosage: 40 MILLIGRAM
  444. ROSUVASTATIN CALCIUM [Interacting]
     Active Substance: ROSUVASTATIN CALCIUM
     Dosage: UNK
  445. ROSUVASTATIN CALCIUM [Interacting]
     Active Substance: ROSUVASTATIN CALCIUM
     Dosage: 20 MILLIGRAM, QD (1 EVERY 1 DAYS)
  446. ROSUVASTATIN CALCIUM [Interacting]
     Active Substance: ROSUVASTATIN CALCIUM
     Dosage: 200 MILLIGRAM
  447. ROSUVASTATIN CALCIUM [Interacting]
     Active Substance: ROSUVASTATIN CALCIUM
     Dosage: 30 MILLIGRAM, QD (1 EVERY 1 DAY)
  448. ROSUVASTATIN CALCIUM [Interacting]
     Active Substance: ROSUVASTATIN CALCIUM
     Dosage: 400 MILLIGRAM
  449. ROSUVASTATIN CALCIUM [Interacting]
     Active Substance: ROSUVASTATIN CALCIUM
     Dosage: 20 MILLIGRAM, BID (1 EVERY 12 HOURS)
  450. ROSUVASTATIN CALCIUM [Interacting]
     Active Substance: ROSUVASTATIN CALCIUM
     Dosage: 200 MILLIGRAM, BID (1 EVERY 12 HOURS)
  451. ROSUVASTATIN CALCIUM [Interacting]
     Active Substance: ROSUVASTATIN CALCIUM
     Dosage: 40 MILLIGRAM, QD (1 EVERY 1 DAYS)
  452. ROSUVASTATIN CALCIUM [Interacting]
     Active Substance: ROSUVASTATIN CALCIUM
     Dosage: UNK, BID (1 EVERY 12 HOURS)
  453. ROSUVASTATIN CALCIUM [Interacting]
     Active Substance: ROSUVASTATIN CALCIUM
     Dosage: 20 MILLIGRAM, QD (1 EVERY 1 DAYS)
  454. ROSUVASTATIN CALCIUM [Interacting]
     Active Substance: ROSUVASTATIN CALCIUM
     Dosage: 30 MILLIGRAM, QD (1 EVERY 1 DAY)
  455. ROSUVASTATIN CALCIUM [Interacting]
     Active Substance: ROSUVASTATIN CALCIUM
     Indication: Cerebrovascular accident
     Dosage: 20 MILLIGRAM, BID (1 EVERY 12 HOURS)
  456. ROSUVASTATIN CALCIUM [Interacting]
     Active Substance: ROSUVASTATIN CALCIUM
     Indication: Insomnia
     Dosage: UNK
  457. ROSUVASTATIN CALCIUM [Interacting]
     Active Substance: ROSUVASTATIN CALCIUM
     Indication: Hypertension
     Dosage: 200 MILLIGRAM, BID (1 EVERY 12 HOURS)
  458. ROSUVASTATIN CALCIUM [Interacting]
     Active Substance: ROSUVASTATIN CALCIUM
     Indication: Coronary artery disease
     Dosage: 10 MILLIGRAM, BID (1 EVERY 12 HOURS)
  459. ROSUVASTATIN CALCIUM [Interacting]
     Active Substance: ROSUVASTATIN CALCIUM
     Indication: Chronic obstructive pulmonary disease
     Dosage: 20 MILLIGRAM, BID (2 EVERY 1 DAY)
  460. ROSUVASTATIN CALCIUM [Interacting]
     Active Substance: ROSUVASTATIN CALCIUM
     Indication: Chest pain
     Dosage: 400 MILLIGRAM, QD (1 EVERY 1 DAYS)
  461. ROSUVASTATIN CALCIUM [Interacting]
     Active Substance: ROSUVASTATIN CALCIUM
     Indication: Angina pectoris
     Dosage: UNK
  462. ROSUVASTATIN CALCIUM [Interacting]
     Active Substance: ROSUVASTATIN CALCIUM
     Dosage: 20 MILLIGRAM, QD (1 EVERY 1 DAYS)
  463. ROSUVASTATIN CALCIUM [Interacting]
     Active Substance: ROSUVASTATIN CALCIUM
     Dosage: 200 MILLIGRAM, QID (1 EVERY 6 HOURS)
  464. ROSUVASTATIN CALCIUM [Interacting]
     Active Substance: ROSUVASTATIN CALCIUM
     Dosage: 20 MILLIGRAM
  465. ROSUVASTATIN CALCIUM [Interacting]
     Active Substance: ROSUVASTATIN CALCIUM
     Dosage: 40 MILLIGRAM, QD (1 EVERY 1 DAYS)
  466. ROSUVASTATIN CALCIUM [Interacting]
     Active Substance: ROSUVASTATIN CALCIUM
     Dosage: 10 MILLIGRAM
  467. ROSUVASTATIN CALCIUM [Interacting]
     Active Substance: ROSUVASTATIN CALCIUM
     Dosage: 40 MILLIGRAM, QD (1 EVERY 1 DAYS)
  468. ROSUVASTATIN CALCIUM [Interacting]
     Active Substance: ROSUVASTATIN CALCIUM
     Dosage: 20 MILLIGRAM, Q2D (1 EVERY 2 DAYS)
  469. ROSUVASTATIN CALCIUM [Interacting]
     Active Substance: ROSUVASTATIN CALCIUM
     Dosage: UNK
  470. ROSUVASTATIN CALCIUM [Interacting]
     Active Substance: ROSUVASTATIN CALCIUM
     Dosage: 20 MILLIGRAM, QD (1 EVERY 1 DAYS)
  471. ROSUVASTATIN CALCIUM [Interacting]
     Active Substance: ROSUVASTATIN CALCIUM
     Dosage: 1.67 MILLIGRAM
  472. ROSUVASTATIN CALCIUM [Interacting]
     Active Substance: ROSUVASTATIN CALCIUM
     Dosage: 10 MILLIGRAM, QD (1 EVERY 1 DAYS)
  473. ROSUVASTATIN CALCIUM [Interacting]
     Active Substance: ROSUVASTATIN CALCIUM
     Dosage: 30 MILLIGRAM, QD (1 EVERY 1 DAYS)
  474. ROSUVASTATIN CALCIUM [Interacting]
     Active Substance: ROSUVASTATIN CALCIUM
     Dosage: 200 MILLIGRAM, Q2H (1 EVERY 2 HOURS)
  475. ROSUVASTATIN CALCIUM [Interacting]
     Active Substance: ROSUVASTATIN CALCIUM
     Dosage: 0.5 MILLIGRAM, QD (1 EVERY 1 DAYS)
  476. ROSUVASTATIN CALCIUM [Interacting]
     Active Substance: ROSUVASTATIN CALCIUM
     Dosage: 400 MILLIGRAM, BID (1 EVERY 12 HOURS)
  477. ROSUVASTATIN CALCIUM [Interacting]
     Active Substance: ROSUVASTATIN CALCIUM
     Dosage: 40 MILLIGRAM, BID (1 EVERY 12 HOURS)
  478. ROSUVASTATIN CALCIUM [Interacting]
     Active Substance: ROSUVASTATIN CALCIUM
     Dosage: 20 MILLIGRAM, Q8H (1 EVERY 8 HOURS)
  479. ROSUVASTATIN CALCIUM [Interacting]
     Active Substance: ROSUVASTATIN CALCIUM
     Dosage: 10 MILLIGRAM, QD (1 EVERY 1 DAYS)
  480. ALBUTEROL [Interacting]
     Active Substance: ALBUTEROL
     Indication: Hypertension
     Dosage: UNK, QD (1 EVERY 1 DAYS)
  481. ALBUTEROL [Interacting]
     Active Substance: ALBUTEROL
     Indication: Coronary artery disease
     Dosage: 400 MILLIGRAM (4 EVERY 1 DAYS)
  482. ALBUTEROL [Interacting]
     Active Substance: ALBUTEROL
     Indication: Chest pain
     Dosage: (4 EVERY 1 DAYS)
  483. ALBUTEROL [Interacting]
     Active Substance: ALBUTEROL
     Indication: Angina pectoris
     Dosage: UNK UNK, QD (1 EVERY 1 DAYS)
  484. ALBUTEROL [Interacting]
     Active Substance: ALBUTEROL
     Indication: Chronic obstructive pulmonary disease
     Dosage: 200 MILLIGRAM (4 EVERY 1 DAYS)
  485. ALBUTEROL [Interacting]
     Active Substance: ALBUTEROL
     Dosage: 100 MILLIGRAM, QD (1 EVERY 1 DAYS)
  486. ALBUTEROL [Interacting]
     Active Substance: ALBUTEROL
     Dosage: 400 MILLIGRAM, QD (1 EVERY 1 DAYS)
  487. ALBUTEROL [Interacting]
     Active Substance: ALBUTEROL
     Dosage: (1 EVERY 6 HOURS)
  488. ALBUTEROL [Interacting]
     Active Substance: ALBUTEROL
     Dosage: 100 MILLIGRAM
  489. ALBUTEROL [Interacting]
     Active Substance: ALBUTEROL
     Dosage: 800 MILLIGRAM, QD (1 EVERY 1 DAYS)
  490. ALBUTEROL [Interacting]
     Active Substance: ALBUTEROL
     Dosage: 400 MILLIGRAM (1 EVERY 6 HOURS)
  491. ALBUTEROL [Interacting]
     Active Substance: ALBUTEROL
     Dosage: 200 MILLIGRAM (1 EVERY 8 HOURS)
  492. ALBUTEROL [Interacting]
     Active Substance: ALBUTEROL
     Dosage: UNK
  493. ALBUTEROL [Interacting]
     Active Substance: ALBUTEROL
     Dosage: 200 MILLIGRAM (1 EVERY 6 HOURS)
  494. ALBUTEROL [Interacting]
     Active Substance: ALBUTEROL
     Dosage: UNK, BID (2 EVERY 1 DAYS)
  495. ALBUTEROL [Interacting]
     Active Substance: ALBUTEROL
     Dosage: 200 MILLIGRAM
  496. ALBUTEROL [Interacting]
     Active Substance: ALBUTEROL
     Dosage: 500 MILLIGRAM, QD (1 EVERY 1 DAYS)
  497. ALBUTEROL [Interacting]
     Active Substance: ALBUTEROL
     Dosage: 400 MILLIGRAM
  498. ALBUTEROL [Interacting]
     Active Substance: ALBUTEROL
     Dosage: 100 MICROGRAM, QD (1 EVERY 1 DAY)
  499. ALBUTEROL [Interacting]
     Active Substance: ALBUTEROL
     Dosage: 200 MICROGRAM, QID (4 EVERY 1 DAY)
  500. ALBUTEROL [Interacting]
     Active Substance: ALBUTEROL
     Dosage: 800 MILLIGRAM
  501. ALBUTEROL [Suspect]
     Active Substance: ALBUTEROL
     Indication: Hypertension
     Dosage: 400 MILLIGRAM
  502. ALBUTEROL [Suspect]
     Active Substance: ALBUTEROL
     Indication: Chronic obstructive pulmonary disease
     Dosage: UNK
  503. ALBUTEROL [Suspect]
     Active Substance: ALBUTEROL
     Indication: Chest pain
     Dosage: 800 MILLIGRAM, QD (1 EVERY 1 DAYS)
  504. ALBUTEROL [Suspect]
     Active Substance: ALBUTEROL
     Indication: Angina pectoris
     Dosage: 400 MILLIGRAM, QD (1 EVERY 1 DAY)
  505. ALBUTEROL [Suspect]
     Active Substance: ALBUTEROL
     Indication: Coronary artery disease
     Dosage: 100 MILLIGRAM, QD (1 EVERY 1 DAY)
  506. ALBUTEROL [Suspect]
     Active Substance: ALBUTEROL
     Dosage: 800 MILLIGRAM
  507. ALBUTEROL [Suspect]
     Active Substance: ALBUTEROL
     Dosage: 100 MILLIGRAM
  508. ALBUTEROL [Suspect]
     Active Substance: ALBUTEROL
     Dosage: 400 MILLIGRAM, QID (1 EVERY 6 HOURS)
  509. ALBUTEROL [Suspect]
     Active Substance: ALBUTEROL
     Dosage: 2000 MICROGRAM, QID (1 EVERY 6 HOURS)
  510. ALBUTEROL [Suspect]
     Active Substance: ALBUTEROL
     Dosage: 200 MILLIGRAM, TID (1 EVERY 8 HOURS)
  511. ALBUTEROL [Suspect]
     Active Substance: ALBUTEROL
     Dosage: 200 MICROGRAM, QID (1 EVERY 6 HOURS)
  512. ALBUTEROL [Suspect]
     Active Substance: ALBUTEROL
     Dosage: 100 MICROGRAM, QID (1 EVERY 6 HOURS)
  513. ALBUTEROL [Suspect]
     Active Substance: ALBUTEROL
     Dosage: 200 MILLIGRAM, QID (1 EVERY 6 HOURS)
  514. ALBUTEROL [Suspect]
     Active Substance: ALBUTEROL
     Dosage: UNK, QID (1 EVERY 6 HOURS)
  515. ALBUTEROL [Suspect]
     Active Substance: ALBUTEROL
     Dosage: 200 MICROGRAM, BID (2 EVERY 1 DAY)
  516. ALBUTEROL [Suspect]
     Active Substance: ALBUTEROL
     Dosage: 400 MICROGRAM, QD (1 EVERY 1 DAY)
  517. ALBUTEROL [Suspect]
     Active Substance: ALBUTEROL
     Dosage: 800 MICROGRAM, QD (1 EVERY 1 DAY)
  518. ALBUTEROL [Suspect]
     Active Substance: ALBUTEROL
     Dosage: 100 MICROGRAM, QD (1 EVERY 1 DAY)
  519. ALBUTEROL [Suspect]
     Active Substance: ALBUTEROL
     Dosage: 100 MICROGRAM
  520. ALBUTEROL [Suspect]
     Active Substance: ALBUTEROL
     Dosage: 100 MILLIGRAM, QID (1 EVERY 6 HOURS)
  521. ALBUTEROL [Suspect]
     Active Substance: ALBUTEROL
     Dosage: 200 MICROGRAM, QID (4 EVERY 1 DAY)
  522. SODIUM PICOSULFATE [Interacting]
     Active Substance: SODIUM PICOSULFATE
     Indication: Constipation
     Dosage: 2 DOSAGE FORM, QD (1 EVERY 1 DAYS)
  523. SODIUM PICOSULFATE [Interacting]
     Active Substance: SODIUM PICOSULFATE
     Dosage: 2 DOSAGE FORM
  524. SODIUM PICOSULFATE [Interacting]
     Active Substance: SODIUM PICOSULFATE
     Dosage: 2 DOSAGE FORM, QD (1 EVERY 24 HOURS)
  525. SODIUM PICOSULFATE [Interacting]
     Active Substance: SODIUM PICOSULFATE
     Dosage: UNK
  526. CRANBERRY [Interacting]
     Active Substance: CRANBERRY
     Indication: Chronic obstructive pulmonary disease
     Dosage: 500 MILLIGRAM
  527. CRANBERRY [Interacting]
     Active Substance: CRANBERRY
     Indication: Bladder disorder
     Dosage: 500 MILLIGRAM, TID (3 EVERY 1 DAYS)
  528. CRANBERRY [Interacting]
     Active Substance: CRANBERRY
     Dosage: UNK
  529. CRANBERRY [Interacting]
     Active Substance: CRANBERRY
     Dosage: 500 MILLIGRAM, Q8H (1 EVERY 8 HOURS)
  530. CRANBERRY [Interacting]
     Active Substance: CRANBERRY
     Indication: Chronic obstructive pulmonary disease
     Dosage: 500 MILLIGRAM, TID (3 EVERY 1 DAYS)
  531. CRANBERRY [Interacting]
     Active Substance: CRANBERRY
     Indication: Bladder disorder
     Dosage: 1500 MILLIGRAM, QD (1 EVERY 1 DAY)
  532. CRANBERRY [Interacting]
     Active Substance: CRANBERRY
     Indication: Fibromyalgia
     Dosage: UNK
  533. CRANBERRY [Interacting]
     Active Substance: CRANBERRY
     Dosage: 1500 MILLIGRAM, TID (3 EVERY 1 DAY)
  534. CRANBERRY [Interacting]
     Active Substance: CRANBERRY
     Dosage: 4500 MILLIGRAM
  535. CRANBERRY [Interacting]
     Active Substance: CRANBERRY
     Dosage: 500 MILLIGRAM, QD (1 EVERY 1 DAY)
  536. LEVOFLOXACIN [Interacting]
     Active Substance: LEVOFLOXACIN
     Indication: Urinary tract infection
     Dosage: UNK
  537. LEVOFLOXACIN [Interacting]
     Active Substance: LEVOFLOXACIN
     Indication: Thyroid disorder
     Dosage: 15 MILLIGRAM
  538. LEVOFLOXACIN [Interacting]
     Active Substance: LEVOFLOXACIN
     Indication: Radioactive iodine therapy
     Dosage: 200 MILLIGRAM, QD (1 EVERY 1 DAYS)
  539. LEVOFLOXACIN [Interacting]
     Active Substance: LEVOFLOXACIN
     Dosage: 250 MILLIGRAM
  540. LEVOFLOXACIN [Interacting]
     Active Substance: LEVOFLOXACIN
     Dosage: 250 MILLIGRAM, QD (1 EVERY 1 DAYS)
  541. LEVOFLOXACIN [Interacting]
     Active Substance: LEVOFLOXACIN
     Dosage: 250 MILLIGRAM, QD (1 EVERY 12 HOURS)
  542. LEVOFLOXACIN [Interacting]
     Active Substance: LEVOFLOXACIN
     Dosage: 200 MILLIGRAM
  543. LEVOFLOXACIN [Interacting]
     Active Substance: LEVOFLOXACIN
     Dosage: 250 MILLIGRAM, BID (1 EVERY 12 HOURS)
  544. CALCIUM [Interacting]
     Active Substance: CALCIUM
     Indication: Product used for unknown indication
     Dosage: UNK
  545. BISACODYL [Interacting]
     Active Substance: BISACODYL
     Indication: Constipation
     Dosage: 2 DOSAGE FORM, QD (1 EVERY 1 DAYS)
  546. BISACODYL [Interacting]
     Active Substance: BISACODYL
     Indication: Chronic obstructive pulmonary disease
     Dosage: 1 DOSAGE FORM, QD (1 EVERY 1 DAYS)
  547. BISACODYL [Interacting]
     Active Substance: BISACODYL
     Dosage: 2 DOSAGE FORM
  548. BISACODYL [Interacting]
     Active Substance: BISACODYL
     Dosage: UNK
  549. BISACODYL [Interacting]
     Active Substance: BISACODYL
     Dosage: UNK, QD (1 EVERY 1 DAYS)
  550. BISACODYL [Interacting]
     Active Substance: BISACODYL
     Dosage: 650 MILLIGRAM, QD (1 EVERY 1 DAY)
  551. BISACODYL [Interacting]
     Active Substance: BISACODYL
     Dosage: 1 DOSAGE FORM
  552. BISACODYL [Interacting]
     Active Substance: BISACODYL
     Dosage: 2 DOSAGE FORM
  553. BISACODYL [Interacting]
     Active Substance: BISACODYL
     Dosage: 2 DOSAGE FORM, QD (1 EVERY 1 DAYS)
  554. BISACODYL [Interacting]
     Active Substance: BISACODYL
     Dosage: 2 DOSAGE FORM, QD (1 EVERY 1 DAYS)
  555. CRANBERRY [Interacting]
     Active Substance: CRANBERRY
     Indication: Bladder disorder
     Dosage: UNK
  556. CRANBERRY [Interacting]
     Active Substance: CRANBERRY
     Dosage: 500 MILLIGRAM, TID (1 EVERY 8 HOURS)
  557. CYCLOBENZAPRINE [Interacting]
     Active Substance: CYCLOBENZAPRINE
     Indication: Fibromyalgia
     Dosage: 5 MILLIGRAM, BID (1 EVERY 12 HOURS)
  558. CYCLOBENZAPRINE [Interacting]
     Active Substance: CYCLOBENZAPRINE
     Indication: Seizure prophylaxis
     Dosage: 5 MILLIGRAM, TID (1 EVERY 8 HOURS)
  559. CYCLOBENZAPRINE [Interacting]
     Active Substance: CYCLOBENZAPRINE
     Indication: Seizure
     Dosage: UNK
  560. CYCLOBENZAPRINE [Interacting]
     Active Substance: CYCLOBENZAPRINE
     Indication: Pain
     Dosage: 5.61 MILLIGRAM, QD (1 EVERY 1 DAYS)
  561. CYCLOBENZAPRINE [Interacting]
     Active Substance: CYCLOBENZAPRINE
     Dosage: 15 MILLIGRAM, QD (1 EVERY 1 DAYS)
  562. CYCLOBENZAPRINE [Interacting]
     Active Substance: CYCLOBENZAPRINE
     Dosage: (1 EVERY 8 HOURS)
  563. CYCLOBENZAPRINE [Interacting]
     Active Substance: CYCLOBENZAPRINE
     Dosage: UNK UNK, QD (1 EVERY 1 DAYS)
  564. CYCLOBENZAPRINE [Interacting]
     Active Substance: CYCLOBENZAPRINE
     Dosage: 5 MILLIGRAM, TID (3 EVERY 1 DAYS)
  565. CYCLOBENZAPRINE [Interacting]
     Active Substance: CYCLOBENZAPRINE
     Dosage: 5 MILLIGRAM, BID (2 EVERY 1 DAYS)
  566. CYCLOBENZAPRINE [Interacting]
     Active Substance: CYCLOBENZAPRINE
     Dosage: 1.87 MILLIGRAM
  567. CYCLOBENZAPRINE [Interacting]
     Active Substance: CYCLOBENZAPRINE
     Dosage: 100 MILLIGRAM, BID (2 EVERY 1 DAYS)
  568. CYCLOBENZAPRINE [Interacting]
     Active Substance: CYCLOBENZAPRINE
     Dosage: 200 MILLIGRAM, BID (2 EVERY 1 DAYS)
  569. CYCLOBENZAPRINE [Interacting]
     Active Substance: CYCLOBENZAPRINE
     Dosage: 1.87 MILLIGRAM, QD (1 EVERY 1 DAYS)
  570. CYCLOBENZAPRINE [Interacting]
     Active Substance: CYCLOBENZAPRINE
     Dosage: 15 MILLIGRAM, TID (3 EVERY 1 DAYS)
  571. CYCLOBENZAPRINE [Interacting]
     Active Substance: CYCLOBENZAPRINE
     Dosage: 0.63 MILLIGRAM, BID (1 EVERY 12 HOURS)
  572. CYCLOBENZAPRINE [Interacting]
     Active Substance: CYCLOBENZAPRINE
     Dosage: 45 MILLIGRAM, QD (1 EVERY 1 DAYS)
  573. CYCLOBENZAPRINE [Interacting]
     Active Substance: CYCLOBENZAPRINE
     Dosage: 10 MILLIGRAM, QD (1 EVERY 1 DAYS)
  574. CYCLOBENZAPRINE [Interacting]
     Active Substance: CYCLOBENZAPRINE
     Dosage: 2 MILLIGRAM, QD (1 EVERY 1 DAYS)
  575. CYCLOBENZAPRINE [Interacting]
     Active Substance: CYCLOBENZAPRINE
     Dosage: 1.87 MILLIGRAM, TID (3 EVERY 1 DAYS)
  576. CYCLOBENZAPRINE [Interacting]
     Active Substance: CYCLOBENZAPRINE
     Dosage: 5 MILLIGRAM, TID (3 EVERY 1 DAYS)
  577. CYCLOBENZAPRINE [Interacting]
     Active Substance: CYCLOBENZAPRINE
     Dosage: 0.83 MILLIGRAM
  578. CYCLOBENZAPRINE [Interacting]
     Active Substance: CYCLOBENZAPRINE
     Dosage: UNK
  579. CYCLOBENZAPRINE [Interacting]
     Active Substance: CYCLOBENZAPRINE
     Dosage: 15 MILLIGRAM, TID (1 EVERY 8 HOURS)
  580. CYCLOBENZAPRINE [Interacting]
     Active Substance: CYCLOBENZAPRINE
     Dosage: 0.63 MILLIGRAM
  581. CYCLOBENZAPRINE [Interacting]
     Active Substance: CYCLOBENZAPRINE
     Dosage: 5 MILLIGRAM
  582. CYCLOBENZAPRINE [Interacting]
     Active Substance: CYCLOBENZAPRINE
     Dosage: UNK
  583. CYCLOBENZAPRINE [Interacting]
     Active Substance: CYCLOBENZAPRINE
     Dosage: 200 MILLIGRAM
  584. CYCLOBENZAPRINE [Interacting]
     Active Substance: CYCLOBENZAPRINE
     Dosage: 200 MILLIGRAM, QD (1 EVERY 1 DAYS)
  585. CYCLOBENZAPRINE [Interacting]
     Active Substance: CYCLOBENZAPRINE
     Dosage: 200 MILLIGRAM, BID (2 EVERY 12 HOURS)
  586. CYCLOBENZAPRINE [Interacting]
     Active Substance: CYCLOBENZAPRINE
     Dosage: 100 MILLIGRAM, BID (1 EVERY 12 HOURS)
  587. CYCLOBENZAPRINE [Interacting]
     Active Substance: CYCLOBENZAPRINE
     Dosage: 200 MILLIGRAM, QD (1 EVERY 12 HOURS)
  588. DILTIAZEM [Interacting]
     Active Substance: DILTIAZEM
     Indication: Hypertension
     Dosage: UNK
  589. DILTIAZEM [Interacting]
     Active Substance: DILTIAZEM
     Indication: Coronary artery disease
     Dosage: 360 MILLIGRAM, QD (1 EVERY 1 DAYS)
  590. DILTIAZEM [Interacting]
     Active Substance: DILTIAZEM
     Indication: Angina pectoris
  591. DIPYRIDAMOLE [Interacting]
     Active Substance: DIPYRIDAMOLE
     Indication: Cerebrovascular accident
     Dosage: 1 DOSAGE FORM, (1 EVERY 12 HOURS)
  592. DIPYRIDAMOLE [Interacting]
     Active Substance: DIPYRIDAMOLE
     Dosage: 400 MILLIGRAM, QD (1 EVERY 1 DAYS)
  593. DIPYRIDAMOLE [Interacting]
     Active Substance: DIPYRIDAMOLE
     Dosage: 2 DOSAGE FORM, QOD (1 EVERY 2 DAYS)
  594. DIPYRIDAMOLE [Interacting]
     Active Substance: DIPYRIDAMOLE
     Dosage: 1 DOSAGE FORM, QD (1 EVERY 1 DAYS)
  595. DIPYRIDAMOLE [Interacting]
     Active Substance: DIPYRIDAMOLE
     Dosage: 1 DOSAGE FORM, (1 EVERY 12 HOURS)
  596. DIPYRIDAMOLE [Interacting]
     Active Substance: DIPYRIDAMOLE
     Dosage: 25 MILLIGRAM
  597. DIPYRIDAMOLE [Interacting]
     Active Substance: DIPYRIDAMOLE
     Dosage: 1 DOSAGE FORM
  598. DIPYRIDAMOLE [Interacting]
     Active Substance: DIPYRIDAMOLE
     Dosage: 1 DOSAGE FORM, QD (1 EVERY 1 DAYS)
  599. DIPYRIDAMOLE [Interacting]
     Active Substance: DIPYRIDAMOLE
     Dosage: 360 MILLIGRAM, QD (1 EVERY 1 DAYS)
  600. DIPYRIDAMOLE [Interacting]
     Active Substance: DIPYRIDAMOLE
     Dosage: 1 DOSAGE FORM, (1 EVERY 12 HOURS)
  601. DIPYRIDAMOLE [Interacting]
     Active Substance: DIPYRIDAMOLE
     Dosage: 1 DOSAGE FORM, BID (2 EVERY 1 DAYS)
  602. DIPYRIDAMOLE [Interacting]
     Active Substance: DIPYRIDAMOLE
     Dosage: 0.5 MILLIGRAM
  603. DIPYRIDAMOLE [Interacting]
     Active Substance: DIPYRIDAMOLE
     Dosage: 1 DOSAGE FORM
  604. DIPYRIDAMOLE [Interacting]
     Active Substance: DIPYRIDAMOLE
     Dosage: UNK UNK, QD (1 EVERY 1 DAYS)
  605. DIPYRIDAMOLE [Interacting]
     Active Substance: DIPYRIDAMOLE
     Dosage: 2 DOSAGE FORM, BID (2 EVERY 1 DAYS
  606. DIPYRIDAMOLE [Interacting]
     Active Substance: DIPYRIDAMOLE
     Dosage: 0.5 MILLIGRAM
  607. DIPYRIDAMOLE [Interacting]
     Active Substance: DIPYRIDAMOLE
     Dosage: 25 MILLIGRAM
  608. DIPYRIDAMOLE [Interacting]
     Active Substance: DIPYRIDAMOLE
     Dosage: 200 MILLIGRAM, BID (2 EVERY 1 DAYS)
  609. GALANTAMINE HYDROBROMIDE [Interacting]
     Active Substance: GALANTAMINE HYDROBROMIDE
     Indication: Dementia
     Dosage: UNK
  610. GALANTAMINE HYDROBROMIDE [Interacting]
     Active Substance: GALANTAMINE HYDROBROMIDE
     Dosage: 16 MILLIGRAM
  611. GALANTAMINE HYDROBROMIDE [Interacting]
     Active Substance: GALANTAMINE HYDROBROMIDE
     Dosage: 16 MILLIGRAM, QD (1 EVERY 1 DAY)
  612. GALANTAMINE HYDROBROMIDE [Interacting]
     Active Substance: GALANTAMINE HYDROBROMIDE
     Dosage: 18 MILLIGRAM, QD (1 EVERY 1 DAY)
  613. OMEPRAZOLE MAGNESIUM [Interacting]
     Active Substance: OMEPRAZOLE MAGNESIUM
     Indication: Duodenal ulcer
     Dosage: UNK
  614. OMEPRAZOLE MAGNESIUM [Interacting]
     Active Substance: OMEPRAZOLE MAGNESIUM
     Indication: Small intestine carcinoma
     Dosage: 20 MILLIGRAM
  615. OMEPRAZOLE MAGNESIUM [Interacting]
     Active Substance: OMEPRAZOLE MAGNESIUM
     Indication: Chest pain
     Dosage: 20 MILLIGRAM, QD (1 EVERY 1 DAYS)
  616. OMEPRAZOLE MAGNESIUM [Interacting]
     Active Substance: OMEPRAZOLE MAGNESIUM
     Indication: Angina pectoris
     Dosage: 20 MILLIGRAM (1 EVERY 12 HOURS)
  617. OMEPRAZOLE MAGNESIUM [Interacting]
     Active Substance: OMEPRAZOLE MAGNESIUM
     Indication: Hypertension
  618. OXAZEPAM [Interacting]
     Active Substance: OXAZEPAM
     Indication: Insomnia
     Dosage: UNK
  619. OXAZEPAM [Interacting]
     Active Substance: OXAZEPAM
     Indication: Cerebrovascular accident
     Dosage: 150 MILLIGRAM, QD (1 EVERY 1 DAYS)
  620. OXAZEPAM [Interacting]
     Active Substance: OXAZEPAM
     Indication: Hypertension
     Dosage: 40 MILLIGRAM, QD (1 EVERY 1 DAYS)
  621. OXAZEPAM [Interacting]
     Active Substance: OXAZEPAM
     Indication: Coronary artery disease
     Dosage: 20 MILLIGRAM, QD (1 EVERY 1 DAYS)
  622. OXAZEPAM [Interacting]
     Active Substance: OXAZEPAM
     Indication: Angina pectoris
     Dosage: UNK
  623. OXAZEPAM [Interacting]
     Active Substance: OXAZEPAM
     Indication: Duodenal ulcer
     Dosage: 15 MILLIGRAM, QD (1 EVERY 1 DAYS)
  624. OXAZEPAM [Interacting]
     Active Substance: OXAZEPAM
     Dosage: 40 MILLIGRAM, QD (1 EVERY 1 DAYS)
  625. OXAZEPAM [Interacting]
     Active Substance: OXAZEPAM
     Dosage: 150 MILLIGRAM
  626. OXAZEPAM [Interacting]
     Active Substance: OXAZEPAM
     Dosage: UNK
  627. OXAZEPAM [Interacting]
     Active Substance: OXAZEPAM
     Dosage: UNK, QD (1 EVERY 1 DAY)
  628. OXAZEPAM [Interacting]
     Active Substance: OXAZEPAM
     Dosage: 15 MILLIGRAM, QD (1 EVERY 1 DAYS)
  629. OXAZEPAM [Interacting]
     Active Substance: OXAZEPAM
     Dosage: 20 MILLIGRAM, QD (1 EVERY 1 DAYS)
  630. OXAZEPAM [Interacting]
     Active Substance: OXAZEPAM
     Dosage: 360 MILLIGRAM, QD (1 EVERY 1 DAYS)
  631. QUINAPRIL HYDROCHLORIDE [Interacting]
     Active Substance: QUINAPRIL HYDROCHLORIDE
     Indication: Hypertension
     Dosage: UNK
  632. QUINAPRIL HYDROCHLORIDE [Interacting]
     Active Substance: QUINAPRIL HYDROCHLORIDE
     Indication: Coronary artery disease
     Dosage: 40 MILLIGRAM, QD (1 EVERY 1 DAYS)
  633. QUINAPRIL HYDROCHLORIDE [Interacting]
     Active Substance: QUINAPRIL HYDROCHLORIDE
     Indication: Angina pectoris
     Dosage: 20 MILLIGRAM, QD (1 EVERY 1 DAYS)
  634. QUINAPRIL HYDROCHLORIDE [Interacting]
     Active Substance: QUINAPRIL HYDROCHLORIDE
     Indication: Seizure prophylaxis
     Dosage: 20 MILLIGRAM
  635. QUINAPRIL HYDROCHLORIDE [Interacting]
     Active Substance: QUINAPRIL HYDROCHLORIDE
     Indication: Seizure
     Dosage: 40 MILLIGRAM
  636. QUINAPRIL HYDROCHLORIDE [Interacting]
     Active Substance: QUINAPRIL HYDROCHLORIDE
     Indication: Insomnia
     Dosage: 400 MILLIGRAM, QD (1 EVERY 1 DAYS)
  637. QUINAPRIL HYDROCHLORIDE [Interacting]
     Active Substance: QUINAPRIL HYDROCHLORIDE
     Indication: Fibromyalgia
     Dosage: 200 MILLIGRAM
  638. QUINAPRIL HYDROCHLORIDE [Interacting]
     Active Substance: QUINAPRIL HYDROCHLORIDE
     Indication: Pain
     Dosage: 20 MILLIGRAM (1 EVERY 12 HOURS)
  639. QUINAPRIL HYDROCHLORIDE [Interacting]
     Active Substance: QUINAPRIL HYDROCHLORIDE
     Indication: Chest pain
     Dosage: 800 MILLIGRAM, QD (1 EVERY 1 DAYS)
  640. QUINAPRIL HYDROCHLORIDE [Interacting]
     Active Substance: QUINAPRIL HYDROCHLORIDE
     Indication: Cerebrovascular accident
     Dosage: 200 MILLIGRAM (1 EVERY 6 HOURS)
  641. QUINAPRIL HYDROCHLORIDE [Interacting]
     Active Substance: QUINAPRIL HYDROCHLORIDE
     Dosage: 40 MILLIGRAM, QD (1 EVERY 1 DAYS)
  642. QUINAPRIL HYDROCHLORIDE [Interacting]
     Active Substance: QUINAPRIL HYDROCHLORIDE
     Dosage: 40 MILLIGRAM, QD (1 EVERY 1 DAYS)
  643. QUINAPRIL HYDROCHLORIDE [Interacting]
     Active Substance: QUINAPRIL HYDROCHLORIDE
     Dosage: 20 MILLIGRAM, BID (2 EVERY 1 DAY)
  644. QUINAPRIL HYDROCHLORIDE [Interacting]
     Active Substance: QUINAPRIL HYDROCHLORIDE
     Dosage: 200 MILLIGRAM, QID (4 EVERY 1 DAY)
  645. TIOTROPIUM [Interacting]
     Active Substance: TIOTROPIUM
     Indication: Chronic obstructive pulmonary disease
     Dosage: UNK
  646. TIOTROPIUM [Interacting]
     Active Substance: TIOTROPIUM
     Indication: Asthma
  647. ASPIRIN\CAFFEINE [Interacting]
     Active Substance: ASPIRIN\CAFFEINE
     Indication: Product used for unknown indication
     Dosage: UNK
  648. AGGRENOX [Interacting]
     Active Substance: ASPIRIN\DIPYRIDAMOLE
     Indication: Cerebrovascular accident
     Dosage: 1 DOSAGE FORM, QD (1 EVERY 1 DAY)
  649. AGGRENOX [Interacting]
     Active Substance: ASPIRIN\DIPYRIDAMOLE
     Indication: Hypertension
     Dosage: 2 DOSAGE FORM, QD (2 EVERY 1 DAYS)
  650. AGGRENOX [Interacting]
     Active Substance: ASPIRIN\DIPYRIDAMOLE
     Indication: Arthritis
     Dosage: 2 DOSAGE FORM, QD (1 EVERY 1 DAY)
  651. AGGRENOX [Interacting]
     Active Substance: ASPIRIN\DIPYRIDAMOLE
     Dosage: 2 DOSAGE FORM, QW (1 EVERY 1 WEEKS)
  652. AGGRENOX [Interacting]
     Active Substance: ASPIRIN\DIPYRIDAMOLE
     Dosage: 1 DOSAGE FORM, QD (2 EVERY 1 DAYS)
  653. AGGRENOX [Interacting]
     Active Substance: ASPIRIN\DIPYRIDAMOLE
     Dosage: 1 DOSAGE FORM
  654. AGGRENOX [Interacting]
     Active Substance: ASPIRIN\DIPYRIDAMOLE
     Dosage: UNK
  655. AGGRENOX [Interacting]
     Active Substance: ASPIRIN\DIPYRIDAMOLE
     Dosage: 50 MILLIGRAM
  656. AGGRENOX [Interacting]
     Active Substance: ASPIRIN\DIPYRIDAMOLE
     Dosage: 75 MILLIGRAM, QD (1 EVERY 1 DAYS)
  657. AGGRENOX [Interacting]
     Active Substance: ASPIRIN\DIPYRIDAMOLE
     Dosage: 50 MILLIGRAM, QD (1 EVERY 1 DAYS)
  658. AGGRENOX [Interacting]
     Active Substance: ASPIRIN\DIPYRIDAMOLE
     Dosage: 4 DOSAGE FORM, QD (1 EVERY 1 DAY)
  659. AGGRENOX [Interacting]
     Active Substance: ASPIRIN\DIPYRIDAMOLE
     Dosage: 2 DOSAGE FORM
  660. AGGRENOX [Interacting]
     Active Substance: ASPIRIN\DIPYRIDAMOLE
     Dosage: 1 DOSAGE FORM, BID (1 EVERY 12 HOURS)
  661. AGGRENOX [Interacting]
     Active Substance: ASPIRIN\DIPYRIDAMOLE
     Dosage: 500 MILLIGRAM, QD (1 EVERY 1 DAYS)
  662. DILTIAZEM HYDROCHLORIDE [Interacting]
     Active Substance: DILTIAZEM HYDROCHLORIDE
     Indication: Hypertension
     Dosage: UNK
  663. DILTIAZEM HYDROCHLORIDE [Interacting]
     Active Substance: DILTIAZEM HYDROCHLORIDE
     Indication: Coronary artery disease
     Dosage: 360 MILLIGRAM, QD (1 EVERY 1 DAY)
  664. DILTIAZEM HYDROCHLORIDE [Interacting]
     Active Substance: DILTIAZEM HYDROCHLORIDE
     Indication: Chest pain
     Dosage: 500 MILLIGRAM, QD (1 EVERY 1 DAY)
  665. DILTIAZEM HYDROCHLORIDE [Interacting]
     Active Substance: DILTIAZEM HYDROCHLORIDE
     Indication: Angina pectoris
  666. GALANTAMINE [Interacting]
     Active Substance: GALANTAMINE
     Indication: Dementia
     Dosage: 16 MILLIGRAM, QD (1 EVERY 1 DAY)
  667. GALANTAMINE [Interacting]
     Active Substance: GALANTAMINE
     Dosage: UNK
  668. GALANTAMINE [Interacting]
     Active Substance: GALANTAMINE
     Dosage: 18 MILLIGRAM
  669. GALANTAMINE [Interacting]
     Active Substance: GALANTAMINE
     Dosage: 18 MILLIGRAM, QD (1 EVERY 1 DAY)
  670. GALANTAMINE [Interacting]
     Active Substance: GALANTAMINE
     Dosage: 16 MILLIGRAM
  671. LEVALBUTEROL [Interacting]
     Active Substance: LEVALBUTEROL
     Indication: Product used for unknown indication
     Dosage: UNK
  672. PERSANTINE [Interacting]
     Active Substance: DIPYRIDAMOLE
     Indication: Cerebrovascular accident
     Dosage: 1 DOSAGE FORM
  673. PERSANTINE [Interacting]
     Active Substance: DIPYRIDAMOLE
     Dosage: 2 DOSAGE FORM, QD (1 EVERY 1 DAYS)
  674. PERSANTINE [Interacting]
     Active Substance: DIPYRIDAMOLE
     Dosage: UNK
  675. PERSANTINE [Interacting]
     Active Substance: DIPYRIDAMOLE
     Dosage: 1 DOSAGE FORM (1 EVERY 12 HOURS)
  676. PERSANTINE [Interacting]
     Active Substance: DIPYRIDAMOLE
     Dosage: 1 DOSAGE FORM, BID (2 EVERY 1 DAY)
  677. PERSANTINE [Interacting]
     Active Substance: DIPYRIDAMOLE
     Dosage: 2 DOSAGE FORM, BID (2 EVERY 1 DAY)
  678. PERSANTINE [Interacting]
     Active Substance: DIPYRIDAMOLE
     Dosage: 1 DOSAGE FORM, QD (1 EVERY 1 DAYS)
  679. PERSANTINE [Interacting]
     Active Substance: DIPYRIDAMOLE
     Dosage: 20 MILLIGRAM, QD (1 EVERY 1 DAYS)
  680. PERSANTINE [Interacting]
     Active Substance: DIPYRIDAMOLE
     Dosage: UNK, QD (1 EVERY 1 DAY)
  681. SPIRIVA [Interacting]
     Active Substance: TIOTROPIUM BROMIDE MONOHYDRATE
     Indication: Constipation
     Dosage: UNK
  682. SPIRIVA [Interacting]
     Active Substance: TIOTROPIUM BROMIDE MONOHYDRATE
     Indication: Chronic obstructive pulmonary disease
     Dosage: 1 DOSAGE FORM, QD (1 EVERY 1 DAYS)
  683. SPIRIVA [Interacting]
     Active Substance: TIOTROPIUM BROMIDE MONOHYDRATE
     Indication: Asthma
     Dosage: 18 MICROGRAM, QD (1 EVERY 1 DAYS)
  684. SPIRIVA [Interacting]
     Active Substance: TIOTROPIUM BROMIDE MONOHYDRATE
     Dosage: UNK
  685. SPIRIVA [Interacting]
     Active Substance: TIOTROPIUM BROMIDE MONOHYDRATE
     Dosage: 18 MICROGRAM
  686. SPIRIVA [Interacting]
     Active Substance: TIOTROPIUM BROMIDE MONOHYDRATE
     Dosage: UNK, QD (1 EVERY 1 DAYS)
  687. SPIRIVA [Interacting]
     Active Substance: TIOTROPIUM BROMIDE MONOHYDRATE
     Dosage: 18 MILLIGRAM, QD (1 EVERY 1 DAYS)
  688. SPIRIVA [Interacting]
     Active Substance: TIOTROPIUM BROMIDE MONOHYDRATE
     Dosage: 18 MILLIGRAM
  689. TIOTROPIUM BROMIDE MONOHYDRATE [Interacting]
     Active Substance: TIOTROPIUM BROMIDE MONOHYDRATE
     Indication: Constipation
     Dosage: UNK
  690. TIOTROPIUM BROMIDE MONOHYDRATE [Interacting]
     Active Substance: TIOTROPIUM BROMIDE MONOHYDRATE
     Indication: Chronic obstructive pulmonary disease
     Dosage: UNK
  691. TIOTROPIUM BROMIDE MONOHYDRATE [Interacting]
     Active Substance: TIOTROPIUM BROMIDE MONOHYDRATE
     Indication: Asthma
     Dosage: 18 MILLIGRAM, QD (1 EVERY 1 DAYS)
  692. TIOTROPIUM BROMIDE MONOHYDRATE [Interacting]
     Active Substance: TIOTROPIUM BROMIDE MONOHYDRATE
     Dosage: UNK UNK, QD (1 EVERY 1 DAYS)
  693. TIOTROPIUM BROMIDE MONOHYDRATE [Interacting]
     Active Substance: TIOTROPIUM BROMIDE MONOHYDRATE
     Dosage: 18 MICROGRAM, QD (1 EVERY 1 DAYS)
  694. TIOTROPIUM BROMIDE MONOHYDRATE [Interacting]
     Active Substance: TIOTROPIUM BROMIDE MONOHYDRATE
     Dosage: 1 DOSAGE FORM, QD (1 EVERY 1 DAYS)
  695. CRANBERRY [Interacting]
     Active Substance: CRANBERRY
     Indication: Bladder disorder
     Dosage: 500 MILLIGRAM (3 EVERY 1 DAYS)
  696. CRANBERRY [Interacting]
     Active Substance: CRANBERRY
     Dosage: 1500 MILLIGRAM (3 EVERY 1 DAYS)
  697. CRANBERRY [Interacting]
     Active Substance: CRANBERRY
     Dosage: UNK
  698. CRANBERRY [Interacting]
     Active Substance: CRANBERRY
     Dosage: 1500 MILLIGRAM (1 EVERY 1 DAYS)
  699. ACETAMINOPHEN\CAFFEINE\DIHYDROCODEINE BITARTRATE [Interacting]
     Active Substance: ACETAMINOPHEN\CAFFEINE\DIHYDROCODEINE BITARTRATE
     Indication: Pain
     Dosage: 650 MILLIGRAM, QD (1 EVERY 1 DAYS)
  700. MAGNESIUM ALUMINUM SILICATE [Interacting]
     Active Substance: MAGNESIUM ALUMINUM SILICATE
     Indication: Constipation
     Dosage: 620 MILLIGRAM BID (1 EVERY 12 HOURS)
  701. AMBROXOL HYDROCHLORIDE\CLENBUTEROL [Interacting]
     Active Substance: AMBROXOL HYDROCHLORIDE\CLENBUTEROL
     Indication: Product used for unknown indication
     Dosage: UNK
  702. AMITRIPTYLINE HYDROCHLORIDE\DIAZEPAM [Interacting]
     Active Substance: AMITRIPTYLINE HYDROCHLORIDE\DIAZEPAM
     Indication: Insomnia
     Dosage: 75 MILLIGRAM, QD (1 EVERY 1 DAYS)
  703. AMITRIPTYLINE HYDROCHLORIDE\DIAZEPAM [Interacting]
     Active Substance: AMITRIPTYLINE HYDROCHLORIDE\DIAZEPAM
     Dosage: UNK
  704. AMITRIPTYLINE HYDROCHLORIDE\DIAZEPAM [Interacting]
     Active Substance: AMITRIPTYLINE HYDROCHLORIDE\DIAZEPAM
     Dosage: UNK UNK, QD (1 EVERY 1 DAYS)
  705. AMITRIPTYLINE HYDROCHLORIDE\DIAZEPAM [Interacting]
     Active Substance: AMITRIPTYLINE HYDROCHLORIDE\DIAZEPAM
     Dosage: 50 MILLIGRAM, QD (1 EVERY 1 DAYS)
  706. AMITRIPTYLINE PAMOATE\PERPHENAZINE [Interacting]
     Active Substance: AMITRIPTYLINE PAMOATE\PERPHENAZINE
     Indication: Insomnia
     Dosage: UNK, QD (1 EVERY 1 DAYS)
  707. AMLODIPINE MESYLATE [Interacting]
     Active Substance: AMLODIPINE MESYLATE
     Indication: Hypertension
     Dosage: 5 MILLIGRAM, QD (1 EVERY 1 DAYS)
  708. AMLODIPINE MESYLATE [Interacting]
     Active Substance: AMLODIPINE MESYLATE
     Indication: Coronary artery disease
     Dosage: UNK
  709. AMLODIPINE MESYLATE [Interacting]
     Active Substance: AMLODIPINE MESYLATE
     Indication: Chest pain
  710. AMLODIPINE MESYLATE [Interacting]
     Active Substance: AMLODIPINE MESYLATE
     Indication: Angina pectoris
  711. AMITRIPTYLINE [Interacting]
     Active Substance: AMITRIPTYLINE
     Indication: Insomnia
     Dosage: 50 MILLIGRAM, QD (1 EVERY 1 DAYS)
  712. AMITRIPTYLINE [Interacting]
     Active Substance: AMITRIPTYLINE
     Dosage: 75 MILLIGRAM, QD (1 EVERY 1 DAYS)
  713. AMITRIPTYLINE [Interacting]
     Active Substance: AMITRIPTYLINE
     Dosage: 75 MILLIGRAM
  714. AMITRIPTYLINE [Interacting]
     Active Substance: AMITRIPTYLINE
     Dosage: UNK
  715. AMITRIPTYLINE [Interacting]
     Active Substance: AMITRIPTYLINE
     Dosage: 25 MILLIGRAM, QD (1 EVERY 1 DAYS)
  716. CARBAMAZEPINE [Interacting]
     Active Substance: CARBAMAZEPINE
     Indication: Seizure prophylaxis
     Dosage: 200 MILLIGRAM, BID (2 EVERY 1 DAYS)
  717. CARBAMAZEPINE [Interacting]
     Active Substance: CARBAMAZEPINE
     Indication: Prophylaxis
     Dosage: UNK
  718. CARBAMAZEPINE [Interacting]
     Active Substance: CARBAMAZEPINE
     Indication: Fibromyalgia
     Dosage: 400 MILLIGRAM, QD (1 EVERY 1 DAYS)
  719. CARBAMAZEPINE [Interacting]
     Active Substance: CARBAMAZEPINE
     Dosage: 100 MILLIGRAM
  720. CARBAMAZEPINE [Interacting]
     Active Substance: CARBAMAZEPINE
     Dosage: 5 MILLIGRAM, QID (1 EVERY 8 HOUR)
  721. CARBAMAZEPINE [Interacting]
     Active Substance: CARBAMAZEPINE
     Dosage: 200 MILLIGRAM
  722. CYCLOBENZAPRINE [Interacting]
     Active Substance: CYCLOBENZAPRINE
     Indication: Seizure prophylaxis
     Dosage: 5 MILLIGRAM
  723. CYCLOBENZAPRINE [Interacting]
     Active Substance: CYCLOBENZAPRINE
     Indication: Fibromyalgia
     Dosage: 2 MILLIGRAM
  724. CYCLOBENZAPRINE [Interacting]
     Active Substance: CYCLOBENZAPRINE
     Indication: Pain
     Dosage: UNK
  725. CYCLOBENZAPRINE [Interacting]
     Active Substance: CYCLOBENZAPRINE
     Dosage: 100 MILLIGRAM
  726. CYCLOBENZAPRINE [Interacting]
     Active Substance: CYCLOBENZAPRINE
     Dosage: 15 MILLIGRAM  (1 EVERY 8 HOURS)
  727. CYCLOBENZAPRINE [Interacting]
     Active Substance: CYCLOBENZAPRINE
     Dosage: 5 MILLIGRAM, (3 EVERY 1 DAYS)
  728. CYCLOBENZAPRINE [Interacting]
     Active Substance: CYCLOBENZAPRINE
     Dosage: 5 MILLIGRAM, QD (1 EVERY 1 DAYS)
  729. CYCLOBENZAPRINE [Interacting]
     Active Substance: CYCLOBENZAPRINE
     Dosage: 5 MILLIGRAM, QID (1 EVERY 8 HOURS)
  730. OXAZEPAM [Interacting]
     Active Substance: OXAZEPAM
     Indication: Insomnia
     Dosage: UNK, QD (1 EVERY 1 DAYS)
  731. OXAZEPAM [Interacting]
     Active Substance: OXAZEPAM
     Indication: Hypertension
     Dosage: 15 MILLIGRAM, QD ( 1 EVERY 1 DAYS)
  732. OXAZEPAM [Interacting]
     Active Substance: OXAZEPAM
     Indication: Coronary artery disease
     Dosage: 40 MILLIGRAM
  733. OXAZEPAM [Interacting]
     Active Substance: OXAZEPAM
     Indication: Duodenal ulcer
     Dosage: 20 MILLIGRAM
  734. OXAZEPAM [Interacting]
     Active Substance: OXAZEPAM
     Indication: Angina pectoris
     Dosage: 360 MILLIGRAM, QD (1 EVERY 1 DAYS)
  735. AMBROXOL\GUAIFENESIN\LEVALBUTEROL [Interacting]
     Active Substance: AMBROXOL\GUAIFENESIN\LEVALBUTEROL
     Indication: Product used for unknown indication
     Dosage: UNK
  736. ASPIRIN [Interacting]
     Active Substance: ASPIRIN
     Indication: Hypertension
     Dosage: UNK
  737. ASPIRIN [Interacting]
     Active Substance: ASPIRIN
     Indication: Coronary artery disease
  738. ASPIRIN [Interacting]
     Active Substance: ASPIRIN
     Indication: Angina pectoris
  739. ANHYDROUS CITRIC ACID\MAGNESIUM OXIDE\SODIUM PICOSULFATE [Interacting]
     Active Substance: ANHYDROUS CITRIC ACID\MAGNESIUM OXIDE\SODIUM PICOSULFATE
     Indication: Constipation
     Dosage: 2 DOSAGE FORM, QD (1 EVERY 1 DAYS)
  740. ANHYDROUS CITRIC ACID\MAGNESIUM OXIDE\SODIUM PICOSULFATE [Interacting]
     Active Substance: ANHYDROUS CITRIC ACID\MAGNESIUM OXIDE\SODIUM PICOSULFATE
     Dosage: 2 DOSAGE FORM, QD (1 EVERY 1 DAYS)
  741. CYCLOBENZAPRINE [Interacting]
     Active Substance: CYCLOBENZAPRINE
     Indication: Pain
     Dosage: UNK
  742. CYCLOBENZAPRINE [Interacting]
     Active Substance: CYCLOBENZAPRINE
     Indication: Fibromyalgia
     Dosage: 500 MILLIGRAM (1 EVERY 8 HOURS)
  743. CYCLOBENZAPRINE [Interacting]
     Active Substance: CYCLOBENZAPRINE
     Indication: Seizure prophylaxis
     Dosage: 5 MILLIGRAM, BID (2 EVERY 1 DAYS)
  744. CYCLOBENZAPRINE [Interacting]
     Active Substance: CYCLOBENZAPRINE
     Indication: Seizure
     Dosage: 200 MILLIGRAM (1 EVERY 12 HOURS)
  745. CYCLOBENZAPRINE [Interacting]
     Active Substance: CYCLOBENZAPRINE
     Dosage: 2 MILLIGRAM, QD (1 EVERY 1 DAYS)
  746. CYCLOBENZAPRINE [Interacting]
     Active Substance: CYCLOBENZAPRINE
     Dosage: 1.87 MILLIGRAM
  747. CYCLOBENZAPRINE [Interacting]
     Active Substance: CYCLOBENZAPRINE
     Dosage: 15 MILLIGRAM, TID (3 EVERY 1 DAYS)
  748. CYCLOBENZAPRINE [Interacting]
     Active Substance: CYCLOBENZAPRINE
     Dosage: 100 MILLIGRAM (1 EVERY 12 HOURS)
  749. CYCLOBENZAPRINE [Interacting]
     Active Substance: CYCLOBENZAPRINE
     Dosage: 5 MILLIGRAM (1 EVERY 8 HOURS)
  750. CYCLOBENZAPRINE [Interacting]
     Active Substance: CYCLOBENZAPRINE
     Dosage: 45 MILLIGRAM, QD (1 EVERY 1 DAYS)
  751. CYCLOBENZAPRINE [Interacting]
     Active Substance: CYCLOBENZAPRINE
     Dosage: 0.63 MILLIGRAM
  752. CYCLOBENZAPRINE [Interacting]
     Active Substance: CYCLOBENZAPRINE
     Dosage: 0.25 MILLIGRAM, QD (1 EVERY 1 DAYS)
  753. CYCLOBENZAPRINE [Interacting]
     Active Substance: CYCLOBENZAPRINE
     Dosage: 0.33 MILLIGRAM, QD (1 EVERY 1 DAYS)
  754. DIAZEPAM [Interacting]
     Active Substance: DIAZEPAM
     Indication: Insomnia
     Dosage: 360 MILLIGRAM, QD (1 EVERY 1 DAY)
  755. DIAZEPAM [Interacting]
     Active Substance: DIAZEPAM
     Indication: Coronary artery disease
     Dosage: UNK
  756. DIAZEPAM [Interacting]
     Active Substance: DIAZEPAM
     Indication: Chest pain
     Dosage: 15 MILLIGRAM, QD ( 1 EVERY 1 DAYS)
  757. DIAZEPAM [Interacting]
     Active Substance: DIAZEPAM
     Indication: Angina unstable
     Dosage: 360 MILLIGRAM, QD ( 1 EVERY 1 DAYS)
  758. DIAZEPAM [Interacting]
     Active Substance: DIAZEPAM
     Indication: Angina pectoris
     Dosage: 0.4 MILLIGRAM
  759. DIAZEPAM [Interacting]
     Active Substance: DIAZEPAM
     Indication: Hypertension
     Dosage: 75 MILLIGRAM
  760. DIAZEPAM [Interacting]
     Active Substance: DIAZEPAM
     Dosage: 500 MILLIGRAM, QD (1 EVERY 1 DAY)
  761. DIAZEPAM [Interacting]
     Active Substance: DIAZEPAM
     Dosage: 115 MILLIGRAM, QD (1 EVERY 1 DAY)
  762. DIAZEPAM [Interacting]
     Active Substance: DIAZEPAM
     Dosage: 300 MILLIGRAM, QD (1 EVERY 1 DAY)
  763. OXAZEPAM [Interacting]
     Active Substance: OXAZEPAM
     Indication: Insomnia
     Dosage: 360 MILLIGRAM, QD (1 EVERY 1 DAY)
  764. OXAZEPAM [Interacting]
     Active Substance: OXAZEPAM
     Indication: Hypertension
  765. OXAZEPAM [Interacting]
     Active Substance: OXAZEPAM
     Indication: Coronary artery disease
  766. DIAZEPAM [Interacting]
     Active Substance: DIAZEPAM
     Indication: Insomnia
     Dosage: 36 MILLIGRAM, QD (ROA: INTRAVENOUS)
  767. DIAZEPAM [Interacting]
     Active Substance: DIAZEPAM
     Indication: Coronary artery disease
  768. DIAZEPAM [Interacting]
     Active Substance: DIAZEPAM
     Indication: Chest pain
  769. DIAZEPAM [Interacting]
     Active Substance: DIAZEPAM
     Indication: Angina unstable
  770. DIAZEPAM [Interacting]
     Active Substance: DIAZEPAM
     Indication: Angina pectoris
  771. DOCUSATE SODIUM\PHENOLPHTHALEIN [Interacting]
     Active Substance: DOCUSATE SODIUM\PHENOLPHTHALEIN
     Indication: Pain
     Dosage: UNK
  772. ERGOCALCIFEROL [Interacting]
     Active Substance: ERGOCALCIFEROL
     Indication: Product used for unknown indication
     Dosage: UNK
  773. FRUCTOSE\GLYCERIN\SODIUM CHLORIDE [Interacting]
     Active Substance: FRUCTOSE\GLYCERIN\SODIUM CHLORIDE
     Indication: Product used for unknown indication
     Dosage: UNK
  774. AMINOPHYLLINE [Interacting]
     Active Substance: AMINOPHYLLINE
     Indication: Coronary artery disease
     Dosage: UNK
  775. AMINOPHYLLINE [Interacting]
     Active Substance: AMINOPHYLLINE
     Indication: Angina pectoris
     Dosage: 6 MILLIGRAM, QD (1 EVERY 1 DAY)
  776. AMINOPHYLLINE [Interacting]
     Active Substance: AMINOPHYLLINE
     Indication: Chest pain
  777. MORPHINE SULFATE [Interacting]
     Active Substance: MORPHINE SULFATE
     Indication: Pain
     Dosage: 10 MILLIGRAM, QD (1 EVERY 1 DAYS)
  778. MORPHINE SULFATE [Interacting]
     Active Substance: MORPHINE SULFATE
     Indication: Fibromyalgia
     Dosage: 100 MILLIGRAM, QD (1 EVERY 1 DAYS)
  779. MORPHINE SULFATE [Interacting]
     Active Substance: MORPHINE SULFATE
     Indication: Chest pain
     Dosage: 2 DOSAGE FORM, QD (1 EVERY 1 DAYS)
  780. MORPHINE SULFATE [Interacting]
     Active Substance: MORPHINE SULFATE
     Indication: Dyspnoea
     Dosage: 1 DOSAGE FORM, QD (1 EVERY 1 DAYS)
  781. MORPHINE SULFATE [Interacting]
     Active Substance: MORPHINE SULFATE
     Dosage: UNK
  782. MORPHINE SULFATE [Interacting]
     Active Substance: MORPHINE SULFATE
     Dosage: 20 MILLIGRAM, QD (1 EVERY 1 DAYS)
  783. PHENYLEPHRINE HYDROCHLORIDE [Interacting]
     Active Substance: PHENYLEPHRINE HYDROCHLORIDE
     Indication: Pain
     Dosage: UNK
  784. PHENYLEPHRINE HYDROCHLORIDE [Interacting]
     Active Substance: PHENYLEPHRINE HYDROCHLORIDE
     Indication: Cerebrovascular accident
  785. ASPIRIN [Interacting]
     Active Substance: ASPIRIN
     Indication: Hypertension
     Dosage: UNK
  786. ASPIRIN [Interacting]
     Active Substance: ASPIRIN
     Indication: Coronary artery disease
  787. ASPIRIN [Interacting]
     Active Substance: ASPIRIN
     Indication: Angina pectoris
  788. POLYSORBATE 20 [Interacting]
     Active Substance: POLYSORBATE 20
     Indication: Insomnia
     Dosage: UNK
  789. POLYSORBATE 40 [Interacting]
     Active Substance: POLYSORBATE 40
     Indication: Insomnia
     Dosage: UNK
  790. POLYSORBATE 80 [Interacting]
     Active Substance: POLYSORBATE 80
     Indication: Insomnia
     Dosage: UNK
  791. POLYSORBATE 85 [Interacting]
     Active Substance: POLYSORBATE 85
     Indication: Insomnia
     Dosage: UNK
  792. QUININE [Interacting]
     Active Substance: QUININE
     Indication: Pain
     Dosage: UNK
  793. GALANTAMINE HYDROBROMIDE [Suspect]
     Active Substance: GALANTAMINE HYDROBROMIDE
     Indication: Dementia
     Dosage: 16 MILLIGRAM, QD (1 EVERY 1 DAY)
  794. SALICYLAMIDE [Interacting]
     Active Substance: SALICYLAMIDE
     Indication: Pain
     Dosage: UNK
  795. GLYCERIN [Interacting]
     Active Substance: GLYCERIN
     Indication: Product used for unknown indication
     Dosage: UNK
  796. AMITRIPTYLINE HYDROCHLORIDE\PERPHENAZINE [Interacting]
     Active Substance: AMITRIPTYLINE HYDROCHLORIDE\PERPHENAZINE
     Indication: Insomnia
     Dosage: 75 MILLIGRAM, QD (1 EVERY 1 DAYS)
  797. AMITRIPTYLINE HYDROCHLORIDE\PERPHENAZINE [Interacting]
     Active Substance: AMITRIPTYLINE HYDROCHLORIDE\PERPHENAZINE
     Indication: Hypertension
     Dosage: 50 MILLIGRAM, QD (1 EVERY 1 DAYS)
  798. AMITRIPTYLINE HYDROCHLORIDE\PERPHENAZINE [Interacting]
     Active Substance: AMITRIPTYLINE HYDROCHLORIDE\PERPHENAZINE
     Indication: Fibromyalgia
  799. AMITRIPTYLINE HYDROCHLORIDE\PERPHENAZINE [Interacting]
     Active Substance: AMITRIPTYLINE HYDROCHLORIDE\PERPHENAZINE
     Indication: Duodenal ulcer
  800. AMITRIPTYLINE HYDROCHLORIDE\PERPHENAZINE [Interacting]
     Active Substance: AMITRIPTYLINE HYDROCHLORIDE\PERPHENAZINE
     Indication: Dementia
  801. AMITRIPTYLINE HYDROCHLORIDE\PERPHENAZINE [Interacting]
     Active Substance: AMITRIPTYLINE HYDROCHLORIDE\PERPHENAZINE
     Indication: Coronary artery disease
  802. AMITRIPTYLINE HYDROCHLORIDE\PERPHENAZINE [Interacting]
     Active Substance: AMITRIPTYLINE HYDROCHLORIDE\PERPHENAZINE
     Indication: Constipation
  803. AMITRIPTYLINE HYDROCHLORIDE\PERPHENAZINE [Interacting]
     Active Substance: AMITRIPTYLINE HYDROCHLORIDE\PERPHENAZINE
     Indication: Chest pain
  804. AMITRIPTYLINE HYDROCHLORIDE\PERPHENAZINE [Interacting]
     Active Substance: AMITRIPTYLINE HYDROCHLORIDE\PERPHENAZINE
     Indication: Arthritis
  805. AMITRIPTYLINE HYDROCHLORIDE\PERPHENAZINE [Interacting]
     Active Substance: AMITRIPTYLINE HYDROCHLORIDE\PERPHENAZINE
     Indication: Angina pectoris
  806. DILTIAZEM [Interacting]
     Active Substance: DILTIAZEM
     Indication: Hypertension
     Dosage: 360 MILLIGRAM, QD (1 EVERY 1 DAYS)
  807. DILTIAZEM [Interacting]
     Active Substance: DILTIAZEM
     Indication: Coronary artery disease
     Dosage: 360 MILLIGRAM, QD (1 EVERY 1 DAYS)
  808. DILTIAZEM [Interacting]
     Active Substance: DILTIAZEM
     Indication: Angina pectoris
     Dosage: UNK
  809. DILTIAZEM [Interacting]
     Active Substance: DILTIAZEM
     Indication: Chest pain
     Dosage: 36 MILLIGRAM, QD (1 EVERY 1 DAYS)
  810. DILTIAZEM [Interacting]
     Active Substance: DILTIAZEM
     Indication: Angina unstable
     Dosage: 15 MILLIGRAM, QD (1 EVERY 1 DAYS)
  811. DILTIAZEM [Interacting]
     Active Substance: DILTIAZEM
     Dosage: 36 MILLIGRAM, QD (1 EVERY 1 DAYS)
  812. DILTIAZEM [Interacting]
     Active Substance: DILTIAZEM
     Dosage: 0.4 MILLIGRAM
  813. DILTIAZEM [Interacting]
     Active Substance: DILTIAZEM
     Dosage: 75 MILLIGRAM
  814. DILTIAZEM [Interacting]
     Active Substance: DILTIAZEM
     Dosage: 500 MILLIGRAM, QD (1 EVERY 1 DAYS)
  815. DILTIAZEM [Interacting]
     Active Substance: DILTIAZEM
     Dosage: 115 MILLIGRAM, QD (1 EVERY 1 DAYS)
  816. DILTIAZEM [Interacting]
     Active Substance: DILTIAZEM
     Dosage: 300 MILLIGRAM, QD (1 EVERY 1 DAYS)
  817. CARBAMAZEPINE [Interacting]
     Active Substance: CARBAMAZEPINE
     Indication: Seizure prophylaxis
     Dosage: 5 MILLIGRAM
  818. CARBAMAZEPINE [Interacting]
     Active Substance: CARBAMAZEPINE
     Indication: Prophylaxis
     Dosage: 15 MILLIGRAM, TID (3 EVERY 1 DAY)
  819. CARBAMAZEPINE [Interacting]
     Active Substance: CARBAMAZEPINE
     Indication: Fibromyalgia
     Dosage: 100 MILLIGRAM
  820. CARBAMAZEPINE [Interacting]
     Active Substance: CARBAMAZEPINE
     Dosage: 2 MILLIGRAM
  821. CARBAMAZEPINE [Interacting]
     Active Substance: CARBAMAZEPINE
     Dosage: 5 MILLIGRAM, TID (3 EVERY 1 DAY)
  822. CYCLOBENZAPRINE HYDROCHLORIDE [Suspect]
     Active Substance: CYCLOBENZAPRINE HYDROCHLORIDE
     Indication: Seizure prophylaxis
     Dosage: 15 MILLIGRAM, TID (3 EVERY 1 DAY)
  823. CYCLOBENZAPRINE HYDROCHLORIDE [Suspect]
     Active Substance: CYCLOBENZAPRINE HYDROCHLORIDE
     Indication: Seizure
     Dosage: 1.87 MILLIGRAM, QD (1 EVER 1 DAY)
  824. CYCLOBENZAPRINE HYDROCHLORIDE [Suspect]
     Active Substance: CYCLOBENZAPRINE HYDROCHLORIDE
     Indication: Pain
     Dosage: 500 MILLIGRAM, TID (3 EVERY 1 DAY)
  825. CYCLOBENZAPRINE HYDROCHLORIDE [Suspect]
     Active Substance: CYCLOBENZAPRINE HYDROCHLORIDE
     Indication: Fibromyalgia
     Dosage: 200 MILLIGRAM
  826. CYCLOBENZAPRINE HYDROCHLORIDE [Suspect]
     Active Substance: CYCLOBENZAPRINE HYDROCHLORIDE
     Dosage: UNK
  827. CYCLOBENZAPRINE HYDROCHLORIDE [Suspect]
     Active Substance: CYCLOBENZAPRINE HYDROCHLORIDE
     Dosage: 45 MILLIGRAM, QD
  828. CYCLOBENZAPRINE HYDROCHLORIDE [Suspect]
     Active Substance: CYCLOBENZAPRINE HYDROCHLORIDE
     Dosage: 5 MILLIGRAM
  829. CYCLOBENZAPRINE HYDROCHLORIDE [Suspect]
     Active Substance: CYCLOBENZAPRINE HYDROCHLORIDE
     Dosage: 2 MILLIGRAM
  830. CYCLOBENZAPRINE HYDROCHLORIDE [Suspect]
     Active Substance: CYCLOBENZAPRINE HYDROCHLORIDE
     Dosage: 100 MILLIGRAM, QD (1 EVERY 1 DAY)
  831. CYCLOBENZAPRINE HYDROCHLORIDE [Suspect]
     Active Substance: CYCLOBENZAPRINE HYDROCHLORIDE
     Dosage: UNK
  832. CYCLOBENZAPRINE HYDROCHLORIDE [Suspect]
     Active Substance: CYCLOBENZAPRINE HYDROCHLORIDE
     Dosage: 5.61 MILLIGRAM, QD (1 EVERY 1 DAY)
  833. CYCLOBENZAPRINE HYDROCHLORIDE [Suspect]
     Active Substance: CYCLOBENZAPRINE HYDROCHLORIDE
     Dosage: 15 MILLIGRAM
  834. CYCLOBENZAPRINE HYDROCHLORIDE [Suspect]
     Active Substance: CYCLOBENZAPRINE HYDROCHLORIDE
     Dosage: 0.63 MILLIGRAM
  835. CYCLOBENZAPRINE HYDROCHLORIDE [Suspect]
     Active Substance: CYCLOBENZAPRINE HYDROCHLORIDE
     Dosage: 15 MILLIGRAM, QD (1 EVERY 1 DAYS)
  836. CYCLOBENZAPRINE HYDROCHLORIDE [Suspect]
     Active Substance: CYCLOBENZAPRINE HYDROCHLORIDE
     Dosage: 1.87 MILLIGRAM
  837. CYCLOBENZAPRINE HYDROCHLORIDE [Suspect]
     Active Substance: CYCLOBENZAPRINE HYDROCHLORIDE
     Dosage: 2 MILLIGRAM, QD (1 EVERY 1 DAY)
  838. CYCLOBENZAPRINE HYDROCHLORIDE [Suspect]
     Active Substance: CYCLOBENZAPRINE HYDROCHLORIDE
     Dosage: 100 MILLIGRAM
  839. CYCLOBENZAPRINE HYDROCHLORIDE [Suspect]
     Active Substance: CYCLOBENZAPRINE HYDROCHLORIDE
     Dosage: 5 MILLIGRAM, BID (2 EVERY 1 DAYS)
  840. CYCLOBENZAPRINE HYDROCHLORIDE [Suspect]
     Active Substance: CYCLOBENZAPRINE HYDROCHLORIDE
     Dosage: 200 MILLIGRAM, BID (1 EVERY 12 HOURS)
  841. CYCLOBENZAPRINE HYDROCHLORIDE [Suspect]
     Active Substance: CYCLOBENZAPRINE HYDROCHLORIDE
     Dosage: 5 MILLIGRAM, QID (1 EVERY 8 HOURS)
  842. CYCLOBENZAPRINE HYDROCHLORIDE [Suspect]
     Active Substance: CYCLOBENZAPRINE HYDROCHLORIDE
     Dosage: 100 MILLIGRAM, BID (1 EVERY 12 HOURS)
  843. CYCLOBENZAPRINE HYDROCHLORIDE [Suspect]
     Active Substance: CYCLOBENZAPRINE HYDROCHLORIDE
     Dosage: 5 MILLIGRAM, QD (1 EVERY 1 DAYS)
  844. CYCLOBENZAPRINE HYDROCHLORIDE [Suspect]
     Active Substance: CYCLOBENZAPRINE HYDROCHLORIDE
     Dosage: 10 MILLIGRAM, QD (1 EVERY 1 DAYS)
  845. CYCLOBENZAPRINE HYDROCHLORIDE [Suspect]
     Active Substance: CYCLOBENZAPRINE HYDROCHLORIDE
     Dosage: 500 MILLIGRAM, QID (1 EVERY 8 HOURS)
  846. DIPYRIDAMOLE [Interacting]
     Active Substance: DIPYRIDAMOLE
     Indication: Cerebrovascular accident
     Dosage: UNK
  847. DIPYRIDAMOLE [Interacting]
     Active Substance: DIPYRIDAMOLE
     Dosage: 2 DOSAGE FORM, QD (1 EVERY 1 DAYS)
  848. DIPYRIDAMOLE [Interacting]
     Active Substance: DIPYRIDAMOLE
     Dosage: 2 DOSAGE FORM
  849. DIPYRIDAMOLE [Interacting]
     Active Substance: DIPYRIDAMOLE
     Dosage: 1 DOSAGE FORM
  850. DIPYRIDAMOLE [Interacting]
     Active Substance: DIPYRIDAMOLE
     Dosage: 1 DOSAGE FORM, BID (2 EVERY 1 DAY)
  851. DIPYRIDAMOLE [Interacting]
     Active Substance: DIPYRIDAMOLE
     Dosage: 25 MILLIGRAM
  852. DIPYRIDAMOLE [Interacting]
     Active Substance: DIPYRIDAMOLE
     Dosage: 2 DOSAGE FORM, BID (1 EVERY 12 HOURS)
  853. DIPYRIDAMOLE [Interacting]
     Active Substance: DIPYRIDAMOLE
     Dosage: 0.5 MILLIGRAM
  854. DIPYRIDAMOLE [Interacting]
     Active Substance: DIPYRIDAMOLE
     Dosage: 400 MILLIGRAM, QD (1 EVERY 1 DAYS)
  855. DIPYRIDAMOLE [Interacting]
     Active Substance: DIPYRIDAMOLE
     Dosage: 5 MILLIGRAM
  856. DIPYRIDAMOLE [Interacting]
     Active Substance: DIPYRIDAMOLE
     Dosage: 360 MILLIGRAM, QD (1 EVERY 1 DAYS)
  857. GALANTAMINE HYDROBROMIDE [Interacting]
     Active Substance: GALANTAMINE HYDROBROMIDE
     Indication: Dementia
     Dosage: UNK
  858. TIOTROPIUM BROMIDE MONOHYDRATE [Interacting]
     Active Substance: TIOTROPIUM BROMIDE MONOHYDRATE
     Indication: Asthma
     Dosage: UNK
  859. TIOTROPIUM BROMIDE MONOHYDRATE [Interacting]
     Active Substance: TIOTROPIUM BROMIDE MONOHYDRATE
     Indication: Chronic obstructive pulmonary disease
     Dosage: UNK
  860. TIOTROPIUM BROMIDE MONOHYDRATE [Interacting]
     Active Substance: TIOTROPIUM BROMIDE MONOHYDRATE
     Dosage: 18 MICROGRAM
  861. TIOTROPIUM BROMIDE MONOHYDRATE [Interacting]
     Active Substance: TIOTROPIUM BROMIDE MONOHYDRATE
     Dosage: 1 DOSAGE FORM, QD (1 EVERY 1 DAY)
  862. ACETAMINOPHEN AND CODEINE [Suspect]
     Active Substance: ACETAMINOPHEN\CODEINE PHOSPHATE
     Indication: Pain
     Dosage: UNK
  863. DILTIAZEM HYDROCHLORIDE [Suspect]
     Active Substance: DILTIAZEM HYDROCHLORIDE
     Indication: Hypertension
     Dosage: 500 MILLIGRAM, QD (1 EVERY 1 DAYS)
  864. DILTIAZEM HYDROCHLORIDE [Suspect]
     Active Substance: DILTIAZEM HYDROCHLORIDE
     Indication: Coronary artery disease
     Dosage: 4 MILLIGRAM
  865. DILTIAZEM HYDROCHLORIDE [Suspect]
     Active Substance: DILTIAZEM HYDROCHLORIDE
     Indication: Chest pain
     Dosage: 36 MILLIGRAM, QD (1 EVERY 1DAY)
  866. DILTIAZEM HYDROCHLORIDE [Suspect]
     Active Substance: DILTIAZEM HYDROCHLORIDE
     Indication: Angina unstable
     Dosage: 300 MILLIGRAM, QD (1 EVERY 1 DAY)
  867. DILTIAZEM HYDROCHLORIDE [Suspect]
     Active Substance: DILTIAZEM HYDROCHLORIDE
     Indication: Angina pectoris
     Dosage: UNK
  868. DILTIAZEM HYDROCHLORIDE [Suspect]
     Active Substance: DILTIAZEM HYDROCHLORIDE
     Dosage: 360 MILLIGRAM, QD (1 EVERY 1 DAYS)
  869. DILTIAZEM HYDROCHLORIDE [Suspect]
     Active Substance: DILTIAZEM HYDROCHLORIDE
     Dosage: 115 MILLIGRAM, QD
  870. DILTIAZEM HYDROCHLORIDE [Suspect]
     Active Substance: DILTIAZEM HYDROCHLORIDE
     Dosage: 16 MILLIGRAM, QD (1 EVERY 1 DAY)
  871. DILTIAZEM HYDROCHLORIDE [Suspect]
     Active Substance: DILTIAZEM HYDROCHLORIDE
     Dosage: 75 MILLIGRAM, QD (1 EVERY 1 DAY)
  872. GALANTAMINE HYDROBROMIDE [Suspect]
     Active Substance: GALANTAMINE HYDROBROMIDE
     Indication: Dementia
     Dosage: 16 MILLIGRAM, QD (1 EVERY 1 DAYS)
  873. GALANTAMINE HYDROBROMIDE [Suspect]
     Active Substance: GALANTAMINE HYDROBROMIDE
     Dosage: UNK
  874. QUINAPRIL HYDROCHLORIDE [Suspect]
     Active Substance: QUINAPRIL HYDROCHLORIDE
     Indication: Hypertension
     Dosage: 20 MILLIGRAM, QD (1 EVERY 1 DAYS)
  875. QUINAPRIL HYDROCHLORIDE [Suspect]
     Active Substance: QUINAPRIL HYDROCHLORIDE
     Indication: Coronary artery disease
     Dosage: 40 MILLIGRAM, QD (1 EVERY 1 DAYS)
  876. QUINAPRIL HYDROCHLORIDE [Suspect]
     Active Substance: QUINAPRIL HYDROCHLORIDE
     Dosage: UNK
  877. PHENOLPHTHALEIN [Suspect]
     Active Substance: PHENOLPHTHALEIN
     Indication: Pain
     Dosage: UNK
  878. PERSANTINE [Interacting]
     Active Substance: DIPYRIDAMOLE
     Indication: Cerebrovascular accident
     Dosage: 2 DOSAGE FORM, QD (1 EVERY 1 DAYS)
  879. PERSANTINE [Interacting]
     Active Substance: DIPYRIDAMOLE
     Dosage: UNK
  880. PERSANTINE [Interacting]
     Active Substance: DIPYRIDAMOLE
     Dosage: 1 MILLIGRAM
  881. PERSANTINE [Interacting]
     Active Substance: DIPYRIDAMOLE
     Dosage: 25 MILLIGRAM
  882. PERSANTINE [Interacting]
     Active Substance: DIPYRIDAMOLE
     Dosage: 400 MILLIGRAM, QD (1 EVERY 1 DAY)
  883. PERSANTINE [Interacting]
     Active Substance: DIPYRIDAMOLE
     Dosage: 1 DOSAGE FORM
  884. PERSANTINE [Interacting]
     Active Substance: DIPYRIDAMOLE
     Dosage: 5 DOSAGE FORM
  885. PERSANTINE [Interacting]
     Active Substance: DIPYRIDAMOLE
     Dosage: 380 MILLIGRAM, QD (1 EVERY 1 DAY)
  886. PERSANTINE [Interacting]
     Active Substance: DIPYRIDAMOLE
     Dosage: UNK
  887. POTASSIUM SORBATE [Suspect]
     Active Substance: POTASSIUM SORBATE
     Indication: Product used for unknown indication
     Dosage: UNK
  888. AGGRENOX [Suspect]
     Active Substance: ASPIRIN\DIPYRIDAMOLE
     Indication: Cerebrovascular accident
     Dosage: UNK
  889. AGGRENOX [Suspect]
     Active Substance: ASPIRIN\DIPYRIDAMOLE
     Indication: Hypertension
     Dosage: 1 DOSAGE FORM, BID (2 EVERY 1 DAY)
  890. AGGRENOX [Suspect]
     Active Substance: ASPIRIN\DIPYRIDAMOLE
     Indication: Arthritis
     Dosage: 2 DOSAGE FORM
  891. TIOTROPIUM BROMIDE MONOHYDRATE [Suspect]
     Active Substance: TIOTROPIUM BROMIDE MONOHYDRATE
     Indication: Asthma
     Dosage: 18 MICROGRAM, QD (1 EVERY 1 DAY)
  892. TIOTROPIUM BROMIDE MONOHYDRATE [Suspect]
     Active Substance: TIOTROPIUM BROMIDE MONOHYDRATE
     Indication: Chronic obstructive pulmonary disease
     Dosage: UNK
  893. CARBAMAZEPINE [Suspect]
     Active Substance: CARBAMAZEPINE
     Indication: Seizure prophylaxis
     Dosage: 800 MILLIGRAM, BID (2 EVERY 1 DAY)
  894. CARBAMAZEPINE [Suspect]
     Active Substance: CARBAMAZEPINE
     Indication: Fibromyalgia
     Dosage: 200 MILLIGRAM
  895. CARBAMAZEPINE [Suspect]
     Active Substance: CARBAMAZEPINE
     Indication: Bladder disorder
     Dosage: UNK
  896. CARBAMAZEPINE [Suspect]
     Active Substance: CARBAMAZEPINE
     Dosage: 2 DOSAGE FORM, QD (1 EVERY 1 DAY)
  897. CARBAMAZEPINE [Suspect]
     Active Substance: CARBAMAZEPINE
     Dosage: 1 DOSAGE FORM, BID
  898. CARBAMAZEPINE [Suspect]
     Active Substance: CARBAMAZEPINE
     Dosage: 1000 MILLIGRAM
  899. CARBAMAZEPINE [Suspect]
     Active Substance: CARBAMAZEPINE
     Dosage: 200 MILLIGRAM, QD (1 EVERY 1 DAY)
  900. CARBAMAZEPINE [Suspect]
     Active Substance: CARBAMAZEPINE
     Dosage: 400 MILLIGRAM, BID (2 EVERY 1 DAY)
  901. CARBAMAZEPINE [Suspect]
     Active Substance: CARBAMAZEPINE
     Dosage: 10 MILLIGRAM
  902. CARBAMAZEPINE [Suspect]
     Active Substance: CARBAMAZEPINE
     Dosage: 2000 MILLIGRAM
  903. CARBAMAZEPINE [Suspect]
     Active Substance: CARBAMAZEPINE
     Dosage: 1 DOSAGE FORM, QD (1 EVERY 1 DAY)
  904. OXAZEPAM [Interacting]
     Active Substance: OXAZEPAM
     Indication: Insomnia
     Dosage: 40 MILLIGRAM, QD (1 EVERY 1 DAYS)
  905. OXAZEPAM [Interacting]
     Active Substance: OXAZEPAM
     Indication: Hypertension
  906. OXAZEPAM [Interacting]
     Active Substance: OXAZEPAM
     Indication: Coronary artery disease
  907. AMLODIPINE MESYLATE [Suspect]
     Active Substance: AMLODIPINE MESYLATE
     Indication: Hypertension
     Dosage: 5 MILLIGRAM, QD (1 EVERY 1 DAYS)
  908. AMLODIPINE MESYLATE [Suspect]
     Active Substance: AMLODIPINE MESYLATE
     Indication: Coronary artery disease
  909. AMLODIPINE MESYLATE [Suspect]
     Active Substance: AMLODIPINE MESYLATE
     Indication: Angina pectoris
  910. AMBROXOL HYDROCHLORIDE [Interacting]
     Active Substance: AMBROXOL HYDROCHLORIDE
     Indication: Product used for unknown indication
     Dosage: UNK
  911. MORPHINE SULFATE [Suspect]
     Active Substance: MORPHINE SULFATE
     Indication: Pain
     Dosage: 10 MILLIGRAM
  912. MORPHINE SULFATE [Suspect]
     Active Substance: MORPHINE SULFATE
     Indication: Fibromyalgia
     Dosage: 1 DOSAGE FORM, QD (1 EVERY 1 DAY)
  913. MORPHINE SULFATE [Suspect]
     Active Substance: MORPHINE SULFATE
     Indication: Chest pain
     Dosage: 2 DOSAGE FORM, QD (1 EVERY 1 DAYS)
  914. MORPHINE SULFATE [Suspect]
     Active Substance: MORPHINE SULFATE
     Dosage: UNK
  915. MORPHINE SULFATE [Suspect]
     Active Substance: MORPHINE SULFATE
     Dosage: 100 MILLIGRAM, QD (1 EVERY 1 DAY)
  916. ACETAMINOPHEN [Interacting]
     Active Substance: ACETAMINOPHEN
     Indication: Hypertension
     Dosage: 50 MILLIGRAM, QD (1 EVERY 1 DAYS))
  917. ACETAMINOPHEN [Interacting]
     Active Substance: ACETAMINOPHEN
     Indication: Coronary artery disease
     Dosage: 650 MILLIGRAM, QD (1 EVERY 1 DAY)
  918. ACETAMINOPHEN [Interacting]
     Active Substance: ACETAMINOPHEN
     Indication: Angina pectoris
     Dosage: 650 MILLIGRAM, QD (1 EVERY 6 HOURS)
  919. ACETAMINOPHEN [Interacting]
     Active Substance: ACETAMINOPHEN
     Indication: Radioactive iodine therapy
     Dosage: 600 MILLIGRAM, QD (1 EVERY 1 DAY)
  920. ACETAMINOPHEN [Interacting]
     Active Substance: ACETAMINOPHEN
     Indication: Chest pain
     Dosage: 650 MILLIGRAM
  921. ACETAMINOPHEN [Interacting]
     Active Substance: ACETAMINOPHEN
     Indication: Pain
     Dosage: 60 MILLIGRAM
  922. ACETAMINOPHEN [Interacting]
     Active Substance: ACETAMINOPHEN
     Indication: Chronic obstructive pulmonary disease
     Dosage: UNK
  923. ACETAMINOPHEN [Interacting]
     Active Substance: ACETAMINOPHEN
     Indication: Cerebrovascular accident
  924. ACETAMINOPHEN [Interacting]
     Active Substance: ACETAMINOPHEN
     Indication: Fibromyalgia
  925. SPIRIVA [Interacting]
     Active Substance: TIOTROPIUM BROMIDE MONOHYDRATE
     Indication: Chronic obstructive pulmonary disease
     Dosage: 18 MICROGRAM, QD (1 EVERY 1 DAYS)
  926. SPIRIVA [Interacting]
     Active Substance: TIOTROPIUM BROMIDE MONOHYDRATE
     Indication: Constipation
     Dosage: 18 MILLIGRAM, QD (1 EVERY 1 DAY)
  927. SPIRIVA [Interacting]
     Active Substance: TIOTROPIUM BROMIDE MONOHYDRATE
     Indication: Asthma
  928. QUINAPRIL [Suspect]
     Active Substance: QUINAPRIL
     Indication: Seizure prophylaxis
     Dosage: 20 MILLIGRAM, QD (1 EVERY 1 DAYS)
  929. QUINAPRIL [Suspect]
     Active Substance: QUINAPRIL
     Indication: Seizure
  930. QUINAPRIL [Suspect]
     Active Substance: QUINAPRIL
     Indication: Pain
  931. QUINAPRIL [Suspect]
     Active Substance: QUINAPRIL
     Indication: Insomnia
  932. QUINAPRIL [Suspect]
     Active Substance: QUINAPRIL
     Indication: Hypertension
  933. QUINAPRIL [Suspect]
     Active Substance: QUINAPRIL
     Indication: Fibromyalgia
  934. QUINAPRIL [Suspect]
     Active Substance: QUINAPRIL
     Indication: Coronary artery disease
  935. QUINAPRIL [Suspect]
     Active Substance: QUINAPRIL
     Indication: Chest pain
  936. QUINAPRIL [Suspect]
     Active Substance: QUINAPRIL
     Indication: Cerebrovascular accident
  937. QUINAPRIL [Suspect]
     Active Substance: QUINAPRIL
     Indication: Angina pectoris
  938. HYDROCHLOROTHIAZIDE [Interacting]
     Active Substance: HYDROCHLOROTHIAZIDE
     Indication: Product used for unknown indication
     Dosage: UNK
  939. HERBALS [Interacting]
     Active Substance: HERBALS
     Indication: Bladder disorder
     Dosage: 1500 MILLIGRAM, QD (1 EVERY 1 DAYS)
  940. HERBALS [Interacting]
     Active Substance: HERBALS
     Dosage: UNK
  941. HERBALS [Interacting]
     Active Substance: HERBALS
     Dosage: 500 MILLIGRAM, Q8H (1 EVERY 8 HOURS)
  942. QUINAPRIL [Suspect]
     Active Substance: QUINAPRIL
     Indication: Seizure prophylaxis
     Dosage: 40 MILLIGRAM, QD (1 EVERY 1 DAYS)
  943. QUINAPRIL [Suspect]
     Active Substance: QUINAPRIL
     Indication: Seizure
     Dosage: UNK
  944. QUINAPRIL [Suspect]
     Active Substance: QUINAPRIL
     Indication: Pain
     Dosage: 400 MILLIGRAM, QD (1 EVERY 1 DAYS)
  945. QUINAPRIL [Suspect]
     Active Substance: QUINAPRIL
     Indication: Insomnia
     Dosage: 800 MILLIGRAM, QD (1 EVERY 1 DAYS)
  946. QUINAPRIL [Suspect]
     Active Substance: QUINAPRIL
     Indication: Hypertension
     Dosage: 200 MILLIGRAM, QID (1 EVERY 6 HOURS)
  947. QUINAPRIL [Suspect]
     Active Substance: QUINAPRIL
     Indication: Fibromyalgia
  948. QUINAPRIL [Suspect]
     Active Substance: QUINAPRIL
     Indication: Coronary artery disease
  949. QUINAPRIL [Suspect]
     Active Substance: QUINAPRIL
     Indication: Chest pain
  950. QUINAPRIL [Suspect]
     Active Substance: QUINAPRIL
     Indication: Cerebrovascular accident
  951. QUINAPRIL [Suspect]
     Active Substance: QUINAPRIL
     Indication: Angina pectoris
  952. SPIRIVA [Interacting]
     Active Substance: TIOTROPIUM BROMIDE MONOHYDRATE
     Indication: Chronic obstructive pulmonary disease
     Dosage: 18 MICROGRAM, QD (1 EVERY 1 DAYS)
  953. SPIRIVA [Interacting]
     Active Substance: TIOTROPIUM BROMIDE MONOHYDRATE
     Indication: Constipation
     Dosage: UNK
  954. SPIRIVA [Interacting]
     Active Substance: TIOTROPIUM BROMIDE MONOHYDRATE
     Dosage: UNK
  955. SPIRIVA [Interacting]
     Active Substance: TIOTROPIUM BROMIDE MONOHYDRATE
     Dosage: 18 MILLIGRAM
  956. SPIRIVA [Interacting]
     Active Substance: TIOTROPIUM BROMIDE MONOHYDRATE
     Dosage: 18 MILLIGRAM, QD (1 EVERY 1 DAY)
  957. CRANBERRY [Interacting]
     Active Substance: CRANBERRY
     Indication: Chronic obstructive pulmonary disease
     Dosage: UNK
  958. CRANBERRY [Interacting]
     Active Substance: CRANBERRY
     Indication: Bladder disorder
     Dosage: 500 MILLIGRAM, TID (3 EVERY 1 DAYS)
  959. CRANBERRY [Interacting]
     Active Substance: CRANBERRY
     Indication: Fibromyalgia
     Dosage: 4500 MILLIGRAM, TID (3 EVERY 1 DAYS)
  960. CRANBERRY [Interacting]
     Active Substance: CRANBERRY
     Dosage: 500 MILLIGRAM (1 EVERY 8 HOURS)
  961. CRANBERRY [Interacting]
     Active Substance: CRANBERRY
     Dosage: 1500 MILLIGRAM, TID (3 EVERY 1 DAYS)
  962. CRANBERRY [Interacting]
     Active Substance: CRANBERRY
     Dosage: 4500 MILLIGRAM
  963. CRANBERRY [Interacting]
     Active Substance: CRANBERRY
     Dosage: 500 MILLIGRAM
  964. CRANBERRY [Interacting]
     Active Substance: CRANBERRY
     Dosage: 4500 MILLIGRAM QD (1 EVERY 1 DAY)
  965. CRANBERRY [Interacting]
     Active Substance: CRANBERRY
     Dosage: 1500 MILLIGRAM QD (1 EVERY 1 DAY)
  966. CRANBERRY [Interacting]
     Active Substance: CRANBERRY
     Dosage: 1500 MILLIGRAM
  967. CRANBERRY [Interacting]
     Active Substance: CRANBERRY
     Dosage: 500 MILLIGRAM
  968. CRANBERRY [Interacting]
     Active Substance: CRANBERRY
     Dosage: 500 MILLIGRAM, QD (1 EVERY 1 DAYS)
  969. PERPHENAZINE [Interacting]
     Active Substance: PERPHENAZINE
     Indication: Insomnia
     Dosage: 75 MILLIGRAM, QD (1 EVERY 1 DAYS)
  970. HERBALS\PLANTAGO OVATA LEAF [Suspect]
     Active Substance: HERBALS\PLANTAGO OVATA LEAF
     Indication: Constipation
     Dosage: UNK
  971. HERBALS\PLANTAGO OVATA LEAF [Suspect]
     Active Substance: HERBALS\PLANTAGO OVATA LEAF
     Dosage: 500 MILLIGRAM, TID (1 EVERY 8 HOURS)
  972. HERBALS\PLANTAGO OVATA LEAF [Suspect]
     Active Substance: HERBALS\PLANTAGO OVATA LEAF
     Dosage: UNK, TID (1 EVERY 8 HOURS)
  973. MORPHINE SULFATE [Suspect]
     Active Substance: MORPHINE SULFATE
     Indication: Pain
     Dosage: 2 DOSAGE FORM, QD (1 EVERY 1 DAYS)
  974. MORPHINE SULFATE [Suspect]
     Active Substance: MORPHINE SULFATE
     Indication: Fibromyalgia
     Dosage: 1 DOSAGE FORM, QD (1 EVERY 1 DAYS)
  975. MORPHINE SULFATE [Suspect]
     Active Substance: MORPHINE SULFATE
     Indication: Chest pain
     Dosage: 20 MILLIGRAM, QD (1 EVERY 1 DAYS)
  976. MORPHINE SULFATE [Suspect]
     Active Substance: MORPHINE SULFATE
     Indication: Dyspnoea
     Dosage: UNK
  977. MORPHINE SULFATE [Suspect]
     Active Substance: MORPHINE SULFATE
     Dosage: 10 MILLIGRAM, QD (1 EVERY 1 DAYS)
  978. MORPHINE SULFATE [Suspect]
     Active Substance: MORPHINE SULFATE
     Dosage: UNK, QD (1 EVERY 1 DAY)
  979. MORPHINE SULFATE [Suspect]
     Active Substance: MORPHINE SULFATE
     Dosage: 10 MILLIGRAM
  980. MORPHINE SULFATE [Suspect]
     Active Substance: MORPHINE SULFATE
     Dosage: UNK
  981. MORPHINE SULFATE [Suspect]
     Active Substance: MORPHINE SULFATE
     Dosage: 100 MILLIGRAM, QD (1 EVERY 1 DAYS)
  982. GALANTAMINE [Interacting]
     Active Substance: GALANTAMINE
     Indication: Dementia
     Dosage: UNK
  983. GALANTAMINE [Interacting]
     Active Substance: GALANTAMINE
     Dosage: 16 MILLIGRAM, QD (1 EVERY 1 DAY)
  984. GALANTAMINE [Interacting]
     Active Substance: GALANTAMINE
     Dosage: 18 MILLIGRAM, QD (1 EVERY 1 DAY)
  985. GALANTAMINE [Interacting]
     Active Substance: GALANTAMINE
     Dosage: 16 MILLIGRAM
  986. GLUCOSAMINE SULFATE [Interacting]
     Active Substance: GLUCOSAMINE SULFATE
     Indication: Arthritis
     Dosage: UNK
  987. GLUCOSAMINE SULFATE [Interacting]
     Active Substance: GLUCOSAMINE SULFATE
     Indication: Pain
     Dosage: 500 MILLIGRAM, Q2D (1 EVERY 2 DAYS)
  988. GLUCOSAMINE SULFATE [Interacting]
     Active Substance: GLUCOSAMINE SULFATE
     Dosage: 500 MILLIGRAM, QD (1 EVERY 1 DAYS)
  989. GLUCOSAMINE SULFATE [Interacting]
     Active Substance: GLUCOSAMINE SULFATE
     Dosage: 500 MILLIGRAM, BID (2 EVERY 1 DAYS)
  990. GLUCOSAMINE SULFATE [Interacting]
     Active Substance: GLUCOSAMINE SULFATE
     Dosage: 1000 MILLIGRAM, QD (1 EVERY 1 DAYS)
  991. GLUCOSAMINE SULFATE [Interacting]
     Active Substance: GLUCOSAMINE SULFATE
     Dosage: 2500 MILLIGRAM, QD (1 EVERY 1 DAYS)
  992. LEVOFLOXACIN HEMIHYDRATE [Interacting]
     Active Substance: LEVOFLOXACIN
     Indication: Thyroid disorder
     Dosage: 250 MILLIGRAM, QD (1 EVERY 1 DAY)
  993. LEVOFLOXACIN HEMIHYDRATE [Interacting]
     Active Substance: LEVOFLOXACIN
     Indication: Radioactive iodine therapy
     Dosage: 200 MILLIGRAM, QD (1 EVERY 1 DAY)
  994. LEVOFLOXACIN HEMIHYDRATE [Interacting]
     Active Substance: LEVOFLOXACIN
     Indication: Urinary tract infection
     Dosage: 15 MILLIGRAM, QD (1 EVERY 1 DAY)
  995. LEVOFLOXACIN HEMIHYDRATE [Interacting]
     Active Substance: LEVOFLOXACIN
     Dosage: 650 MILLIGRAM, QD (1 EVERY 1 DAY)
  996. LEVOFLOXACIN HEMIHYDRATE [Interacting]
     Active Substance: LEVOFLOXACIN
     Dosage: 600 MILLIGRAM, QD (1 EVERY 1 DAY)
  997. GALANTAMINE HYDROBROMIDE [Interacting]
     Active Substance: GALANTAMINE HYDROBROMIDE
     Indication: Dementia
     Dosage: 16 MILLIGRAM, QD (1 EVERY 1 DAY)
  998. GALANTAMINE HYDROBROMIDE [Interacting]
     Active Substance: GALANTAMINE HYDROBROMIDE
     Dosage: 16 MILLIGRAM
  999. GALANTAMINE HYDROBROMIDE [Interacting]
     Active Substance: GALANTAMINE HYDROBROMIDE
     Dosage: 18 MILLIGRAM, QD (1 EVERY 1 DAY)
  1000. GALANTAMINE HYDROBROMIDE [Interacting]
     Active Substance: GALANTAMINE HYDROBROMIDE
     Dosage: UNK
  1001. DILTIAZEM HYDROCHLORIDE [Suspect]
     Active Substance: DILTIAZEM HYDROCHLORIDE
     Indication: Hypertension
     Dosage: 360 MILLIGRAM, QD (1 EVERY 1 DAYS)
  1002. DILTIAZEM HYDROCHLORIDE [Suspect]
     Active Substance: DILTIAZEM HYDROCHLORIDE
     Indication: Coronary artery disease
     Dosage: UNK
  1003. DILTIAZEM HYDROCHLORIDE [Suspect]
     Active Substance: DILTIAZEM HYDROCHLORIDE
     Indication: Chest pain
     Dosage: 40 MILLIGRAM, QD (1 EVERY 1 DAYS)
  1004. DILTIAZEM HYDROCHLORIDE [Suspect]
     Active Substance: DILTIAZEM HYDROCHLORIDE
     Indication: Angina pectoris
     Dosage: 300 MILLIGRAM, QD (1 EVERY 1 DAYS)
  1005. DILTIAZEM HYDROCHLORIDE [Suspect]
     Active Substance: DILTIAZEM HYDROCHLORIDE
     Dosage: 15 MILLIGRAM, QD (1 EVERY 1 DAYS)
  1006. GALANTAMINE [Interacting]
     Active Substance: GALANTAMINE
     Indication: Dementia
     Dosage: 16 MILLIGRAM, QD (1 EVERY 1 DAY)
  1007. CARBAMAZEPINE [Suspect]
     Active Substance: CARBAMAZEPINE
     Indication: Seizure prophylaxis
     Dosage: 400 MILLIGRAM, BID (2 EVERY 1 DAY)
  1008. CARBAMAZEPINE [Suspect]
     Active Substance: CARBAMAZEPINE
     Indication: Fibromyalgia
     Dosage: 500 MILLIGRAM, QD (1 EVERY 1 DAYS)
  1009. CARBAMAZEPINE [Suspect]
     Active Substance: CARBAMAZEPINE
     Indication: Bladder disorder
     Dosage: 1 DOSAGE FORM, BID (1 EVERY 12 HOURS)
  1010. CARBAMAZEPINE [Suspect]
     Active Substance: CARBAMAZEPINE
     Indication: Pain
     Dosage: 500 MILLIGRAM, BID (1 EVERY 12 HOURS)
  1011. CARBAMAZEPINE [Suspect]
     Active Substance: CARBAMAZEPINE
     Dosage: 100 MILLIGRAM, QD (1 EVERY 1 DAYS)
  1012. CARBAMAZEPINE [Suspect]
     Active Substance: CARBAMAZEPINE
     Dosage: 200 MILLIGRAM, BID (2 EVERY 1 DAYS)
  1013. CARBAMAZEPINE [Suspect]
     Active Substance: CARBAMAZEPINE
     Dosage: 100 MILLIGRAM, BID (2 EVERY 1 DAYS)
  1014. CARBAMAZEPINE [Suspect]
     Active Substance: CARBAMAZEPINE
     Dosage: 800 MILLIGRAM, BID (2 EVERY 1 DAY)
  1015. CARBAMAZEPINE [Suspect]
     Active Substance: CARBAMAZEPINE
     Dosage: 2000 MILLIGRAM, QD (1 EVERY 1 DAYS)
  1016. CARBAMAZEPINE [Suspect]
     Active Substance: CARBAMAZEPINE
     Dosage: 200 MILLIGRAM, QD (1 EVERY 1 DAYS)
  1017. CARBAMAZEPINE [Suspect]
     Active Substance: CARBAMAZEPINE
     Dosage: 2 DOSAGE FORM, QD (1 EVERY 1 DAYS)
  1018. CARBAMAZEPINE [Suspect]
     Active Substance: CARBAMAZEPINE
     Dosage: 100 MILLIGRAM
  1019. CARBAMAZEPINE [Suspect]
     Active Substance: CARBAMAZEPINE
     Dosage: UNK
  1020. CARBAMAZEPINE [Suspect]
     Active Substance: CARBAMAZEPINE
     Dosage: 400 MILLIGRAM, QD (1 EVERY 1 DAY)
  1021. CARBAMAZEPINE [Suspect]
     Active Substance: CARBAMAZEPINE
     Dosage: 2 DOSAGE FORM, BID (1 EVERY 12 HOURS)
  1022. CARBAMAZEPINE [Suspect]
     Active Substance: CARBAMAZEPINE
     Dosage: 1 DOSAGE FORM
  1023. CARBAMAZEPINE [Suspect]
     Active Substance: CARBAMAZEPINE
     Dosage: 200 MILLIGRAM
  1024. CARBAMAZEPINE [Suspect]
     Active Substance: CARBAMAZEPINE
     Dosage: 1 DOSAGE FORM, QD (1 EVERY 1 DAYS)
  1025. CARBAMAZEPINE [Suspect]
     Active Substance: CARBAMAZEPINE
     Dosage: 10 MILLIGRAM, QD (1 EVERY 1 DAYS)
  1026. CARBAMAZEPINE [Suspect]
     Active Substance: CARBAMAZEPINE
     Dosage: 200 MILLIGRAM, Q2D (1 EVERY 2 DAYS)
  1027. CARBAMAZEPINE [Suspect]
     Active Substance: CARBAMAZEPINE
     Dosage: UNK, BID (2 EVERY 1 DAYS)
  1028. DIPYRIDAMOLE [Interacting]
     Active Substance: DIPYRIDAMOLE
     Indication: Cerebrovascular accident
     Dosage: 1 DOSAGE FORM, QD (1 EVERY 1 DAYS)
  1029. DIPYRIDAMOLE [Interacting]
     Active Substance: DIPYRIDAMOLE
     Dosage: 2 DOSAGE FORM, BID (2 EVERY 1 DAY)
  1030. DIPYRIDAMOLE [Interacting]
     Active Substance: DIPYRIDAMOLE
     Dosage: 5 DOSAGE FORM
  1031. DIPYRIDAMOLE [Interacting]
     Active Substance: DIPYRIDAMOLE
     Dosage: UNK, QD (1 EVERY 1 DAY)
  1032. DIPYRIDAMOLE [Interacting]
     Active Substance: DIPYRIDAMOLE
     Dosage: 400 MILLIGRAM, QD (1 EVERY 1 DAYS)
  1033. DIPYRIDAMOLE [Interacting]
     Active Substance: DIPYRIDAMOLE
     Dosage: 2 DOSAGE FORM, Q2D (2 EVERY 1 DAY)
  1034. DIPYRIDAMOLE [Interacting]
     Active Substance: DIPYRIDAMOLE
     Dosage: 5 MILLIGRAM, BID (1 EVERY 12 HOURS)
  1035. DIPYRIDAMOLE [Interacting]
     Active Substance: DIPYRIDAMOLE
     Dosage: 25 MILLIGRAM
  1036. DIPYRIDAMOLE [Interacting]
     Active Substance: DIPYRIDAMOLE
     Dosage: 1 DOSAGE FORM
  1037. DIPYRIDAMOLE [Interacting]
     Active Substance: DIPYRIDAMOLE
     Dosage: 1 MILLIGRAM, QD (1 EVERY 1 DAYS)
  1038. DIPYRIDAMOLE [Interacting]
     Active Substance: DIPYRIDAMOLE
     Dosage: 360 MILLIGRAM, QD (1 EVERY 1 DAYS)
  1039. DIPYRIDAMOLE [Interacting]
     Active Substance: DIPYRIDAMOLE
     Dosage: 2 DOSAGE FORM, BID (1 EVERY 12 HOURS)
  1040. DIPYRIDAMOLE [Interacting]
     Active Substance: DIPYRIDAMOLE
     Dosage: 200 MILLIGRAM, BID (2 EVERY 1 DAYS)
  1041. DIPYRIDAMOLE [Interacting]
     Active Substance: DIPYRIDAMOLE
     Dosage: 2 DOSAGE FORM, Q2D (1 EVERY 2 DAYS)
  1042. DIPYRIDAMOLE [Interacting]
     Active Substance: DIPYRIDAMOLE
     Dosage: 0.5 DOSAGE FORM
  1043. DIPYRIDAMOLE [Interacting]
     Active Substance: DIPYRIDAMOLE
     Dosage: 2 DOSAGE FORM, QD (1 EVERY 1 DAYS)
  1044. DIPYRIDAMOLE [Interacting]
     Active Substance: DIPYRIDAMOLE
     Dosage: UNK, Q2D (2 EVERY 1 DAYS)
  1045. DIPYRIDAMOLE [Interacting]
     Active Substance: DIPYRIDAMOLE
     Dosage: UNK
  1046. DIPYRIDAMOLE [Interacting]
     Active Substance: DIPYRIDAMOLE
     Dosage: 0.5 DOSAGE FORM
  1047. DIPYRIDAMOLE [Interacting]
     Active Substance: DIPYRIDAMOLE
     Dosage: 1 DOSAGE FORM, QD (2 EVERY 1 DAYS)
  1048. CYCLOBENZAPRINE [Interacting]
     Active Substance: CYCLOBENZAPRINE
     Indication: Pain
     Dosage: 200 MILLIGRAM, QD (1 EVERY 1 DAYS)
  1049. CYCLOBENZAPRINE [Interacting]
     Active Substance: CYCLOBENZAPRINE
     Indication: Fibromyalgia
     Dosage: 15 MILLIGRAM, QID (1 EVERY 8 HOURS)
  1050. CYCLOBENZAPRINE [Interacting]
     Active Substance: CYCLOBENZAPRINE
     Indication: Seizure prophylaxis
     Dosage: 5 MILLIGRAM, QID (1 EVERY 8 HOURS)
  1051. CYCLOBENZAPRINE [Interacting]
     Active Substance: CYCLOBENZAPRINE
     Indication: Seizure
     Dosage: 10 MILLIGRAM, QD (1 EVERY 1 DAYS)
  1052. CYCLOBENZAPRINE [Interacting]
     Active Substance: CYCLOBENZAPRINE
     Dosage: UNK
  1053. CYCLOBENZAPRINE [Interacting]
     Active Substance: CYCLOBENZAPRINE
     Dosage: 0.33 MILLIGRAM, QD (1 EVERY 1 DAYS)
  1054. CYCLOBENZAPRINE [Interacting]
     Active Substance: CYCLOBENZAPRINE
     Dosage: 1.87 MILLIGRAM, QD (1 EVERY 1 DAYS)
  1055. CYCLOBENZAPRINE [Interacting]
     Active Substance: CYCLOBENZAPRINE
     Dosage: 2 MILLIGRAM, QD (1 EVERY 1 DAYS)
  1056. CYCLOBENZAPRINE [Interacting]
     Active Substance: CYCLOBENZAPRINE
     Dosage: 200 MILLIGRAM, BID (1 EVERY 12 HOURS)
  1057. CYCLOBENZAPRINE [Interacting]
     Active Substance: CYCLOBENZAPRINE
     Dosage: 100 MILLIGRAM, BID (1 EVERY 12 HOURS)
  1058. CYCLOBENZAPRINE [Interacting]
     Active Substance: CYCLOBENZAPRINE
     Dosage: 5 MILLIGRAM
  1059. CYCLOBENZAPRINE [Interacting]
     Active Substance: CYCLOBENZAPRINE
     Dosage: 45 MILLIGRAM, QD (1 EVERY 1 DAYS)
  1060. CYCLOBENZAPRINE [Interacting]
     Active Substance: CYCLOBENZAPRINE
     Dosage: 0.63 MILLIGRAM
  1061. CYCLOBENZAPRINE [Interacting]
     Active Substance: CYCLOBENZAPRINE
     Dosage: 5 MILLIGRAM, BID (1 EVERY 12 HOURS)
  1062. CYCLOBENZAPRINE [Interacting]
     Active Substance: CYCLOBENZAPRINE
     Dosage: 0.5 MILLIGRAM, QD (1 EVERY 1 DAYS)
  1063. CYCLOBENZAPRINE [Interacting]
     Active Substance: CYCLOBENZAPRINE
     Dosage: 0.25 MILLIGRAM, QD (1 EVERY 1 DAYS)
  1064. CYCLOBENZAPRINE [Interacting]
     Active Substance: CYCLOBENZAPRINE
     Dosage: 200 MILLIGRAM
  1065. CYCLOBENZAPRINE [Interacting]
     Active Substance: CYCLOBENZAPRINE
     Dosage: 1.87 MICROGRAM
  1066. CYCLOBENZAPRINE [Interacting]
     Active Substance: CYCLOBENZAPRINE
     Dosage: 5 MICROGRAM, QID (1 EVERY 8 HOURS)
  1067. CYCLOBENZAPRINE [Interacting]
     Active Substance: CYCLOBENZAPRINE
     Dosage: 5.61 MILLIGRAM, QD (1 EVERY 1 DAYS)
  1068. CYCLOBENZAPRINE [Interacting]
     Active Substance: CYCLOBENZAPRINE
     Dosage: 5 MICROGRAM
  1069. CYCLOBENZAPRINE [Interacting]
     Active Substance: CYCLOBENZAPRINE
     Dosage: 15 MILLIGRAM, QD (1 EVERY 1 DAYS)
  1070. CYCLOBENZAPRINE [Interacting]
     Active Substance: CYCLOBENZAPRINE
     Dosage: 360 MILLIGRAM, QD (1 EVERY 1 DAYS)
  1071. CYCLOBENZAPRINE [Interacting]
     Active Substance: CYCLOBENZAPRINE
     Dosage: 1.8 MILLIGRAM, QD (1 EVERY 1 DAYS)
  1072. CYCLOBENZAPRINE [Interacting]
     Active Substance: CYCLOBENZAPRINE
     Dosage: 2 MILLIGRAM
  1073. CYCLOBENZAPRINE [Interacting]
     Active Substance: CYCLOBENZAPRINE
     Dosage: 200 MICROGRAM, Q2H (1 EVERY 2 HOURS)
  1074. CYCLOBENZAPRINE [Interacting]
     Active Substance: CYCLOBENZAPRINE
     Dosage: 0.63 MILLIGRAM, BID (1 EVERY 12 HOURS)
  1075. CYCLOBENZAPRINE [Interacting]
     Active Substance: CYCLOBENZAPRINE
     Dosage: 1.87 MILLIGRAM
  1076. CYCLOBENZAPRINE [Interacting]
     Active Substance: CYCLOBENZAPRINE
     Dosage: 15 MILLIGRAM, TID (3 EVERY 1 DAYS)
  1077. CYCLOBENZAPRINE [Interacting]
     Active Substance: CYCLOBENZAPRINE
     Dosage: 5 MILLIGRAM, TID (3 EVERY 1 DAYS)
  1078. CYCLOBENZAPRINE [Interacting]
     Active Substance: CYCLOBENZAPRINE
     Dosage: 1.87 MILLIGRAM, TID (3 EVERY 1 DAY)
  1079. CYCLOBENZAPRINE [Interacting]
     Active Substance: CYCLOBENZAPRINE
     Dosage: 5 MILLIGRAM, QD (1 EVERY 1 DAYS)
  1080. CYCLOBENZAPRINE [Interacting]
     Active Substance: CYCLOBENZAPRINE
     Dosage: 0.83 MILLIGRAM
  1081. CYCLOBENZAPRINE [Interacting]
     Active Substance: CYCLOBENZAPRINE
     Dosage: UNK
  1082. CYCLOBENZAPRINE [Interacting]
     Active Substance: CYCLOBENZAPRINE
     Dosage: 200 MICROGRAM, BID (2 EVERY 1 DAYS)
  1083. CYCLOBENZAPRINE [Interacting]
     Active Substance: CYCLOBENZAPRINE
     Dosage: 1 MILLIGRAM, QD (1 EVERY 1 DAY)
  1084. CYCLOBENZAPRINE [Interacting]
     Active Substance: CYCLOBENZAPRINE
     Dosage: 500 MILLIGRAM, QID (1 EVERY 8 HOURS)
  1085. CYCLOBENZAPRINE [Interacting]
     Active Substance: CYCLOBENZAPRINE
     Dosage: 15 MICROGRAM, QID (1 EVERY 8 HOURS)
  1086. CYCLOBENZAPRINE [Interacting]
     Active Substance: CYCLOBENZAPRINE
     Dosage: UNK
  1087. AMLODIPINE MESYLATE [Interacting]
     Active Substance: AMLODIPINE MESYLATE
     Indication: Hypertension
     Dosage: 5 MILLIGRAM, QD (1 EVERY 1 DAYS)
  1088. AMLODIPINE MESYLATE [Interacting]
     Active Substance: AMLODIPINE MESYLATE
     Indication: Coronary artery disease
     Dosage: UNK
  1089. AMLODIPINE MESYLATE [Interacting]
     Active Substance: AMLODIPINE MESYLATE
     Indication: Chest pain
  1090. AMLODIPINE MESYLATE [Interacting]
     Active Substance: AMLODIPINE MESYLATE
     Indication: Angina pectoris
  1091. CYCLOBENZAPRINE [Interacting]
     Active Substance: CYCLOBENZAPRINE
     Indication: Seizure prophylaxis
     Dosage: 15 MILLIGRAM, QID (1 EVERY 8 HOURS)
  1092. CYCLOBENZAPRINE [Interacting]
     Active Substance: CYCLOBENZAPRINE
     Indication: Fibromyalgia
     Dosage: 100 MILLIGRAM
  1093. CYCLOBENZAPRINE [Interacting]
     Active Substance: CYCLOBENZAPRINE
     Dosage: 2 MILLIGRAM
  1094. CYCLOBENZAPRINE [Interacting]
     Active Substance: CYCLOBENZAPRINE
     Dosage: 5 MILLIGRAM, QID (1 EVERY 8 HOURS)
  1095. CALCIUM ASCORBATE [Suspect]
     Active Substance: CALCIUM ASCORBATE
     Indication: Product used for unknown indication
     Dosage: UNK
  1096. AMITRIPTYLINE PAMOATE\PERPHENAZINE [Interacting]
     Active Substance: AMITRIPTYLINE PAMOATE\PERPHENAZINE
     Indication: Insomnia
     Dosage: UNK
  1097. AMITRIPTYLINE PAMOATE\PERPHENAZINE [Interacting]
     Active Substance: AMITRIPTYLINE PAMOATE\PERPHENAZINE
     Indication: Hypertension
     Dosage: UNK, QD (1 EVERY 1 DAY)
  1098. AMITRIPTYLINE PAMOATE\PERPHENAZINE [Interacting]
     Active Substance: AMITRIPTYLINE PAMOATE\PERPHENAZINE
     Indication: Fibromyalgia
     Dosage: 75 MILLIGRAM, QD (1 EVERY 1 DAY)
  1099. AMITRIPTYLINE PAMOATE\PERPHENAZINE [Interacting]
     Active Substance: AMITRIPTYLINE PAMOATE\PERPHENAZINE
     Indication: Duodenal ulcer
     Dosage: 50 MILLIGRAM, QD (1 EVERY 1 DAY)
  1100. AMITRIPTYLINE PAMOATE\PERPHENAZINE [Interacting]
     Active Substance: AMITRIPTYLINE PAMOATE\PERPHENAZINE
     Indication: Dementia
  1101. AMITRIPTYLINE PAMOATE\PERPHENAZINE [Interacting]
     Active Substance: AMITRIPTYLINE PAMOATE\PERPHENAZINE
     Indication: Coronary artery disease
  1102. AMITRIPTYLINE PAMOATE\PERPHENAZINE [Interacting]
     Active Substance: AMITRIPTYLINE PAMOATE\PERPHENAZINE
     Indication: Constipation
  1103. AMITRIPTYLINE PAMOATE\PERPHENAZINE [Interacting]
     Active Substance: AMITRIPTYLINE PAMOATE\PERPHENAZINE
     Indication: Chest pain
  1104. AMITRIPTYLINE PAMOATE\PERPHENAZINE [Interacting]
     Active Substance: AMITRIPTYLINE PAMOATE\PERPHENAZINE
     Indication: Arthritis
  1105. AMITRIPTYLINE PAMOATE\PERPHENAZINE [Interacting]
     Active Substance: AMITRIPTYLINE PAMOATE\PERPHENAZINE
     Indication: Angina pectoris
  1106. AMITRIPTYLINE HYDROCHLORIDE\PERPHENAZINE [Interacting]
     Active Substance: AMITRIPTYLINE HYDROCHLORIDE\PERPHENAZINE
     Indication: Insomnia
     Dosage: UNK
  1107. AMITRIPTYLINE HYDROCHLORIDE\PERPHENAZINE [Interacting]
     Active Substance: AMITRIPTYLINE HYDROCHLORIDE\PERPHENAZINE
     Indication: Hypertension
     Dosage: 75 MILLIGRAM, QD (1 EVERY 1 DAYS)
  1108. AMITRIPTYLINE HYDROCHLORIDE\PERPHENAZINE [Interacting]
     Active Substance: AMITRIPTYLINE HYDROCHLORIDE\PERPHENAZINE
     Indication: Fibromyalgia
     Dosage: 50 MILLIGRAM, QD (1 EVERY 1 DAYS)
  1109. AMITRIPTYLINE HYDROCHLORIDE\PERPHENAZINE [Interacting]
     Active Substance: AMITRIPTYLINE HYDROCHLORIDE\PERPHENAZINE
     Indication: Duodenal ulcer
  1110. AMITRIPTYLINE HYDROCHLORIDE\PERPHENAZINE [Interacting]
     Active Substance: AMITRIPTYLINE HYDROCHLORIDE\PERPHENAZINE
     Indication: Dementia
  1111. AMITRIPTYLINE HYDROCHLORIDE\PERPHENAZINE [Interacting]
     Active Substance: AMITRIPTYLINE HYDROCHLORIDE\PERPHENAZINE
     Indication: Coronary artery disease
  1112. AMITRIPTYLINE HYDROCHLORIDE\PERPHENAZINE [Interacting]
     Active Substance: AMITRIPTYLINE HYDROCHLORIDE\PERPHENAZINE
     Indication: Constipation
  1113. AMITRIPTYLINE HYDROCHLORIDE\PERPHENAZINE [Interacting]
     Active Substance: AMITRIPTYLINE HYDROCHLORIDE\PERPHENAZINE
     Indication: Chest pain
  1114. AMITRIPTYLINE HYDROCHLORIDE\PERPHENAZINE [Interacting]
     Active Substance: AMITRIPTYLINE HYDROCHLORIDE\PERPHENAZINE
     Indication: Arthritis
  1115. AMITRIPTYLINE HYDROCHLORIDE\PERPHENAZINE [Interacting]
     Active Substance: AMITRIPTYLINE HYDROCHLORIDE\PERPHENAZINE
     Indication: Angina pectoris
  1116. AGGRENOX [Interacting]
     Active Substance: ASPIRIN\DIPYRIDAMOLE
     Indication: Cerebrovascular accident
     Dosage: 1 DOSAGE FORM
  1117. AGGRENOX [Interacting]
     Active Substance: ASPIRIN\DIPYRIDAMOLE
     Indication: Hypertension
     Dosage: UNK
  1118. AGGRENOX [Interacting]
     Active Substance: ASPIRIN\DIPYRIDAMOLE
     Indication: Arthritis
     Dosage: 1 DOSAGE FORM, BID (2 EVERY 1 DAY)
  1119. AGGRENOX [Interacting]
     Active Substance: ASPIRIN\DIPYRIDAMOLE
     Dosage: 2 DOSAGE FORM, QW (1 EVERY 1 WEEK)
  1120. AGGRENOX [Interacting]
     Active Substance: ASPIRIN\DIPYRIDAMOLE
     Dosage: 2 DOSAGE FORM, Q2D (1 EVERY 2 DAYS)
  1121. AGGRENOX [Interacting]
     Active Substance: ASPIRIN\DIPYRIDAMOLE
     Dosage: 2 DOSAGE FORM, QD (1 EVERY 1 DAYS)
  1122. AGGRENOX [Interacting]
     Active Substance: ASPIRIN\DIPYRIDAMOLE
     Dosage: 2 DOSAGE FORM, BID (2 EVERY 1 DAY)
  1123. AGGRENOX [Interacting]
     Active Substance: ASPIRIN\DIPYRIDAMOLE
     Dosage: 50 MILLIGRAM
  1124. AGGRENOX [Interacting]
     Active Substance: ASPIRIN\DIPYRIDAMOLE
     Dosage: 75 MILLIGRAM, QD (1 EVERY 1 DAYS)
  1125. AGGRENOX [Interacting]
     Active Substance: ASPIRIN\DIPYRIDAMOLE
     Dosage: 50 MILLIGRAM, QD (1 EVERY 1 DAYS)
  1126. AGGRENOX [Interacting]
     Active Substance: ASPIRIN\DIPYRIDAMOLE
     Dosage: 4 DOSAGE FORM, QD (1 EVERY 1 DAYS)
  1127. AGGRENOX [Interacting]
     Active Substance: ASPIRIN\DIPYRIDAMOLE
     Dosage: 1 DOSAGE FORM, QD (1 EVERY 1 DAYS)
  1128. AGGRENOX [Interacting]
     Active Substance: ASPIRIN\DIPYRIDAMOLE
     Dosage: 50 DOSAGE FORM, QD (1 EVERY 1 DAYS)
  1129. HYDROCHLOROTHIAZIDE\QUINAPRIL HYDROCHLORIDE [Interacting]
     Active Substance: HYDROCHLOROTHIAZIDE\QUINAPRIL HYDROCHLORIDE
     Indication: Hypertension
     Dosage: 40 MILLIGRAM, QD (1 EVERY 1 DAYS)
  1130. HYDROCHLOROTHIAZIDE\QUINAPRIL HYDROCHLORIDE [Interacting]
     Active Substance: HYDROCHLOROTHIAZIDE\QUINAPRIL HYDROCHLORIDE
     Indication: Chest pain
     Dosage: UNK
  1131. HYDROCHLOROTHIAZIDE\QUINAPRIL HYDROCHLORIDE [Interacting]
     Active Substance: HYDROCHLOROTHIAZIDE\QUINAPRIL HYDROCHLORIDE
     Indication: Angina pectoris
     Dosage: 20 MILLIGRAM, QD (1 EVERY 1 DAYS)
  1132. HYDROCHLOROTHIAZIDE\QUINAPRIL HYDROCHLORIDE [Interacting]
     Active Substance: HYDROCHLOROTHIAZIDE\QUINAPRIL HYDROCHLORIDE
     Indication: Coronary artery disease
  1133. LACTULOSE [Interacting]
     Active Substance: LACTULOSE
     Indication: Constipation
     Dosage: 15 MILLILITER
  1134. LACTULOSE [Interacting]
     Active Substance: LACTULOSE
     Indication: Thyroid disorder
     Dosage: 15 MILLILITER, QD (1 EVERY 1 DAYS)
  1135. LACTULOSE [Interacting]
     Active Substance: LACTULOSE
     Indication: Radioactive iodine therapy
     Dosage: 15 MILLILITER
  1136. LACTULOSE [Interacting]
     Active Substance: LACTULOSE
     Dosage: UNK
  1137. LACTULOSE [Interacting]
     Active Substance: LACTULOSE
     Dosage: UNK
  1138. LACTULOSE [Interacting]
     Active Substance: LACTULOSE
     Dosage: 15 MILLILITER, QD (1 EVERY 1 DAYS)
  1139. ACETAMINOPHEN\CODEINE PHOSPHATE [Interacting]
     Active Substance: ACETAMINOPHEN\CODEINE PHOSPHATE
     Indication: Pain
     Dosage: UNK
  1140. MORPHINE SULFATE [Interacting]
     Active Substance: MORPHINE SULFATE
     Indication: Pain
     Dosage: 10 MILLIGRAM
  1141. MORPHINE SULFATE [Interacting]
     Active Substance: MORPHINE SULFATE
     Indication: Fibromyalgia
     Dosage: 10 MILLIGRAM, QD (1 EVERY 1 DAYS)
  1142. MORPHINE SULFATE [Interacting]
     Active Substance: MORPHINE SULFATE
     Indication: Chest pain
     Dosage: UNK
  1143. MORPHINE SULFATE [Interacting]
     Active Substance: MORPHINE SULFATE
     Dosage: 100 MILLIGRAM, QD (1 EVERY 1 DAYS)
  1144. MORPHINE SULFATE [Interacting]
     Active Substance: MORPHINE SULFATE
     Dosage: 10 MILLIGRAM, QD (1 EVERY 1 DAYS)
  1145. ASPIRIN [Interacting]
     Active Substance: ASPIRIN
     Indication: Hypertension
     Dosage: UNK
  1146. ASPIRIN [Interacting]
     Active Substance: ASPIRIN
     Indication: Coronary artery disease
     Dosage: 2 DOSAGE FORM
  1147. ASPIRIN [Interacting]
     Active Substance: ASPIRIN
     Indication: Cerebrovascular accident
     Dosage: 1 DOSAGE FORM, BID (1 EVERY 12 HOURS)
  1148. ASPIRIN [Interacting]
     Active Substance: ASPIRIN
     Indication: Angina pectoris
     Dosage: UNK
  1149. ASPIRIN [Interacting]
     Active Substance: ASPIRIN
     Dosage: 2 DOSAGE FORM, QD (1 EVERY 24 HOURS)
  1150. GLYCERIN [Interacting]
     Active Substance: GLYCERIN
     Dosage: UNK
  1151. ALBUTEROL [Concomitant]
     Active Substance: ALBUTEROL
     Indication: Product used for unknown indication
     Dosage: 100 MICROGRAM
  1152. ROSUVASTATIN CALCIUM [Concomitant]
     Active Substance: ROSUVASTATIN CALCIUM
     Indication: Cerebrovascular accident
     Dosage: 20 MILLIGRAM, BID (2 EVERY 1 DAYS)
  1153. MAGNESIUM HYDROXIDE [Concomitant]
     Active Substance: MAGNESIUM HYDROXIDE
     Indication: Constipation
     Dosage: 311 MILLIGRAM
  1154. TIOTROPIUM BROMIDE MONOHYDRATE [Concomitant]
     Active Substance: TIOTROPIUM BROMIDE MONOHYDRATE
     Dosage: UNK
  1155. HERBALS\PLANTAGO OVATA LEAF [Concomitant]
     Active Substance: HERBALS\PLANTAGO OVATA LEAF
     Dosage: UNK
  1156. SODIUM BENZOATE [Interacting]
     Active Substance: SODIUM BENZOATE
     Dosage: UNK
  1157. POTASSIUM SORBATE [Concomitant]
     Active Substance: POTASSIUM SORBATE
     Dosage: UNK
  1158. LACTULOSE [Concomitant]
     Active Substance: LACTULOSE
     Indication: Constipation
     Dosage: 15 MILLILITER, QD (1 EVERY 1 DAYS)
  1159. PHOSPHORIC ACID [Concomitant]
     Active Substance: PHOSPHORIC ACID
     Dosage: UNK
  1160. CALCIUM POLYCARBOPHIL [Concomitant]
     Active Substance: CALCIUM POLYCARBOPHIL
     Dosage: UNK
  1161. CALCIUM ASCORBATE [Concomitant]
     Active Substance: CALCIUM ASCORBATE
     Dosage: UNK
  1162. AGGRENOX [Concomitant]
     Active Substance: ASPIRIN\DIPYRIDAMOLE
     Indication: Cerebrovascular accident
     Dosage: 200 MILLIGRAM, BID (2 EVERY 1 DAYS)
  1163. AGGRENOX [Concomitant]
     Active Substance: ASPIRIN\DIPYRIDAMOLE
     Dosage: UNK
  1164. ACETAMINOPHEN [Concomitant]
     Active Substance: ACETAMINOPHEN
     Indication: Pain
     Dosage: 650 MILLIGRAM
  1165. ACETAMINOPHEN [Concomitant]
     Active Substance: ACETAMINOPHEN
     Dosage: 600 MILLIGRAM, QD (1 EVERY 1 DAYS)
  1166. AGGRENOX [Concomitant]
     Active Substance: ASPIRIN\DIPYRIDAMOLE
     Indication: Cerebrovascular accident
     Dosage: 25 MILLIGRAM, BID (2 EVERY 1 DAYS)
  1167. AMITRIPTYLINE [Concomitant]
     Active Substance: AMITRIPTYLINE
     Indication: Insomnia
     Dosage: 25 MILLIGRAM
  1168. AMITRIPTYLINE [Concomitant]
     Active Substance: AMITRIPTYLINE
     Dosage: 50 MILLIGRAM
  1169. Fibre soluble;Glycerol;Phosphoric acid;Potassium sorbate;Sodium benzoa [Concomitant]
     Indication: Constipation
     Dosage: UNK
  1170. GALANTAMINE HYDROBROMIDE [Concomitant]
     Active Substance: GALANTAMINE HYDROBROMIDE
     Indication: Dementia
     Dosage: 16 MILLIGRAM, QD (1 EVERY 1 DAYS)
  1171. GLUCOSAMINE SULFATE [Concomitant]
     Active Substance: GLUCOSAMINE SULFATE
     Indication: Arthritis
     Dosage: 500 MILLIGRAM, BID (2 EVERY 1 DAYS)
  1172. LEVOFLOXACIN HEMIHYDRATE [Concomitant]
     Active Substance: LEVOFLOXACIN
     Indication: Urinary tract infection
     Dosage: 250 MILLIGRAM, QD (1 EVERY 1 DAYS)
  1173. OMEPRAZOLE [Concomitant]
     Active Substance: OMEPRAZOLE
     Indication: Duodenal ulcer
     Dosage: 20 MILLIGRAM, QD (1 EVERY 1 DAYS)
  1174. SPIRIVA [Concomitant]
     Active Substance: TIOTROPIUM BROMIDE MONOHYDRATE
     Indication: Chronic obstructive pulmonary disease
     Dosage: 18 MICROGRAM, QD (1 EVERY 1 DAYS)
  1175. CRANBERRY [Concomitant]
     Active Substance: CRANBERRY
     Dosage: UNK
  1176. PSYLLIUM HUSK [Concomitant]
     Active Substance: PSYLLIUM HUSK
     Dosage: UNK
  1177. ZINC [Concomitant]
     Active Substance: ZINC
     Dosage: UNK
  1178. ASPIRIN [Concomitant]
     Active Substance: ASPIRIN
     Indication: Product used for unknown indication
     Dosage: UNK
  1179. ASPIRIN\SODIUM BICARBONATE [Concomitant]
     Active Substance: ASPIRIN\SODIUM BICARBONATE
     Indication: Product used for unknown indication
     Dosage: UNK
  1180. ASPIRIN\DIPYRIDAMOLE [Concomitant]
     Active Substance: ASPIRIN\DIPYRIDAMOLE
     Indication: Cerebrovascular accident
     Dosage: 2 DOSAGE FORM
  1181. ASPIRIN\DIPYRIDAMOLE [Concomitant]
     Active Substance: ASPIRIN\DIPYRIDAMOLE
     Dosage: 2 DOSAGE FORM, QD (1 EVERY 1 DAYS)
  1182. ASCORBIC ACID\CRANBERRY [Concomitant]
     Active Substance: ASCORBIC ACID\CRANBERRY
     Indication: Product used for unknown indication
     Dosage: 500 MILLIGRAM, QD (1 EVERY 1 DAYS)
  1183. FRUCTOSE\GLYCERIN\SODIUM CHLORIDE [Concomitant]
     Active Substance: FRUCTOSE\GLYCERIN\SODIUM CHLORIDE
     Indication: Product used for unknown indication
     Dosage: UNK
  1184. ASCORBIC ACID\CRANBERRY [Concomitant]
     Active Substance: ASCORBIC ACID\CRANBERRY
     Indication: Bladder ablation
     Dosage: 500 MILLIGRAM, QD (1 EVERY 1 DAYS)
  1185. ASCORBIC ACID\CRANBERRY [Concomitant]
     Active Substance: ASCORBIC ACID\CRANBERRY
     Dosage: UNK
  1186. VITAMIN C [Concomitant]
     Active Substance: ASCORBIC ACID
     Dosage: UNK
  1187. VITAMIN C [Concomitant]
     Active Substance: ASCORBIC ACID
     Dosage: 500 MILLIGRAM
  1188. VITAMIN C [Concomitant]
     Active Substance: ASCORBIC ACID
     Dosage: 500 MILLIGRAM, QD (1 EVERY 1 DAYS)
  1189. ZINC SALICYLATE [Concomitant]
     Active Substance: ZINC SALICYLATE
     Dosage: UNK
  1190. LEVOTHYROXINE SODIUM [Concomitant]
     Active Substance: LEVOTHYROXINE SODIUM
     Indication: Thyroid disorder
     Dosage: 0.088 MILLIGRAM, QD (1 EVERY 1 DAYS)
  1191. ATROPINE [Interacting]
     Active Substance: ATROPINE
  1192. NITROGLYCERIN [Interacting]
     Active Substance: NITROGLYCERIN
  1193. PAPAVERINE [Interacting]
     Active Substance: PAPAVERINE
  1194. PHENOBARBITAL [Suspect]
     Active Substance: PHENOBARBITAL

REACTIONS (24)
  - Cognitive disorder [Recovered/Resolved]
  - Fall [Recovered/Resolved]
  - Multiple drug therapy [Recovered/Resolved]
  - Sedation complication [Recovered/Resolved]
  - Orthostatic hypotension [Recovered/Resolved]
  - Constipation [Recovered/Resolved]
  - Balance disorder [Recovered/Resolved]
  - Sedation [Recovered/Resolved]
  - Blood calcium decreased [Recovered/Resolved]
  - Creatinine renal clearance decreased [Recovered/Resolved]
  - Depressed level of consciousness [Recovered/Resolved]
  - Hypotension [Recovered/Resolved]
  - Mobility decreased [Recovered/Resolved]
  - Pain [Recovered/Resolved]
  - Creatinine renal clearance increased [Recovered/Resolved]
  - Renal function test abnormal [Recovered/Resolved]
  - Dyspnoea [Recovered/Resolved]
  - Toxicity to various agents [Recovered/Resolved]
  - Drug interaction [Recovered/Resolved]
  - Dementia [Recovered/Resolved]
  - Drug abuse [Recovered/Resolved]
  - Off label use [Recovered/Resolved]
  - Overdose [Recovered/Resolved]
  - Product use in unapproved indication [Recovered/Resolved]
